FAERS Safety Report 23639682 (Version 44)
Quarter: 2025Q2

REPORT INFORMATION
  Report Type: Spontaneous
  Country: GB (occurrence: GB)
  Receive Date: 20240316
  Receipt Date: 20250621
  Transmission Date: 20250716
  Serious: Yes (Death, Other)
  Sender: CELLTRION
  Company Number: GB-CELLTRION INC.-2021GB006804

PATIENT

DRUGS (2504)
  1. RITUXIMAB [Suspect]
     Active Substance: RITUXIMAB
     Indication: Diffuse large B-cell lymphoma
     Route: 042
     Dates: start: 20201124
  2. RITUXIMAB [Suspect]
     Active Substance: RITUXIMAB
     Route: 042
  3. RITUXIMAB [Suspect]
     Active Substance: RITUXIMAB
     Route: 042
  4. RITUXIMAB [Suspect]
     Active Substance: RITUXIMAB
     Route: 065
  5. RITUXIMAB [Suspect]
     Active Substance: RITUXIMAB
     Route: 065
  6. RITUXIMAB [Suspect]
     Active Substance: RITUXIMAB
     Route: 042
     Dates: start: 20210105, end: 20210216
  7. RITUXIMAB [Suspect]
     Active Substance: RITUXIMAB
     Route: 042
     Dates: start: 20210216, end: 20210216
  8. RITUXIMAB [Suspect]
     Active Substance: RITUXIMAB
     Route: 042
     Dates: start: 20201221, end: 20201221
  9. RITUXIMAB [Suspect]
     Active Substance: RITUXIMAB
     Route: 065
  10. RITUXIMAB [Suspect]
     Active Substance: RITUXIMAB
     Route: 065
  11. RITUXIMAB [Suspect]
     Active Substance: RITUXIMAB
     Route: 042
     Dates: start: 20201215, end: 20201215
  12. RITUXIMAB [Suspect]
     Active Substance: RITUXIMAB
     Route: 042
     Dates: start: 20210105, end: 20210105
  13. RITUXIMAB [Suspect]
     Active Substance: RITUXIMAB
     Route: 042
     Dates: start: 20210126
  14. RITUXIMAB [Suspect]
     Active Substance: RITUXIMAB
     Route: 042
     Dates: start: 20210216
  15. RITUXIMAB [Suspect]
     Active Substance: RITUXIMAB
     Route: 042
     Dates: start: 20210309, end: 20210309
  16. RITUXIMAB [Suspect]
     Active Substance: RITUXIMAB
     Dosage: 3 ML, TIW; ADDITIONAL INFO: ROUTE:UNKNOWN ROUTE:UNKNOWN ROUTE:UNKNOWN ROUTE:UNKNOWN ROUTE:UNKNOWN RO
     Route: 065
     Dates: start: 20210216, end: 20210216
  17. RITUXIMAB [Suspect]
     Active Substance: RITUXIMAB
     Dosage: 3 ML, TIW / 3 MILLILITER, 3XW (3 ML, TIW)/9 ML, 1 WK 3 MILLILITER, 3XW (3 ML, TIW)
     Route: 065
     Dates: start: 20210216, end: 20210216
  18. RITUXIMAB [Suspect]
     Active Substance: RITUXIMAB
     Dosage: 3 ML, TIW
     Route: 065
     Dates: start: 20210216, end: 20210216
  19. RITUXIMAB [Suspect]
     Active Substance: RITUXIMAB
     Dosage: 3 ML, TIW / 3 MILLILITER, 3XW (3 ML, TIW)
     Route: 065
     Dates: start: 20210216, end: 20210216
  20. RITUXIMAB [Suspect]
     Active Substance: RITUXIMAB
     Dosage: 3 ML, TIW
     Route: 065
     Dates: start: 20210216, end: 20210216
  21. RITUXIMAB [Suspect]
     Active Substance: RITUXIMAB
     Route: 065
  22. RITUXIMAB [Suspect]
     Active Substance: RITUXIMAB
     Route: 065
  23. RITUXIMAB [Suspect]
     Active Substance: RITUXIMAB
     Route: 050
     Dates: start: 20201124
  24. RITUXIMAB [Suspect]
     Active Substance: RITUXIMAB
     Route: 065
  25. RITUXIMAB [Suspect]
     Active Substance: RITUXIMAB
     Route: 065
  26. RITUXIMAB [Suspect]
     Active Substance: RITUXIMAB
     Dosage: 3 ML, TIW (DOSAGE TEXT: 3 ML, TIW, TIME INTERVAL: 0.33 WK) / 9 ML, 1 WK 3 MILLILITER, 3XW (3 ML, TIW
     Route: 065
     Dates: start: 20201221, end: 20201221
  27. RITUXIMAB [Suspect]
     Active Substance: RITUXIMAB
     Dosage: 3 ML, TIW (DOSAGE TEXT: 3 ML, TIW, TIME INTERVAL: 0.33 WK); ADDITIONAL INFO: ROUTE:UNKNOWN ROUTE:UNK
     Route: 065
     Dates: start: 20201221, end: 20201221
  28. RITUXIMAB [Suspect]
     Active Substance: RITUXIMAB
     Dosage: 3 ML, TIW (DOSAGE TEXT: 3 ML, TIW, TIME INTERVAL: 0.33 WK)
     Route: 065
     Dates: start: 20201221, end: 20201221
  29. RITUXIMAB [Suspect]
     Active Substance: RITUXIMAB
     Dosage: 3 ML, TIW (DOSAGE TEXT: 3 ML, TIW, TIME INTERVAL: 0.33 WK)
     Route: 065
     Dates: start: 20201221, end: 20201221
  30. RITUXIMAB [Suspect]
     Active Substance: RITUXIMAB
     Dosage: 3 ML, TIW (DOSAGE TEXT: 3 ML, TIW, TIME INTERVAL: 0.33 WK)
     Route: 065
     Dates: start: 20201221, end: 20201221
  31. RITUXIMAB [Suspect]
     Active Substance: RITUXIMAB
     Route: 065
  32. RITUXIMAB [Suspect]
     Active Substance: RITUXIMAB
     Dosage: 600 MG, TIW (TIME INTERVAL: 0.33 WEEK, ADDITIONAL INFO: ROUTE:) / 600 MILLIGRAM, 3XW (600 MG, TIW)
     Route: 065
     Dates: start: 20210105, end: 20210216
  33. RITUXIMAB [Suspect]
     Active Substance: RITUXIMAB
     Dosage: 600 MG, TIW (TIME INTERVAL: 0.33 WEEK, ADDITIONAL INFO: ROUTE:); ADDITIONAL INFO: ROUTE:UNKNOWN ROUT
     Route: 042
     Dates: start: 20210105, end: 20210216
  34. RITUXIMAB [Suspect]
     Active Substance: RITUXIMAB
     Dosage: 600 MG, TIW (TIME INTERVAL: 0.33 WEEK, ADDITIONAL INFO: ROUTE:)
     Route: 065
     Dates: start: 20210105, end: 20210216
  35. RITUXIMAB [Suspect]
     Active Substance: RITUXIMAB
     Dosage: 600 MG, TIW (TIME INTERVAL: 0.33 WEEK, ADDITIONAL INFO: ROUTE:)
     Route: 065
     Dates: start: 20210105, end: 20210216
  36. RITUXIMAB [Suspect]
     Active Substance: RITUXIMAB
     Dosage: 600 MG, TIW (TIME INTERVAL: 0.33 WEEK, ADDITIONAL INFO: ROUTE:)
     Route: 042
     Dates: start: 20210105, end: 20210216
  37. RITUXIMAB [Suspect]
     Active Substance: RITUXIMAB
     Route: 065
     Dates: start: 20201221, end: 20201221
  38. RITUXIMAB [Suspect]
     Active Substance: RITUXIMAB
     Route: 065
  39. RITUXIMAB [Suspect]
     Active Substance: RITUXIMAB
     Route: 065
  40. RITUXIMAB [Suspect]
     Active Substance: RITUXIMAB
     Route: 065
  41. RITUXIMAB [Suspect]
     Active Substance: RITUXIMAB
     Route: 042
     Dates: start: 20201124
  42. RITUXIMAB [Suspect]
     Active Substance: RITUXIMAB
     Route: 042
     Dates: start: 20201124
  43. RITUXIMAB [Suspect]
     Active Substance: RITUXIMAB
     Route: 042
     Dates: start: 20201124
  44. RITUXIMAB [Suspect]
     Active Substance: RITUXIMAB
     Route: 042
     Dates: start: 20201124
  45. RITUXIMAB [Suspect]
     Active Substance: RITUXIMAB
     Route: 042
     Dates: start: 20201124
  46. RITUXIMAB [Suspect]
     Active Substance: RITUXIMAB
     Route: 050
     Dates: start: 20201221, end: 20201221
  47. RITUXIMAB [Suspect]
     Active Substance: RITUXIMAB
     Route: 050
     Dates: start: 20201221, end: 20201221
  48. RITUXIMAB [Suspect]
     Active Substance: RITUXIMAB
     Route: 050
     Dates: start: 20201221, end: 20201221
  49. RITUXIMAB [Suspect]
     Active Substance: RITUXIMAB
     Route: 050
     Dates: start: 20201221, end: 20201221
  50. RITUXIMAB [Suspect]
     Active Substance: RITUXIMAB
     Route: 050
     Dates: start: 20201221, end: 20201221
  51. RITUXIMAB [Suspect]
     Active Substance: RITUXIMAB
     Indication: Diffuse large B-cell lymphoma
     Route: 050
     Dates: start: 20210105, end: 20210216
  52. RITUXIMAB [Suspect]
     Active Substance: RITUXIMAB
     Route: 050
     Dates: start: 20210105, end: 20210216
  53. RITUXIMAB [Suspect]
     Active Substance: RITUXIMAB
     Route: 050
     Dates: start: 20210105, end: 20210216
  54. RITUXIMAB [Suspect]
     Active Substance: RITUXIMAB
     Route: 050
     Dates: start: 20210105, end: 20210216
  55. RITUXIMAB [Suspect]
     Active Substance: RITUXIMAB
     Route: 050
     Dates: start: 20210105, end: 20210216
  56. RITUXIMAB [Suspect]
     Active Substance: RITUXIMAB
     Route: 050
     Dates: start: 20210216, end: 20210216
  57. RITUXIMAB [Suspect]
     Active Substance: RITUXIMAB
     Route: 050
     Dates: start: 20210216, end: 20210216
  58. RITUXIMAB [Suspect]
     Active Substance: RITUXIMAB
     Route: 050
     Dates: start: 20210216, end: 20210216
  59. RITUXIMAB [Suspect]
     Active Substance: RITUXIMAB
     Route: 050
     Dates: start: 20210216, end: 20210216
  60. RITUXIMAB [Suspect]
     Active Substance: RITUXIMAB
     Route: 050
     Dates: start: 20210216, end: 20210216
  61. RITUXIMAB [Suspect]
     Active Substance: RITUXIMAB
     Route: 042
     Dates: start: 20201221
  62. RITUXIMAB [Suspect]
     Active Substance: RITUXIMAB
     Dates: start: 20201124
  63. RITUXIMAB [Suspect]
     Active Substance: RITUXIMAB
     Route: 065
     Dates: start: 20201124
  64. RITUXIMAB [Suspect]
     Active Substance: RITUXIMAB
     Dates: start: 20201124
  65. RITUXIMAB [Suspect]
     Active Substance: RITUXIMAB
     Route: 065
     Dates: start: 20201124
  66. RITUXIMAB [Suspect]
     Active Substance: RITUXIMAB
     Route: 050
     Dates: end: 20201221
  67. RITUXIMAB [Suspect]
     Active Substance: RITUXIMAB
     Route: 042
     Dates: start: 20210216, end: 20210216
  68. RITUXIMAB [Suspect]
     Active Substance: RITUXIMAB
     Route: 042
     Dates: start: 20210105, end: 20210216
  69. RITUXIMAB [Suspect]
     Active Substance: RITUXIMAB
     Route: 042
  70. RITUXIMAB [Suspect]
     Active Substance: RITUXIMAB
     Dates: start: 20210126
  71. RITUXIMAB [Suspect]
     Active Substance: RITUXIMAB
  72. RITUXIMAB [Suspect]
     Active Substance: RITUXIMAB
     Dosage: 3 MILLILITER, 3XW/9 ML, 1 WK, 3 MILLILITER, 3XW
     Route: 065
     Dates: start: 20210216, end: 20210216
  73. RITUXIMAB [Suspect]
     Active Substance: RITUXIMAB
     Route: 042
     Dates: start: 20210216
  74. RITUXIMAB [Suspect]
     Active Substance: RITUXIMAB
     Route: 065
  75. RITUXIMAB [Suspect]
     Active Substance: RITUXIMAB
  76. RITUXIMAB [Suspect]
     Active Substance: RITUXIMAB
  77. RITUXIMAB [Suspect]
     Active Substance: RITUXIMAB
  78. RITUXIMAB [Suspect]
     Active Substance: RITUXIMAB
  79. RITUXIMAB [Suspect]
     Active Substance: RITUXIMAB
     Dates: start: 20201222
  80. RITUXIMAB [Suspect]
     Active Substance: RITUXIMAB
     Route: 065
     Dates: start: 20201215
  81. RITUXIMAB [Suspect]
     Active Substance: RITUXIMAB
     Route: 065
     Dates: start: 20210302
  82. RITUXIMAB [Suspect]
     Active Substance: RITUXIMAB
     Route: 065
     Dates: start: 20210209
  83. RITUXIMAB [Suspect]
     Active Substance: RITUXIMAB
     Dates: start: 20210216, end: 20210216
  84. RITUXIMAB [Suspect]
     Active Substance: RITUXIMAB
     Dosage: 100 MG
     Dates: start: 20201124, end: 20210216
  85. RITUXIMAB [Suspect]
     Active Substance: RITUXIMAB
     Dates: start: 20201221, end: 20201221
  86. RITUXIMAB [Suspect]
     Active Substance: RITUXIMAB
     Dates: start: 20210105, end: 20210216
  87. RITUXIMAB [Suspect]
     Active Substance: RITUXIMAB
     Dates: start: 20210216
  88. RITUXIMAB [Suspect]
     Active Substance: RITUXIMAB
     Dosage: 3 MILLILITER, 3XW
     Dates: start: 20210216, end: 20210216
  89. RITUXIMAB [Suspect]
     Active Substance: RITUXIMAB
     Dosage: 9 MILLIGRAM/SQ. METER (9 MG/M2, TOTAL VOLUME PRIOR AE 560 MLDATE OF MOST RECENT DOSE/9 MG/M2, TOTAL
     Route: 065
     Dates: start: 20201124
  90. RITUXIMAB [Suspect]
     Active Substance: RITUXIMAB
     Dates: start: 20210216
  91. RITUXIMAB [Suspect]
     Active Substance: RITUXIMAB
     Dosage: 3 MILLILITER, 3XW (3 ML, TIW)/9 ML 1 WK, 3 MILLILITER, 3XW
     Route: 065
     Dates: start: 20210216, end: 20210216
  92. RITUXIMAB [Suspect]
     Active Substance: RITUXIMAB
     Dosage: 9 MILLIGRAM/SQ. METER (9 MG/M2, TOTAL VOLUME PRIOR AE 560 MLDATE OF MOST RECENT DOSE PRIOR TO FIRST
     Route: 065
     Dates: start: 20201124
  93. RITUXIMAB [Suspect]
     Active Substance: RITUXIMAB
  94. RITUXIMAB [Suspect]
     Active Substance: RITUXIMAB
  95. RITUXIMAB [Suspect]
     Active Substance: RITUXIMAB
     Route: 065
  96. RITUXIMAB [Suspect]
     Active Substance: RITUXIMAB
  97. RITUXIMAB [Suspect]
     Active Substance: RITUXIMAB
  98. RITUXIMAB [Suspect]
     Active Substance: RITUXIMAB
  99. RITUXIMAB [Suspect]
     Active Substance: RITUXIMAB
  100. RITUXIMAB [Suspect]
     Active Substance: RITUXIMAB
     Dosage: 3 ML, TIW
     Route: 065
     Dates: start: 20201221, end: 20201221
  101. RITUXIMAB [Suspect]
     Active Substance: RITUXIMAB
     Indication: Diffuse large B-cell lymphoma
     Dosage: 600 MG/M2, 3/WEEK (9 MG/M2, TOTAL VOLUME PRIOR AE 560 MLDATE OF MOST RECENT DOSE PRIOR TO FIRST EPIS
     Dates: start: 20201124
  102. RITUXIMAB [Suspect]
     Active Substance: RITUXIMAB
     Dates: start: 20210216, end: 20210216
  103. RITUXIMAB [Suspect]
     Active Substance: RITUXIMAB
     Dosage: 9 ML, 1/WEEK (100 MG)
     Dates: start: 20201124, end: 20210216
  104. RITUXIMAB [Suspect]
     Active Substance: RITUXIMAB
     Dosage: 1800 MG, 1/WEEK (DOSAGE TEXT: 100 MG)
     Dates: start: 20201221, end: 20201221
  105. RITUXIMAB [Suspect]
     Active Substance: RITUXIMAB
     Dates: start: 20210105, end: 20210216
  106. RITUXIMAB [Suspect]
     Active Substance: RITUXIMAB
     Route: 050
     Dates: start: 20210105, end: 20210216
  107. RITUXIMAB [Suspect]
     Active Substance: RITUXIMAB
     Route: 050
     Dates: start: 20201221, end: 20201221
  108. RITUXIMAB [Suspect]
     Active Substance: RITUXIMAB
     Route: 050
  109. RITUXIMAB [Suspect]
     Active Substance: RITUXIMAB
     Route: 050
  110. RITUXIMAB [Suspect]
     Active Substance: RITUXIMAB
     Route: 050
     Dates: start: 20210216, end: 20210216
  111. RITUXIMAB [Suspect]
     Active Substance: RITUXIMAB
     Route: 050
  112. RITUXIMAB [Suspect]
     Active Substance: RITUXIMAB
     Route: 050
  113. RITUXIMAB [Suspect]
     Active Substance: RITUXIMAB
     Route: 050
     Dates: start: 20201124
  114. RITUXIMAB [Suspect]
     Active Substance: RITUXIMAB
     Route: 050
     Dates: start: 20201124
  115. RITUXIMAB [Suspect]
     Active Substance: RITUXIMAB
     Route: 050
     Dates: start: 20210105, end: 20210216
  116. RITUXIMAB [Suspect]
     Active Substance: RITUXIMAB
     Route: 050
     Dates: start: 20201221, end: 20201221
  117. RITUXIMAB [Suspect]
     Active Substance: RITUXIMAB
     Route: 050
     Dates: start: 20210216, end: 20210216
  118. RITUXIMAB [Suspect]
     Active Substance: RITUXIMAB
     Route: 050
     Dates: start: 20210216, end: 20210216
  119. RITUXIMAB [Suspect]
     Active Substance: RITUXIMAB
     Route: 050
     Dates: start: 20201221, end: 20201221
  120. RITUXIMAB [Suspect]
     Active Substance: RITUXIMAB
     Route: 050
     Dates: start: 20210105, end: 20210216
  121. RITUXIMAB [Suspect]
     Active Substance: RITUXIMAB
     Route: 050
     Dates: start: 20210216, end: 20210216
  122. RITUXIMAB [Suspect]
     Active Substance: RITUXIMAB
     Route: 050
     Dates: start: 20210216, end: 20210216
  123. RITUXIMAB [Suspect]
     Active Substance: RITUXIMAB
     Route: 050
     Dates: start: 20210105, end: 20210216
  124. RITUXIMAB [Suspect]
     Active Substance: RITUXIMAB
     Route: 050
     Dates: start: 20201124
  125. RITUXIMAB [Suspect]
     Active Substance: RITUXIMAB
     Route: 050
     Dates: start: 20201221, end: 20201221
  126. RITUXIMAB [Suspect]
     Active Substance: RITUXIMAB
     Route: 050
     Dates: start: 20210105, end: 20210216
  127. RITUXIMAB [Suspect]
     Active Substance: RITUXIMAB
     Route: 050
  128. RITUXIMAB [Suspect]
     Active Substance: RITUXIMAB
     Route: 050
     Dates: start: 20201124
  129. RITUXIMAB [Suspect]
     Active Substance: RITUXIMAB
     Route: 050
     Dates: start: 20201124
  130. RITUXIMAB [Suspect]
     Active Substance: RITUXIMAB
     Route: 050
     Dates: start: 20201221, end: 20201221
  131. RITUXIMAB [Suspect]
     Active Substance: RITUXIMAB
     Route: 050
     Dates: start: 20210105, end: 20210216
  132. RITUXIMAB [Suspect]
     Active Substance: RITUXIMAB
     Dosage: 3ML, TIW/9 ML, 3 MILLILITER, 3XW
     Route: 065
     Dates: start: 20201221, end: 20201221
  133. RITUXIMAB [Suspect]
     Active Substance: RITUXIMAB
     Dosage: 3ML, TIW
     Route: 065
     Dates: start: 20201221, end: 20201221
  134. RITUXIMAB [Suspect]
     Active Substance: RITUXIMAB
     Dosage: 600 MG, TIW
     Route: 065
     Dates: start: 20210105, end: 20210216
  135. RITUXIMAB [Suspect]
     Active Substance: RITUXIMAB
     Dosage: 600 MG, TIW
     Route: 065
     Dates: start: 20210105, end: 20210216
  136. RITUXIMAB [Suspect]
     Active Substance: RITUXIMAB
     Dosage: 600 MG, TIW
     Route: 065
     Dates: start: 20210105, end: 20210216
  137. RITUXIMAB [Suspect]
     Active Substance: RITUXIMAB
     Dosage: 600 MG, TIW
     Route: 065
     Dates: start: 20210105, end: 20210216
  138. RITUXIMAB [Suspect]
     Active Substance: RITUXIMAB
     Dosage: 600 MG, TIW
     Route: 065
     Dates: start: 20210105, end: 20210216
  139. RITUXIMAB [Suspect]
     Active Substance: RITUXIMAB
     Dosage: 3 ML, TIW
     Route: 065
     Dates: start: 20210216, end: 20210216
  140. RITUXIMAB [Suspect]
     Active Substance: RITUXIMAB
     Dosage: 3 ML, TIW
     Route: 065
     Dates: start: 20210216, end: 20210216
  141. RITUXIMAB [Suspect]
     Active Substance: RITUXIMAB
     Dosage: 3 ML, TIW
     Route: 065
     Dates: start: 20210216, end: 20210216
  142. RITUXIMAB [Suspect]
     Active Substance: RITUXIMAB
     Dosage: 3 ML, TIW
     Route: 065
     Dates: start: 20210216, end: 20210216
  143. RITUXIMAB [Suspect]
     Active Substance: RITUXIMAB
     Dosage: 3 ML, TIW
     Route: 065
     Dates: start: 20210216, end: 20210216
  144. RITUXIMAB [Suspect]
     Active Substance: RITUXIMAB
     Dosage: 9 MILLIGRAM/SQ. METER (9 MG/M2, TOTAL VOLUME PRIOR AE 560 MLDATE OF MOST RECENT DOSE PRIOR TO FIRST
     Route: 065
     Dates: start: 20201124
  145. RITUXIMAB [Suspect]
     Active Substance: RITUXIMAB
     Dosage: TOTAL VOLUME PRIOR AE 560 MLDATE OF MOST RECENT DOSE PRIOR TO FIRST EPISODE OF NEUTROPENIA
     Dates: start: 20201124
  146. RITUXIMAB [Suspect]
     Active Substance: RITUXIMAB
     Dosage: TOTAL VOLUME PRIOR AE 560 MLDATE OF MOST RECENT DOSE PRIOR TO FIRST EPISODE OF NEUTROPENIA
     Dates: start: 20201124
  147. RITUXIMAB [Suspect]
     Active Substance: RITUXIMAB
     Dosage: TOTAL VOLUME PRIOR AE 560 MLDATE OF MOST RECENT DOSE PRIOR TO FIRST EPISODE OF NEUTROPENIA
     Dates: start: 20201124
  148. RITUXIMAB [Suspect]
     Active Substance: RITUXIMAB
     Dosage: TOTAL VOLUME PRIOR AE 560 MLDATE OF MOST RECENT DOSE PRIOR TO FIRST EPISODE OF NEUTROPENIA
     Dates: start: 20201124
  149. RITUXIMAB [Suspect]
     Active Substance: RITUXIMAB
     Route: 065
     Dates: start: 20210216, end: 20210216
  150. RITUXIMAB [Suspect]
     Active Substance: RITUXIMAB
     Route: 042
     Dates: end: 20210216
  151. RITUXIMAB [Suspect]
     Active Substance: RITUXIMAB
     Indication: Diffuse large B-cell lymphoma
     Route: 042
     Dates: start: 20210105, end: 20210216
  152. RITUXIMAB [Suspect]
     Active Substance: RITUXIMAB
     Route: 065
     Dates: start: 20201221, end: 20201221
  153. RITUXIMAB [Suspect]
     Active Substance: RITUXIMAB
     Route: 065
     Dates: start: 20210216, end: 20210216
  154. RITUXIMAB [Suspect]
     Active Substance: RITUXIMAB
     Route: 065
     Dates: start: 20210216, end: 20210216
  155. RITUXIMAB [Suspect]
     Active Substance: RITUXIMAB
     Route: 065
     Dates: start: 20201221, end: 20201221
  156. RITUXIMAB [Suspect]
     Active Substance: RITUXIMAB
     Route: 065
     Dates: start: 20201124
  157. RITUXIMAB [Suspect]
     Active Substance: RITUXIMAB
     Route: 065
  158. RITUXIMAB [Suspect]
     Active Substance: RITUXIMAB
     Route: 042
     Dates: start: 20201124
  159. RITUXIMAB [Suspect]
     Active Substance: RITUXIMAB
     Route: 065
     Dates: start: 20201221, end: 20201221
  160. RITUXIMAB [Suspect]
     Active Substance: RITUXIMAB
     Route: 042
     Dates: start: 20210105, end: 20210216
  161. RITUXIMAB [Suspect]
     Active Substance: RITUXIMAB
     Route: 065
     Dates: start: 20201221
  162. RITUXIMAB [Suspect]
     Active Substance: RITUXIMAB
     Route: 042
     Dates: start: 20201124
  163. RITUXIMAB [Suspect]
     Active Substance: RITUXIMAB
     Route: 065
     Dates: start: 20201124
  164. RITUXIMAB [Suspect]
     Active Substance: RITUXIMAB
     Route: 042
     Dates: start: 20210216, end: 20210216
  165. RITUXIMAB [Suspect]
     Active Substance: RITUXIMAB
     Route: 065
     Dates: start: 20201124
  166. RITUXIMAB [Suspect]
     Active Substance: RITUXIMAB
     Route: 042
     Dates: start: 20210216
  167. RITUXIMAB [Suspect]
     Active Substance: RITUXIMAB
     Route: 042
     Dates: start: 20201124
  168. RITUXIMAB [Suspect]
     Active Substance: RITUXIMAB
     Route: 042
     Dates: start: 20210105, end: 20210216
  169. RITUXIMAB [Suspect]
     Active Substance: RITUXIMAB
     Route: 065
     Dates: start: 20201124
  170. RITUXIMAB [Suspect]
     Active Substance: RITUXIMAB
     Route: 065
     Dates: start: 20210209
  171. RITUXIMAB [Suspect]
     Active Substance: RITUXIMAB
     Route: 042
     Dates: start: 20210105, end: 20210216
  172. RITUXIMAB [Suspect]
     Active Substance: RITUXIMAB
     Route: 065
     Dates: start: 20201124
  173. RITUXIMAB [Suspect]
     Active Substance: RITUXIMAB
     Route: 065
     Dates: start: 20210302
  174. RITUXIMAB [Suspect]
     Active Substance: RITUXIMAB
     Route: 065
     Dates: start: 20201221, end: 20201221
  175. RITUXIMAB [Suspect]
     Active Substance: RITUXIMAB
     Route: 042
     Dates: start: 20210105, end: 20210216
  176. RITUXIMAB [Suspect]
     Active Substance: RITUXIMAB
     Route: 065
     Dates: start: 20201124
  177. RITUXIMAB [Suspect]
     Active Substance: RITUXIMAB
     Route: 065
     Dates: start: 20201124
  178. RITUXIMAB [Suspect]
     Active Substance: RITUXIMAB
     Route: 042
     Dates: start: 20210216, end: 20210216
  179. RITUXIMAB [Suspect]
     Active Substance: RITUXIMAB
     Route: 065
     Dates: start: 20201222
  180. RITUXIMAB [Suspect]
     Active Substance: RITUXIMAB
     Route: 065
     Dates: start: 20210126
  181. RITUXIMAB [Suspect]
     Active Substance: RITUXIMAB
     Route: 065
     Dates: start: 20201215
  182. RITUXIMAB [Suspect]
     Active Substance: RITUXIMAB
     Route: 042
     Dates: start: 20210216
  183. RITUXIMAB [Suspect]
     Active Substance: RITUXIMAB
     Route: 065
     Dates: start: 20201124
  184. RITUXIMAB [Suspect]
     Active Substance: RITUXIMAB
     Route: 065
     Dates: start: 20201124
  185. RITUXIMAB [Suspect]
     Active Substance: RITUXIMAB
     Route: 065
  186. RITUXIMAB [Suspect]
     Active Substance: RITUXIMAB
     Route: 065
     Dates: start: 20201124
  187. RITUXIMAB [Suspect]
     Active Substance: RITUXIMAB
     Route: 065
     Dates: start: 20201124
  188. RITUXIMAB [Suspect]
     Active Substance: RITUXIMAB
     Route: 065
     Dates: start: 20210105, end: 20210216
  189. RITUXIMAB [Suspect]
     Active Substance: RITUXIMAB
     Route: 065
  190. RITUXIMAB [Suspect]
     Active Substance: RITUXIMAB
     Route: 065
     Dates: start: 20201124
  191. RITUXIMAB [Suspect]
     Active Substance: RITUXIMAB
     Route: 065
     Dates: start: 20201124
  192. RITUXIMAB [Suspect]
     Active Substance: RITUXIMAB
     Route: 065
     Dates: start: 20201221
  193. RITUXIMAB [Suspect]
     Active Substance: RITUXIMAB
     Route: 065
  194. RITUXIMAB [Suspect]
     Active Substance: RITUXIMAB
     Route: 065
     Dates: start: 20201221, end: 20201221
  195. RITUXIMAB [Suspect]
     Active Substance: RITUXIMAB
     Route: 065
     Dates: start: 20210216, end: 20210216
  196. RITUXIMAB [Suspect]
     Active Substance: RITUXIMAB
     Route: 065
     Dates: start: 20201221, end: 20201221
  197. RITUXIMAB [Suspect]
     Active Substance: RITUXIMAB
     Route: 065
     Dates: start: 20210105, end: 20210216
  198. RITUXIMAB [Suspect]
     Active Substance: RITUXIMAB
     Route: 065
  199. RITUXIMAB [Suspect]
     Active Substance: RITUXIMAB
     Route: 065
  200. RITUXIMAB [Suspect]
     Active Substance: RITUXIMAB
     Route: 065
     Dates: start: 20201124
  201. RITUXIMAB [Suspect]
     Active Substance: RITUXIMAB
     Indication: Diffuse large B-cell lymphoma
     Route: 065
     Dates: start: 20210216, end: 20210216
  202. RITUXIMAB [Suspect]
     Active Substance: RITUXIMAB
     Route: 042
     Dates: start: 20201124
  203. RITUXIMAB [Suspect]
     Active Substance: RITUXIMAB
     Route: 042
     Dates: start: 20210105, end: 20210216
  204. RITUXIMAB [Suspect]
     Active Substance: RITUXIMAB
     Route: 065
     Dates: start: 20201221, end: 20201221
  205. RITUXIMAB [Suspect]
     Active Substance: RITUXIMAB
     Route: 065
     Dates: start: 20210216, end: 20210216
  206. RITUXIMAB [Suspect]
     Active Substance: RITUXIMAB
     Route: 065
     Dates: start: 20210105, end: 20210216
  207. RITUXIMAB [Suspect]
     Active Substance: RITUXIMAB
     Route: 065
     Dates: start: 20201221, end: 20201221
  208. RITUXIMAB [Suspect]
     Active Substance: RITUXIMAB
     Route: 065
     Dates: start: 20210216, end: 20210216
  209. RITUXIMAB [Suspect]
     Active Substance: RITUXIMAB
     Route: 065
     Dates: start: 20210216, end: 20210216
  210. RITUXIMAB [Suspect]
     Active Substance: RITUXIMAB
     Route: 065
     Dates: start: 20201221, end: 20201221
  211. RITUXIMAB [Suspect]
     Active Substance: RITUXIMAB
     Route: 042
     Dates: start: 20201126
  212. RITUXIMAB [Suspect]
     Active Substance: RITUXIMAB
     Route: 065
     Dates: start: 20210105, end: 20210216
  213. RITUXIMAB [Suspect]
     Active Substance: RITUXIMAB
     Route: 065
     Dates: start: 20210216
  214. RITUXIMAB [Suspect]
     Active Substance: RITUXIMAB
     Dates: start: 20210216
  215. RITUXIMAB [Suspect]
     Active Substance: RITUXIMAB
     Route: 065
     Dates: start: 20210216, end: 20210216
  216. RITUXIMAB [Suspect]
     Active Substance: RITUXIMAB
     Route: 065
     Dates: start: 20201221, end: 20201221
  217. RITUXIMAB [Suspect]
     Active Substance: RITUXIMAB
     Route: 065
     Dates: start: 20210216, end: 20210216
  218. RITUXIMAB [Suspect]
     Active Substance: RITUXIMAB
     Route: 065
     Dates: start: 20210216, end: 20210216
  219. RITUXIMAB [Suspect]
     Active Substance: RITUXIMAB
     Route: 065
     Dates: start: 20201221, end: 20201221
  220. RITUXIMAB [Suspect]
     Active Substance: RITUXIMAB
     Route: 042
     Dates: start: 20201126, end: 20201126
  221. RITUXIMAB [Suspect]
     Active Substance: RITUXIMAB
     Dates: start: 20210126
  222. RITUXIMAB [Suspect]
     Active Substance: RITUXIMAB
     Dosage: 600 MG, TIW
     Route: 042
     Dates: start: 20210105
  223. RITUXIMAB [Suspect]
     Active Substance: RITUXIMAB
     Dates: start: 20210105, end: 20210216
  224. BENDAMUSTINE [Suspect]
     Active Substance: BENDAMUSTINE
     Indication: Prophylaxis
     Route: 065
  225. BENDAMUSTINE [Suspect]
     Active Substance: BENDAMUSTINE
     Route: 065
  226. BENDAMUSTINE [Suspect]
     Active Substance: BENDAMUSTINE
  227. BENDAMUSTINE [Suspect]
     Active Substance: BENDAMUSTINE
  228. BENDAMUSTINE [Suspect]
     Active Substance: BENDAMUSTINE
  229. BENDAMUSTINE [Suspect]
     Active Substance: BENDAMUSTINE
  230. BENDAMUSTINE [Suspect]
     Active Substance: BENDAMUSTINE
  231. BENDAMUSTINE [Suspect]
     Active Substance: BENDAMUSTINE
  232. BENDAMUSTINE [Suspect]
     Active Substance: BENDAMUSTINE
  233. BENDAMUSTINE [Suspect]
     Active Substance: BENDAMUSTINE
  234. BENDAMUSTINE [Suspect]
     Active Substance: BENDAMUSTINE
  235. BENDAMUSTINE [Suspect]
     Active Substance: BENDAMUSTINE
     Indication: Product used for unknown indication
  236. BENDAMUSTINE [Suspect]
     Active Substance: BENDAMUSTINE
  237. BENDAMUSTINE [Suspect]
     Active Substance: BENDAMUSTINE
  238. BENDAMUSTINE [Suspect]
     Active Substance: BENDAMUSTINE
  239. BENDAMUSTINE [Suspect]
     Active Substance: BENDAMUSTINE
  240. BENDAMUSTINE [Suspect]
     Active Substance: BENDAMUSTINE
     Indication: Product used for unknown indication
     Route: 050
  241. BENDAMUSTINE [Suspect]
     Active Substance: BENDAMUSTINE
     Indication: Prophylaxis
     Route: 050
  242. BENDAMUSTINE [Suspect]
     Active Substance: BENDAMUSTINE
     Route: 065
  243. BENDAMUSTINE [Suspect]
     Active Substance: BENDAMUSTINE
     Route: 065
  244. BENDAMUSTINE [Suspect]
     Active Substance: BENDAMUSTINE
     Route: 065
  245. BENDAMUSTINE [Suspect]
     Active Substance: BENDAMUSTINE
     Route: 065
  246. BENDAMUSTINE [Suspect]
     Active Substance: BENDAMUSTINE
     Route: 065
  247. BENDAMUSTINE [Suspect]
     Active Substance: BENDAMUSTINE
     Route: 065
  248. BENDAMUSTINE [Suspect]
     Active Substance: BENDAMUSTINE
     Route: 065
  249. BENDAMUSTINE [Suspect]
     Active Substance: BENDAMUSTINE
     Route: 065
  250. BENDAMUSTINE [Suspect]
     Active Substance: BENDAMUSTINE
     Route: 065
  251. BENDAMUSTINE [Suspect]
     Active Substance: BENDAMUSTINE
     Route: 065
  252. BENDAMUSTINE [Suspect]
     Active Substance: BENDAMUSTINE
     Route: 065
  253. BENDAMUSTINE [Suspect]
     Active Substance: BENDAMUSTINE
     Route: 065
  254. BENDAMUSTINE [Suspect]
     Active Substance: BENDAMUSTINE
     Route: 065
  255. BENDAMUSTINE [Suspect]
     Active Substance: BENDAMUSTINE
     Route: 065
  256. BENDAMUSTINE [Suspect]
     Active Substance: BENDAMUSTINE
     Route: 065
  257. BENDAMUSTINE [Suspect]
     Active Substance: BENDAMUSTINE
     Route: 065
  258. BENDAMUSTINE [Suspect]
     Active Substance: BENDAMUSTINE
     Route: 065
  259. BENDAMUSTINE HYDROCHLORIDE [Suspect]
     Active Substance: BENDAMUSTINE HYDROCHLORIDE
     Indication: Product used for unknown indication
  260. BENDAMUSTINE HYDROCHLORIDE [Suspect]
     Active Substance: BENDAMUSTINE HYDROCHLORIDE
     Indication: Prophylaxis
     Route: 065
  261. BENDAMUSTINE HYDROCHLORIDE [Suspect]
     Active Substance: BENDAMUSTINE HYDROCHLORIDE
     Route: 065
  262. BENDAMUSTINE HYDROCHLORIDE [Suspect]
     Active Substance: BENDAMUSTINE HYDROCHLORIDE
     Route: 065
  263. BENDAMUSTINE HYDROCHLORIDE [Suspect]
     Active Substance: BENDAMUSTINE HYDROCHLORIDE
     Route: 065
  264. BENDAMUSTINE HYDROCHLORIDE [Suspect]
     Active Substance: BENDAMUSTINE HYDROCHLORIDE
     Route: 065
  265. BENDAMUSTINE HYDROCHLORIDE [Suspect]
     Active Substance: BENDAMUSTINE HYDROCHLORIDE
     Route: 065
  266. BENDAMUSTINE HYDROCHLORIDE [Suspect]
     Active Substance: BENDAMUSTINE HYDROCHLORIDE
     Route: 065
  267. BENDAMUSTINE HYDROCHLORIDE [Suspect]
     Active Substance: BENDAMUSTINE HYDROCHLORIDE
     Route: 065
  268. BENDAMUSTINE HYDROCHLORIDE [Suspect]
     Active Substance: BENDAMUSTINE HYDROCHLORIDE
     Route: 065
  269. BENDAMUSTINE HYDROCHLORIDE [Suspect]
     Active Substance: BENDAMUSTINE HYDROCHLORIDE
     Route: 065
  270. DOXORUBICIN HYDROCHLORIDE [Suspect]
     Active Substance: DOXORUBICIN HYDROCHLORIDE
     Indication: Diffuse large B-cell lymphoma
     Dosage: 50 MILLIGRAM/SQ. METER, 3XW (50 MG/M2, TIW (DATE OF MOST RECENT DOSE PRIOR TO FIRST EPISODE OF NEUTR
     Route: 042
     Dates: start: 20201124
  271. DOXORUBICIN HYDROCHLORIDE [Suspect]
     Active Substance: DOXORUBICIN HYDROCHLORIDE
     Dates: start: 20201124
  272. DOXORUBICIN HYDROCHLORIDE [Suspect]
     Active Substance: DOXORUBICIN HYDROCHLORIDE
     Dates: start: 20201124
  273. DOXORUBICIN HYDROCHLORIDE [Suspect]
     Active Substance: DOXORUBICIN HYDROCHLORIDE
     Route: 065
     Dates: start: 20201124
  274. DOXORUBICIN HYDROCHLORIDE [Suspect]
     Active Substance: DOXORUBICIN HYDROCHLORIDE
     Dates: start: 20201124
  275. DOXORUBICIN HYDROCHLORIDE [Suspect]
     Active Substance: DOXORUBICIN HYDROCHLORIDE
     Route: 065
     Dates: start: 20201124
  276. DOXORUBICIN HYDROCHLORIDE [Suspect]
     Active Substance: DOXORUBICIN HYDROCHLORIDE
     Route: 065
     Dates: start: 20201124
  277. DOXORUBICIN HYDROCHLORIDE [Suspect]
     Active Substance: DOXORUBICIN HYDROCHLORIDE
     Route: 065
     Dates: start: 20201124
  278. DOXORUBICIN HYDROCHLORIDE [Suspect]
     Active Substance: DOXORUBICIN HYDROCHLORIDE
  279. DOXORUBICIN HYDROCHLORIDE [Suspect]
     Active Substance: DOXORUBICIN HYDROCHLORIDE
     Dates: start: 20201124
  280. DOXORUBICIN HYDROCHLORIDE [Suspect]
     Active Substance: DOXORUBICIN HYDROCHLORIDE
     Dates: start: 20201124
  281. CYCLOPHOSPHAMIDE [Suspect]
     Active Substance: CYCLOPHOSPHAMIDE
     Indication: Diffuse large B-cell lymphoma
     Dosage: 3780 MG/M2 EVERY 3 WEEKS/TOTAL VOLUME PRIOR AE 313 ML/DATE OF MOST RECENT DOSE PRIOR TO FIRST EPISOD
     Route: 042
     Dates: start: 20201124
  282. CYCLOPHOSPHAMIDE [Suspect]
     Active Substance: CYCLOPHOSPHAMIDE
     Route: 042
  283. CYCLOPHOSPHAMIDE [Suspect]
     Active Substance: CYCLOPHOSPHAMIDE
     Route: 042
  284. CYCLOPHOSPHAMIDE [Suspect]
     Active Substance: CYCLOPHOSPHAMIDE
     Route: 042
  285. CYCLOPHOSPHAMIDE [Suspect]
     Active Substance: CYCLOPHOSPHAMIDE
     Route: 042
  286. CYCLOPHOSPHAMIDE [Suspect]
     Active Substance: CYCLOPHOSPHAMIDE
     Route: 050
  287. CYCLOPHOSPHAMIDE [Suspect]
     Active Substance: CYCLOPHOSPHAMIDE
     Route: 042
     Dates: start: 20201215, end: 20201215
  288. CYCLOPHOSPHAMIDE [Suspect]
     Active Substance: CYCLOPHOSPHAMIDE
     Route: 042
     Dates: start: 20210105, end: 20210105
  289. CYCLOPHOSPHAMIDE [Suspect]
     Active Substance: CYCLOPHOSPHAMIDE
     Route: 042
     Dates: start: 20210126, end: 20210126
  290. CYCLOPHOSPHAMIDE [Suspect]
     Active Substance: CYCLOPHOSPHAMIDE
     Route: 042
     Dates: start: 20210216
  291. CYCLOPHOSPHAMIDE [Suspect]
     Active Substance: CYCLOPHOSPHAMIDE
     Route: 042
     Dates: start: 20210309, end: 20210309
  292. CYCLOPHOSPHAMIDE [Suspect]
     Active Substance: CYCLOPHOSPHAMIDE
     Route: 065
  293. CYCLOPHOSPHAMIDE [Suspect]
     Active Substance: CYCLOPHOSPHAMIDE
     Route: 042
  294. CYCLOPHOSPHAMIDE [Suspect]
     Active Substance: CYCLOPHOSPHAMIDE
     Route: 042
  295. CYCLOPHOSPHAMIDE [Suspect]
     Active Substance: CYCLOPHOSPHAMIDE
     Route: 042
  296. CYCLOPHOSPHAMIDE [Suspect]
     Active Substance: CYCLOPHOSPHAMIDE
     Dosage: 3780 MG/M2 EVERY 3 WEEKS/TOTAL VOLUME PRIOR AE 313 ML/DATE OF MOST RECENT DOSE PRIOR TO FIRST EPISOD
     Route: 042
     Dates: start: 20201124
  297. CYCLOPHOSPHAMIDE [Suspect]
     Active Substance: CYCLOPHOSPHAMIDE
     Dosage: 3780 MG/M2 EVERY 3 WEEKS/TOTAL VOLUME PRIOR AE 313 ML/DATE OF MOST RECENT DOSE PRIOR TO FIRST EPISOD
     Route: 042
     Dates: start: 20201124
  298. CYCLOPHOSPHAMIDE [Suspect]
     Active Substance: CYCLOPHOSPHAMIDE
     Route: 042
     Dates: start: 20201124
  299. CYCLOPHOSPHAMIDE [Suspect]
     Active Substance: CYCLOPHOSPHAMIDE
     Route: 042
     Dates: start: 20201124
  300. CYCLOPHOSPHAMIDE [Suspect]
     Active Substance: CYCLOPHOSPHAMIDE
     Route: 042
     Dates: start: 20201124
  301. CYCLOPHOSPHAMIDE [Suspect]
     Active Substance: CYCLOPHOSPHAMIDE
     Route: 042
  302. CYCLOPHOSPHAMIDE [Suspect]
     Active Substance: CYCLOPHOSPHAMIDE
     Route: 042
  303. CYCLOPHOSPHAMIDE [Suspect]
     Active Substance: CYCLOPHOSPHAMIDE
     Route: 042
  304. CYCLOPHOSPHAMIDE [Suspect]
     Active Substance: CYCLOPHOSPHAMIDE
     Route: 042
  305. CYCLOPHOSPHAMIDE [Suspect]
     Active Substance: CYCLOPHOSPHAMIDE
     Route: 042
  306. CYCLOPHOSPHAMIDE [Suspect]
     Active Substance: CYCLOPHOSPHAMIDE
     Route: 042
  307. CYCLOPHOSPHAMIDE [Suspect]
     Active Substance: CYCLOPHOSPHAMIDE
     Route: 042
     Dates: start: 20201124
  308. CYCLOPHOSPHAMIDE [Suspect]
     Active Substance: CYCLOPHOSPHAMIDE
     Route: 042
     Dates: start: 20201124
  309. CYCLOPHOSPHAMIDE [Suspect]
     Active Substance: CYCLOPHOSPHAMIDE
     Route: 042
  310. CYCLOPHOSPHAMIDE [Suspect]
     Active Substance: CYCLOPHOSPHAMIDE
     Route: 065
     Dates: start: 20201124
  311. CYCLOPHOSPHAMIDE [Suspect]
     Active Substance: CYCLOPHOSPHAMIDE
     Route: 065
  312. CYCLOPHOSPHAMIDE [Suspect]
     Active Substance: CYCLOPHOSPHAMIDE
     Route: 065
  313. CYCLOPHOSPHAMIDE [Suspect]
     Active Substance: CYCLOPHOSPHAMIDE
     Route: 065
  314. CYCLOPHOSPHAMIDE [Suspect]
     Active Substance: CYCLOPHOSPHAMIDE
     Route: 042
  315. CYCLOPHOSPHAMIDE [Suspect]
     Active Substance: CYCLOPHOSPHAMIDE
     Route: 042
  316. CYCLOPHOSPHAMIDE [Suspect]
     Active Substance: CYCLOPHOSPHAMIDE
     Dosage: 1260 MILLIGRAM/SQ. METER, 3XW (TOTAL VOLUME PRIOR AE 313 MLDATE OF MOST RECENT DOSE PRIOR TO FIRST
     Route: 042
  317. CYCLOPHOSPHAMIDE [Suspect]
     Active Substance: CYCLOPHOSPHAMIDE
     Route: 042
     Dates: start: 20201124
  318. CYCLOPHOSPHAMIDE [Suspect]
     Active Substance: CYCLOPHOSPHAMIDE
     Route: 050
     Dates: start: 20201124
  319. CYCLOPHOSPHAMIDE [Suspect]
     Active Substance: CYCLOPHOSPHAMIDE
     Route: 065
  320. CYCLOPHOSPHAMIDE [Suspect]
     Active Substance: CYCLOPHOSPHAMIDE
  321. CYCLOPHOSPHAMIDE [Suspect]
     Active Substance: CYCLOPHOSPHAMIDE
     Dosage: 3780 MG/KG, 1/WEEK
     Dates: start: 20201124
  322. CYCLOPHOSPHAMIDE [Suspect]
     Active Substance: CYCLOPHOSPHAMIDE
     Route: 042
  323. CYCLOPHOSPHAMIDE [Suspect]
     Active Substance: CYCLOPHOSPHAMIDE
     Route: 042
  324. CYCLOPHOSPHAMIDE [Suspect]
     Active Substance: CYCLOPHOSPHAMIDE
     Route: 042
  325. CYCLOPHOSPHAMIDE [Suspect]
     Active Substance: CYCLOPHOSPHAMIDE
     Dosage: 1260 MILLIGRAM/SQ. METER, 3XW (TOTAL VOLUME PRIOR AE 313 MLDATE OF MOST RECENT DOSE PRIOR TO FIRST
     Route: 042
  326. CYCLOPHOSPHAMIDE [Suspect]
     Active Substance: CYCLOPHOSPHAMIDE
     Route: 042
     Dates: start: 20201124
  327. CYCLOPHOSPHAMIDE [Suspect]
     Active Substance: CYCLOPHOSPHAMIDE
  328. CYCLOPHOSPHAMIDE [Suspect]
     Active Substance: CYCLOPHOSPHAMIDE
  329. CYCLOPHOSPHAMIDE [Suspect]
     Active Substance: CYCLOPHOSPHAMIDE
     Route: 042
     Dates: start: 20201124
  330. CYCLOPHOSPHAMIDE [Suspect]
     Active Substance: CYCLOPHOSPHAMIDE
     Route: 065
  331. CYCLOPHOSPHAMIDE [Suspect]
     Active Substance: CYCLOPHOSPHAMIDE
     Indication: Diffuse large B-cell lymphoma
     Route: 042
     Dates: start: 20201124
  332. CYCLOPHOSPHAMIDE [Suspect]
     Active Substance: CYCLOPHOSPHAMIDE
     Route: 042
  333. CYCLOPHOSPHAMIDE [Suspect]
     Active Substance: CYCLOPHOSPHAMIDE
     Route: 042
  334. CYCLOPHOSPHAMIDE [Suspect]
     Active Substance: CYCLOPHOSPHAMIDE
     Route: 042
     Dates: start: 20201124
  335. CYCLOPHOSPHAMIDE [Suspect]
     Active Substance: CYCLOPHOSPHAMIDE
     Route: 042
     Dates: start: 20201124
  336. CYCLOPHOSPHAMIDE [Suspect]
     Active Substance: CYCLOPHOSPHAMIDE
     Route: 050
     Dates: start: 20201124
  337. CYCLOPHOSPHAMIDE [Suspect]
     Active Substance: CYCLOPHOSPHAMIDE
     Route: 042
  338. CYCLOPHOSPHAMIDE [Suspect]
     Active Substance: CYCLOPHOSPHAMIDE
     Route: 065
     Dates: start: 20201124
  339. CYCLOPHOSPHAMIDE [Suspect]
     Active Substance: CYCLOPHOSPHAMIDE
     Route: 042
  340. CYCLOPHOSPHAMIDE [Suspect]
     Active Substance: CYCLOPHOSPHAMIDE
     Route: 042
  341. CYCLOPHOSPHAMIDE [Suspect]
     Active Substance: CYCLOPHOSPHAMIDE
     Route: 065
  342. CYCLOPHOSPHAMIDE [Suspect]
     Active Substance: CYCLOPHOSPHAMIDE
     Route: 065
  343. CYCLOPHOSPHAMIDE [Suspect]
     Active Substance: CYCLOPHOSPHAMIDE
     Route: 065
  344. CYCLOPHOSPHAMIDE [Suspect]
     Active Substance: CYCLOPHOSPHAMIDE
     Route: 065
  345. CYCLOPHOSPHAMIDE [Suspect]
     Active Substance: CYCLOPHOSPHAMIDE
     Route: 065
  346. CYCLOPHOSPHAMIDE [Suspect]
     Active Substance: CYCLOPHOSPHAMIDE
     Route: 065
  347. CYCLOPHOSPHAMIDE [Suspect]
     Active Substance: CYCLOPHOSPHAMIDE
     Route: 042
     Dates: start: 20201124
  348. CYCLOPHOSPHAMIDE [Suspect]
     Active Substance: CYCLOPHOSPHAMIDE
     Route: 065
  349. CYCLOPHOSPHAMIDE [Suspect]
     Active Substance: CYCLOPHOSPHAMIDE
     Route: 065
  350. CYCLOPHOSPHAMIDE [Suspect]
     Active Substance: CYCLOPHOSPHAMIDE
     Route: 065
  351. CYCLOPHOSPHAMIDE [Suspect]
     Active Substance: CYCLOPHOSPHAMIDE
     Route: 065
  352. CYCLOPHOSPHAMIDE [Suspect]
     Active Substance: CYCLOPHOSPHAMIDE
     Route: 065
  353. CYCLOPHOSPHAMIDE [Suspect]
     Active Substance: CYCLOPHOSPHAMIDE
     Route: 065
  354. CYCLOPHOSPHAMIDE [Suspect]
     Active Substance: CYCLOPHOSPHAMIDE
     Route: 042
     Dates: start: 20201124
  355. CYCLOPHOSPHAMIDE [Suspect]
     Active Substance: CYCLOPHOSPHAMIDE
     Route: 042
     Dates: start: 20201124
  356. CYCLOPHOSPHAMIDE [Suspect]
     Active Substance: CYCLOPHOSPHAMIDE
     Route: 042
     Dates: start: 20201124
  357. CYCLOPHOSPHAMIDE [Suspect]
     Active Substance: CYCLOPHOSPHAMIDE
     Route: 042
  358. CYCLOPHOSPHAMIDE [Suspect]
     Active Substance: CYCLOPHOSPHAMIDE
     Indication: Diffuse large B-cell lymphoma
     Route: 042
     Dates: start: 20201124
  359. DOXORUBICIN [Suspect]
     Active Substance: DOXORUBICIN
     Indication: Diffuse large B-cell lymphoma
     Route: 042
     Dates: start: 20201124
  360. DOXORUBICIN [Suspect]
     Active Substance: DOXORUBICIN
     Route: 042
     Dates: start: 20201124
  361. DOXORUBICIN [Suspect]
     Active Substance: DOXORUBICIN
     Route: 042
  362. DOXORUBICIN [Suspect]
     Active Substance: DOXORUBICIN
  363. DOXORUBICIN [Suspect]
     Active Substance: DOXORUBICIN
     Route: 042
  364. DOXORUBICIN [Suspect]
     Active Substance: DOXORUBICIN
     Route: 042
     Dates: start: 20201215, end: 20201215
  365. DOXORUBICIN [Suspect]
     Active Substance: DOXORUBICIN
     Route: 042
     Dates: start: 20210105, end: 20210105
  366. DOXORUBICIN [Suspect]
     Active Substance: DOXORUBICIN
     Route: 042
     Dates: start: 20210126, end: 20210126
  367. DOXORUBICIN [Suspect]
     Active Substance: DOXORUBICIN
     Route: 042
     Dates: start: 20210216
  368. DOXORUBICIN [Suspect]
     Active Substance: DOXORUBICIN
     Route: 042
     Dates: start: 20210309, end: 20210309
  369. DOXORUBICIN [Suspect]
     Active Substance: DOXORUBICIN
     Route: 050
     Dates: start: 20201124
  370. DOXORUBICIN [Suspect]
     Active Substance: DOXORUBICIN
     Route: 050
  371. DOXORUBICIN [Suspect]
     Active Substance: DOXORUBICIN
     Route: 065
  372. DOXORUBICIN [Suspect]
     Active Substance: DOXORUBICIN
     Route: 042
  373. DOXORUBICIN [Suspect]
     Active Substance: DOXORUBICIN
     Route: 050
     Dates: start: 20201124
  374. DOXORUBICIN [Suspect]
     Active Substance: DOXORUBICIN
     Route: 050
     Dates: start: 20201124
  375. DOXORUBICIN [Suspect]
     Active Substance: DOXORUBICIN
     Route: 050
     Dates: start: 20201124
  376. DOXORUBICIN [Suspect]
     Active Substance: DOXORUBICIN
     Route: 042
  377. DOXORUBICIN [Suspect]
     Active Substance: DOXORUBICIN
     Route: 042
  378. DOXORUBICIN [Suspect]
     Active Substance: DOXORUBICIN
     Route: 050
     Dates: start: 20201124
  379. DOXORUBICIN [Suspect]
     Active Substance: DOXORUBICIN
     Dates: start: 20201124
  380. DOXORUBICIN [Suspect]
     Active Substance: DOXORUBICIN
     Route: 042
     Dates: start: 20201124
  381. DOXORUBICIN [Suspect]
     Active Substance: DOXORUBICIN
     Route: 042
     Dates: start: 20201124
  382. DOXORUBICIN [Suspect]
     Active Substance: DOXORUBICIN
     Route: 042
     Dates: start: 20201124
  383. DOXORUBICIN [Suspect]
     Active Substance: DOXORUBICIN
     Route: 042
  384. DOXORUBICIN [Suspect]
     Active Substance: DOXORUBICIN
     Route: 042
  385. DOXORUBICIN [Suspect]
     Active Substance: DOXORUBICIN
     Route: 042
  386. DOXORUBICIN [Suspect]
     Active Substance: DOXORUBICIN
     Route: 042
  387. DOXORUBICIN [Suspect]
     Active Substance: DOXORUBICIN
     Route: 042
  388. DOXORUBICIN [Suspect]
     Active Substance: DOXORUBICIN
     Route: 042
  389. DOXORUBICIN [Suspect]
     Active Substance: DOXORUBICIN
     Route: 042
  390. DOXORUBICIN [Suspect]
     Active Substance: DOXORUBICIN
     Route: 042
  391. DOXORUBICIN [Suspect]
     Active Substance: DOXORUBICIN
     Route: 042
  392. DOXORUBICIN [Suspect]
     Active Substance: DOXORUBICIN
     Dosage: 150 MG/M2, ONE A WEEK, 50 MG/M2, TIW (DATE OF MOST RECENT DOSE PRIOR TO FIRST EPISODE OF
     Route: 042
     Dates: start: 20201124
  393. DOXORUBICIN [Suspect]
     Active Substance: DOXORUBICIN
     Route: 065
     Dates: start: 20201124
  394. DOXORUBICIN [Suspect]
     Active Substance: DOXORUBICIN
     Route: 042
  395. DOXORUBICIN [Suspect]
     Active Substance: DOXORUBICIN
     Route: 042
  396. DOXORUBICIN [Suspect]
     Active Substance: DOXORUBICIN
     Indication: Diffuse large B-cell lymphoma
     Route: 065
     Dates: start: 20201124
  397. DOXORUBICIN [Suspect]
     Active Substance: DOXORUBICIN
     Route: 042
  398. DOXORUBICIN [Suspect]
     Active Substance: DOXORUBICIN
     Dosage: 80 MG/M2, 3/WEEK (DOSAGE TEXT: 150 MG/M2, ONE A WEEK, 50 MG/M2, TIW (DATE OF MOST RECENT DOSE PRIOR
     Route: 042
     Dates: start: 20201124
  399. DOXORUBICIN [Suspect]
     Active Substance: DOXORUBICIN
     Route: 042
     Dates: start: 20201124
  400. DOXORUBICIN [Suspect]
     Active Substance: DOXORUBICIN
  401. DOXORUBICIN [Suspect]
     Active Substance: DOXORUBICIN
     Dosage: 80 MILLIGRAM/SQ. METER (ON DAY 1 OF EACH 21-DAY CYCLEDATE OF MOST RECENT DOSE PRIOR TO FIRST
     Route: 042
     Dates: start: 20201124
  402. DOXORUBICIN [Suspect]
     Active Substance: DOXORUBICIN
     Dosage: 80 MILLIGRAM/SQ. METER (ON DAY 1 OF EACH 21-DAY CYCLEDATE OF MOST RECENT DOSE PRIOR TO FIRST
     Route: 042
     Dates: start: 20201124
  403. DOXORUBICIN [Suspect]
     Active Substance: DOXORUBICIN
     Route: 042
  404. DOXORUBICIN [Suspect]
     Active Substance: DOXORUBICIN
     Route: 042
  405. DOXORUBICIN [Suspect]
     Active Substance: DOXORUBICIN
     Route: 042
  406. DOXORUBICIN [Suspect]
     Active Substance: DOXORUBICIN
     Route: 042
  407. DOXORUBICIN [Suspect]
     Active Substance: DOXORUBICIN
     Route: 042
  408. DOXORUBICIN [Suspect]
     Active Substance: DOXORUBICIN
     Route: 042
  409. DOXORUBICIN [Suspect]
     Active Substance: DOXORUBICIN
     Route: 065
  410. DOXORUBICIN [Suspect]
     Active Substance: DOXORUBICIN
     Dosage: 80 MG/M2, 3/WEEK (DOSE TEXT: 150 MG/M2, ONE A WEEK, 50 MG/M2, TIW (DATE OF MOST RECENT DOSE PRIOR TO
     Dates: start: 20201124
  411. DOXORUBICIN [Suspect]
     Active Substance: DOXORUBICIN
     Route: 042
  412. DOXORUBICIN [Suspect]
     Active Substance: DOXORUBICIN
     Route: 042
  413. DOXORUBICIN [Suspect]
     Active Substance: DOXORUBICIN
     Route: 042
  414. DOXORUBICIN [Suspect]
     Active Substance: DOXORUBICIN
     Route: 042
  415. DOXORUBICIN [Suspect]
     Active Substance: DOXORUBICIN
     Route: 042
  416. DOXORUBICIN [Suspect]
     Active Substance: DOXORUBICIN
     Indication: Diffuse large B-cell lymphoma
     Route: 065
  417. DOXORUBICIN [Suspect]
     Active Substance: DOXORUBICIN
     Route: 050
     Dates: start: 20201124
  418. DOXORUBICIN [Suspect]
     Active Substance: DOXORUBICIN
     Route: 065
  419. DOXORUBICIN [Suspect]
     Active Substance: DOXORUBICIN
     Route: 050
     Dates: start: 20201124
  420. DOXORUBICIN [Suspect]
     Active Substance: DOXORUBICIN
     Route: 050
     Dates: start: 20201124
  421. DOXORUBICIN [Suspect]
     Active Substance: DOXORUBICIN
     Route: 065
  422. DOXORUBICIN [Suspect]
     Active Substance: DOXORUBICIN
  423. DOXORUBICIN [Suspect]
     Active Substance: DOXORUBICIN
  424. DOXORUBICIN [Suspect]
     Active Substance: DOXORUBICIN
  425. DOXORUBICIN [Suspect]
     Active Substance: DOXORUBICIN
     Indication: Diffuse large B-cell lymphoma
     Route: 042
     Dates: start: 20201124
  426. DOXORUBICIN [Suspect]
     Active Substance: DOXORUBICIN
     Route: 042
     Dates: start: 20201124
  427. DOXORUBICIN [Suspect]
     Active Substance: DOXORUBICIN
     Route: 042
  428. DOXORUBICIN [Suspect]
     Active Substance: DOXORUBICIN
     Route: 042
  429. DOXORUBICIN [Suspect]
     Active Substance: DOXORUBICIN
     Route: 042
  430. DOXORUBICIN [Suspect]
     Active Substance: DOXORUBICIN
     Route: 042
     Dates: start: 20201124
  431. DOXORUBICIN [Suspect]
     Active Substance: DOXORUBICIN
     Route: 042
  432. DOXORUBICIN [Suspect]
     Active Substance: DOXORUBICIN
     Route: 065
     Dates: start: 20201124
  433. DOXORUBICIN [Suspect]
     Active Substance: DOXORUBICIN
     Route: 042
  434. DOXORUBICIN [Suspect]
     Active Substance: DOXORUBICIN
     Route: 042
  435. DOXORUBICIN [Suspect]
     Active Substance: DOXORUBICIN
     Route: 042
  436. DOXORUBICIN [Suspect]
     Active Substance: DOXORUBICIN
     Route: 042
     Dates: start: 20201124
  437. DOXORUBICIN [Suspect]
     Active Substance: DOXORUBICIN
     Route: 042
  438. DOXORUBICIN [Suspect]
     Active Substance: DOXORUBICIN
     Route: 042
  439. DOXORUBICIN [Suspect]
     Active Substance: DOXORUBICIN
     Route: 042
  440. DOXORUBICIN [Suspect]
     Active Substance: DOXORUBICIN
  441. DOXORUBICIN [Suspect]
     Active Substance: DOXORUBICIN
     Route: 042
  442. DOXORUBICIN [Suspect]
     Active Substance: DOXORUBICIN
     Route: 042
  443. DOXORUBICIN [Suspect]
     Active Substance: DOXORUBICIN
     Route: 042
  444. DOXORUBICIN [Suspect]
     Active Substance: DOXORUBICIN
     Route: 042
     Dates: start: 20201124
  445. DOXORUBICIN [Suspect]
     Active Substance: DOXORUBICIN
     Route: 042
  446. DOXORUBICIN [Suspect]
     Active Substance: DOXORUBICIN
     Route: 042
     Dates: start: 20201124
  447. DOXORUBICIN [Suspect]
     Active Substance: DOXORUBICIN
     Route: 042
  448. DOXORUBICIN [Suspect]
     Active Substance: DOXORUBICIN
     Route: 042
  449. DOXORUBICIN [Suspect]
     Active Substance: DOXORUBICIN
     Route: 042
  450. DOXORUBICIN [Suspect]
     Active Substance: DOXORUBICIN
     Route: 042
  451. DOXORUBICIN [Suspect]
     Active Substance: DOXORUBICIN
     Route: 042
  452. DOXORUBICIN [Suspect]
     Active Substance: DOXORUBICIN
     Route: 042
     Dates: start: 20201124
  453. DOXORUBICIN [Suspect]
     Active Substance: DOXORUBICIN
     Route: 042
  454. DOXORUBICIN [Suspect]
     Active Substance: DOXORUBICIN
     Route: 042
  455. DOXORUBICIN [Suspect]
     Active Substance: DOXORUBICIN
     Route: 065
  456. DOXORUBICIN [Suspect]
     Active Substance: DOXORUBICIN
     Route: 042
     Dates: start: 20201124
  457. DOXORUBICIN [Suspect]
     Active Substance: DOXORUBICIN
     Route: 065
  458. DOXORUBICIN HYDROCHLORIDE [Suspect]
     Active Substance: DOXORUBICIN HYDROCHLORIDE
     Indication: Diffuse large B-cell lymphoma
     Route: 042
  459. DOXORUBICIN HYDROCHLORIDE [Suspect]
     Active Substance: DOXORUBICIN HYDROCHLORIDE
     Route: 042
  460. DOXORUBICIN HYDROCHLORIDE [Suspect]
     Active Substance: DOXORUBICIN HYDROCHLORIDE
     Route: 042
  461. DOXORUBICIN HYDROCHLORIDE [Suspect]
     Active Substance: DOXORUBICIN HYDROCHLORIDE
     Route: 042
  462. DOXORUBICIN HYDROCHLORIDE [Suspect]
     Active Substance: DOXORUBICIN HYDROCHLORIDE
     Route: 042
  463. DOXORUBICIN HYDROCHLORIDE [Suspect]
     Active Substance: DOXORUBICIN HYDROCHLORIDE
     Route: 042
  464. DOXORUBICIN HYDROCHLORIDE [Suspect]
     Active Substance: DOXORUBICIN HYDROCHLORIDE
     Route: 042
  465. DOXORUBICIN HYDROCHLORIDE [Suspect]
     Active Substance: DOXORUBICIN HYDROCHLORIDE
     Route: 042
  466. DOXORUBICIN HYDROCHLORIDE [Suspect]
     Active Substance: DOXORUBICIN HYDROCHLORIDE
     Route: 042
  467. DOXORUBICIN HYDROCHLORIDE [Suspect]
     Active Substance: DOXORUBICIN HYDROCHLORIDE
     Route: 042
  468. DOXORUBICIN HYDROCHLORIDE [Suspect]
     Active Substance: DOXORUBICIN HYDROCHLORIDE
     Route: 042
  469. DOXORUBICIN HYDROCHLORIDE [Suspect]
     Active Substance: DOXORUBICIN HYDROCHLORIDE
     Route: 042
  470. DOXORUBICIN HYDROCHLORIDE [Suspect]
     Active Substance: DOXORUBICIN HYDROCHLORIDE
     Route: 042
  471. DOXORUBICIN HYDROCHLORIDE [Suspect]
     Active Substance: DOXORUBICIN HYDROCHLORIDE
     Route: 042
     Dates: start: 20201124
  472. DOXORUBICIN HYDROCHLORIDE [Suspect]
     Active Substance: DOXORUBICIN HYDROCHLORIDE
     Route: 042
  473. DOXORUBICIN HYDROCHLORIDE [Suspect]
     Active Substance: DOXORUBICIN HYDROCHLORIDE
     Route: 042
  474. DOXORUBICIN HYDROCHLORIDE [Suspect]
     Active Substance: DOXORUBICIN HYDROCHLORIDE
     Route: 042
  475. DOXORUBICIN HYDROCHLORIDE [Suspect]
     Active Substance: DOXORUBICIN HYDROCHLORIDE
     Route: 042
  476. DOXORUBICIN HYDROCHLORIDE [Suspect]
     Active Substance: DOXORUBICIN HYDROCHLORIDE
     Route: 042
  477. DOXORUBICIN HYDROCHLORIDE [Suspect]
     Active Substance: DOXORUBICIN HYDROCHLORIDE
     Route: 042
     Dates: start: 20201124
  478. DOXORUBICIN HYDROCHLORIDE [Suspect]
     Active Substance: DOXORUBICIN HYDROCHLORIDE
     Route: 042
  479. DOXORUBICIN HYDROCHLORIDE [Suspect]
     Active Substance: DOXORUBICIN HYDROCHLORIDE
     Route: 042
  480. DOXORUBICIN HYDROCHLORIDE [Suspect]
     Active Substance: DOXORUBICIN HYDROCHLORIDE
     Route: 042
  481. DOXORUBICIN HYDROCHLORIDE [Suspect]
     Active Substance: DOXORUBICIN HYDROCHLORIDE
     Route: 042
  482. DOXORUBICIN HYDROCHLORIDE [Suspect]
     Active Substance: DOXORUBICIN HYDROCHLORIDE
     Route: 042
  483. DOXORUBICIN HYDROCHLORIDE [Suspect]
     Active Substance: DOXORUBICIN HYDROCHLORIDE
     Route: 042
     Dates: start: 20201124
  484. DOXORUBICIN HYDROCHLORIDE [Suspect]
     Active Substance: DOXORUBICIN HYDROCHLORIDE
     Route: 042
  485. DOXORUBICIN HYDROCHLORIDE [Suspect]
     Active Substance: DOXORUBICIN HYDROCHLORIDE
     Route: 042
  486. DOXORUBICIN HYDROCHLORIDE [Suspect]
     Active Substance: DOXORUBICIN HYDROCHLORIDE
     Route: 042
  487. DOXORUBICIN HYDROCHLORIDE [Suspect]
     Active Substance: DOXORUBICIN HYDROCHLORIDE
     Route: 042
     Dates: start: 20201124
  488. DOXORUBICIN HYDROCHLORIDE [Suspect]
     Active Substance: DOXORUBICIN HYDROCHLORIDE
     Route: 042
  489. DOXORUBICIN HYDROCHLORIDE [Suspect]
     Active Substance: DOXORUBICIN HYDROCHLORIDE
     Route: 042
  490. DOXORUBICIN HYDROCHLORIDE [Suspect]
     Active Substance: DOXORUBICIN HYDROCHLORIDE
     Route: 042
  491. DOXORUBICIN HYDROCHLORIDE [Suspect]
     Active Substance: DOXORUBICIN HYDROCHLORIDE
     Route: 042
  492. DOXORUBICIN HYDROCHLORIDE [Suspect]
     Active Substance: DOXORUBICIN HYDROCHLORIDE
     Route: 042
  493. DOXORUBICIN HYDROCHLORIDE [Suspect]
     Active Substance: DOXORUBICIN HYDROCHLORIDE
     Route: 042
     Dates: start: 20201124
  494. DOXORUBICIN HYDROCHLORIDE [Suspect]
     Active Substance: DOXORUBICIN HYDROCHLORIDE
     Route: 042
     Dates: start: 20201124
  495. GLOFITAMAB [Suspect]
     Active Substance: GLOFITAMAB
     Indication: Diffuse large B-cell lymphoma
     Route: 065
     Dates: start: 20201222
  496. GLOFITAMAB [Suspect]
     Active Substance: GLOFITAMAB
     Route: 065
     Dates: start: 20201222
  497. GLOFITAMAB [Suspect]
     Active Substance: GLOFITAMAB
     Route: 065
     Dates: start: 20201222
  498. GLOFITAMAB [Suspect]
     Active Substance: GLOFITAMAB
     Dosage: 2.5 MG EVERY 3 WEEKS
     Route: 042
  499. GLOFITAMAB [Suspect]
     Active Substance: GLOFITAMAB
     Route: 042
  500. GLOFITAMAB [Suspect]
     Active Substance: GLOFITAMAB
     Route: 042
  501. GLOFITAMAB [Suspect]
     Active Substance: GLOFITAMAB
     Route: 065
  502. GLOFITAMAB [Suspect]
     Active Substance: GLOFITAMAB
     Dates: start: 20201230, end: 20201230
  503. GLOFITAMAB [Suspect]
     Active Substance: GLOFITAMAB
     Dates: start: 20210119, end: 20210119
  504. GLOFITAMAB [Suspect]
     Active Substance: GLOFITAMAB
     Dates: start: 20210209, end: 20210209
  505. GLOFITAMAB [Suspect]
     Active Substance: GLOFITAMAB
     Dates: start: 20210302, end: 20210302
  506. GLOFITAMAB [Suspect]
     Active Substance: GLOFITAMAB
     Route: 042
     Dates: start: 20210309
  507. GLOFITAMAB [Suspect]
     Active Substance: GLOFITAMAB
     Route: 042
     Dates: start: 20210323, end: 20210323
  508. GLOFITAMAB [Suspect]
     Active Substance: GLOFITAMAB
     Route: 065
  509. GLOFITAMAB [Suspect]
     Active Substance: GLOFITAMAB
     Route: 065
  510. GLOFITAMAB [Suspect]
     Active Substance: GLOFITAMAB
     Route: 050
     Dates: start: 20201222
  511. GLOFITAMAB [Suspect]
     Active Substance: GLOFITAMAB
     Route: 050
     Dates: start: 20201222
  512. GLOFITAMAB [Suspect]
     Active Substance: GLOFITAMAB
     Route: 050
     Dates: start: 20201222
  513. GLOFITAMAB [Suspect]
     Active Substance: GLOFITAMAB
     Route: 065
  514. GLOFITAMAB [Suspect]
     Active Substance: GLOFITAMAB
     Route: 065
  515. GLOFITAMAB [Suspect]
     Active Substance: GLOFITAMAB
     Route: 042
  516. GLOFITAMAB [Suspect]
     Active Substance: GLOFITAMAB
     Dates: start: 20201222
  517. GLOFITAMAB [Suspect]
     Active Substance: GLOFITAMAB
     Route: 042
  518. GLOFITAMAB [Suspect]
     Active Substance: GLOFITAMAB
     Route: 050
  519. GLOFITAMAB [Suspect]
     Active Substance: GLOFITAMAB
     Route: 042
  520. GLOFITAMAB [Suspect]
     Active Substance: GLOFITAMAB
     Route: 042
  521. GLOFITAMAB [Suspect]
     Active Substance: GLOFITAMAB
     Route: 050
  522. GLOFITAMAB [Suspect]
     Active Substance: GLOFITAMAB
     Route: 050
  523. GLOFITAMAB [Suspect]
     Active Substance: GLOFITAMAB
     Route: 042
  524. GLOFITAMAB [Suspect]
     Active Substance: GLOFITAMAB
     Dosage: 2.5 MILLIGRAM, Q3W (THE MOST RECENT DOSE OF RO7082859 (10 MG) WAS ADMINISTERED ON 30/DEC/2020
     Route: 042
     Dates: start: 20201222
  525. GLOFITAMAB [Suspect]
     Active Substance: GLOFITAMAB
  526. GLOFITAMAB [Suspect]
     Active Substance: GLOFITAMAB
     Route: 042
  527. GLOFITAMAB [Suspect]
     Active Substance: GLOFITAMAB
  528. GLOFITAMAB [Suspect]
     Active Substance: GLOFITAMAB
     Route: 042
  529. GLOFITAMAB [Suspect]
     Active Substance: GLOFITAMAB
     Route: 042
     Dates: start: 20201222
  530. GLOFITAMAB [Suspect]
     Active Substance: GLOFITAMAB
  531. GLOFITAMAB [Suspect]
     Active Substance: GLOFITAMAB
     Route: 042
  532. GLOFITAMAB [Suspect]
     Active Substance: GLOFITAMAB
     Route: 042
  533. GLOFITAMAB [Suspect]
     Active Substance: GLOFITAMAB
  534. GLOFITAMAB [Suspect]
     Active Substance: GLOFITAMAB
  535. GLOFITAMAB [Suspect]
     Active Substance: GLOFITAMAB
  536. GLOFITAMAB [Suspect]
     Active Substance: GLOFITAMAB
  537. GLOFITAMAB [Suspect]
     Active Substance: GLOFITAMAB
  538. GLOFITAMAB [Suspect]
     Active Substance: GLOFITAMAB
  539. GLOFITAMAB [Suspect]
     Active Substance: GLOFITAMAB
     Dosage: 2.5 MG/M2, 3/WEEK
     Route: 042
  540. GLOFITAMAB [Suspect]
     Active Substance: GLOFITAMAB
     Dosage: 2.5 MG/M2, 3/WEEK
  541. GLOFITAMAB [Suspect]
     Active Substance: GLOFITAMAB
     Dosage: 2.5 MG/M2, 2/WEEK
  542. GLOFITAMAB [Suspect]
     Active Substance: GLOFITAMAB
  543. GLOFITAMAB [Suspect]
     Active Substance: GLOFITAMAB
  544. GLOFITAMAB [Suspect]
     Active Substance: GLOFITAMAB
     Indication: Diffuse large B-cell lymphoma
     Route: 050
     Dates: start: 20201222
  545. GLOFITAMAB [Suspect]
     Active Substance: GLOFITAMAB
     Route: 050
  546. GLOFITAMAB [Suspect]
     Active Substance: GLOFITAMAB
     Route: 065
     Dates: start: 20201222
  547. GLOFITAMAB [Suspect]
     Active Substance: GLOFITAMAB
     Route: 042
  548. GLOFITAMAB [Suspect]
     Active Substance: GLOFITAMAB
     Route: 042
  549. GLOFITAMAB [Suspect]
     Active Substance: GLOFITAMAB
     Route: 065
     Dates: start: 20201222
  550. GLOFITAMAB [Suspect]
     Active Substance: GLOFITAMAB
     Route: 042
  551. GLOFITAMAB [Suspect]
     Active Substance: GLOFITAMAB
     Route: 042
  552. GLOFITAMAB [Suspect]
     Active Substance: GLOFITAMAB
     Dosage: 2.5 MG (MG) 2 WK, 2.5 MILLIGRAM, Q3W (THE MOST RECENT DOSE OF RO7082859 (10 MG) WAS ADMINISTERED ON
     Route: 042
     Dates: start: 20201222
  553. GLOFITAMAB [Suspect]
     Active Substance: GLOFITAMAB
     Route: 042
  554. GLOFITAMAB [Suspect]
     Active Substance: GLOFITAMAB
     Route: 065
  555. GLOFITAMAB [Suspect]
     Active Substance: GLOFITAMAB
     Route: 065
  556. GLOFITAMAB [Suspect]
     Active Substance: GLOFITAMAB
     Route: 042
  557. GLOFITAMAB [Suspect]
     Active Substance: GLOFITAMAB
     Route: 065
  558. GLOFITAMAB [Suspect]
     Active Substance: GLOFITAMAB
     Route: 065
     Dates: start: 20201222
  559. GLOFITAMAB [Suspect]
     Active Substance: GLOFITAMAB
     Route: 065
  560. GLOFITAMAB [Suspect]
     Active Substance: GLOFITAMAB
     Route: 065
     Dates: start: 20201222
  561. GLOFITAMAB [Suspect]
     Active Substance: GLOFITAMAB
     Route: 065
  562. GLOFITAMAB [Suspect]
     Active Substance: GLOFITAMAB
     Route: 065
     Dates: start: 20201222
  563. GLOFITAMAB [Suspect]
     Active Substance: GLOFITAMAB
     Route: 065
  564. GLOFITAMAB [Suspect]
     Active Substance: GLOFITAMAB
     Route: 065
  565. GLOFITAMAB [Suspect]
     Active Substance: GLOFITAMAB
     Route: 065
  566. GLOFITAMAB [Suspect]
     Active Substance: GLOFITAMAB
     Route: 042
  567. GLOFITAMAB [Suspect]
     Active Substance: GLOFITAMAB
     Route: 065
  568. GLOFITAMAB [Suspect]
     Active Substance: GLOFITAMAB
     Route: 065
     Dates: start: 20201222
  569. GLOFITAMAB [Suspect]
     Active Substance: GLOFITAMAB
     Route: 042
  570. GLOFITAMAB [Suspect]
     Active Substance: GLOFITAMAB
     Route: 065
  571. GLOFITAMAB [Suspect]
     Active Substance: GLOFITAMAB
     Route: 065
  572. GLOFITAMAB [Suspect]
     Active Substance: GLOFITAMAB
     Route: 065
  573. GLOFITAMAB [Suspect]
     Active Substance: GLOFITAMAB
     Route: 065
  574. GLOFITAMAB [Suspect]
     Active Substance: GLOFITAMAB
     Route: 065
  575. GLOFITAMAB [Suspect]
     Active Substance: GLOFITAMAB
     Route: 065
  576. GLOFITAMAB [Suspect]
     Active Substance: GLOFITAMAB
     Route: 065
  577. GLOFITAMAB [Suspect]
     Active Substance: GLOFITAMAB
     Route: 065
  578. GLOFITAMAB [Suspect]
     Active Substance: GLOFITAMAB
     Route: 065
  579. GLOFITAMAB [Suspect]
     Active Substance: GLOFITAMAB
     Route: 065
  580. GLOFITAMAB [Suspect]
     Active Substance: GLOFITAMAB
     Route: 065
  581. GLOFITAMAB [Suspect]
     Active Substance: GLOFITAMAB
     Route: 042
  582. GLOFITAMAB [Suspect]
     Active Substance: GLOFITAMAB
     Dosage: 2.5 MG, 3 TIMES A WEEK
     Route: 065
  583. GLOFITAMAB [Suspect]
     Active Substance: GLOFITAMAB
     Route: 065
  584. GLOFITAMAB [Suspect]
     Active Substance: GLOFITAMAB
     Route: 065
  585. GLOFITAMAB [Suspect]
     Active Substance: GLOFITAMAB
     Route: 065
  586. GLOFITAMAB [Suspect]
     Active Substance: GLOFITAMAB
     Route: 065
  587. GLOFITAMAB [Suspect]
     Active Substance: GLOFITAMAB
     Route: 065
  588. GLOFITAMAB [Suspect]
     Active Substance: GLOFITAMAB
     Route: 065
  589. GLOFITAMAB [Suspect]
     Active Substance: GLOFITAMAB
     Route: 065
  590. GLOFITAMAB [Suspect]
     Active Substance: GLOFITAMAB
     Route: 065
  591. GLOFITAMAB [Suspect]
     Active Substance: GLOFITAMAB
     Route: 065
  592. GLOFITAMAB [Suspect]
     Active Substance: GLOFITAMAB
     Route: 065
  593. GLOFITAMAB [Suspect]
     Active Substance: GLOFITAMAB
     Route: 065
  594. GLOFITAMAB [Suspect]
     Active Substance: GLOFITAMAB
     Indication: Diffuse large B-cell lymphoma
     Route: 065
  595. GLOFITAMAB [Suspect]
     Active Substance: GLOFITAMAB
  596. GLOFITAMAB [Suspect]
     Active Substance: GLOFITAMAB
     Dosage: 2.5 MG/M2, Q2WEEKS
  597. GLOFITAMAB [Suspect]
     Active Substance: GLOFITAMAB
     Route: 065
     Dates: start: 20201222
  598. GLOFITAMAB [Suspect]
     Active Substance: GLOFITAMAB
  599. GLOFITAMAB [Suspect]
     Active Substance: GLOFITAMAB
  600. GLOFITAMAB [Suspect]
     Active Substance: GLOFITAMAB
  601. GLOFITAMAB [Suspect]
     Active Substance: GLOFITAMAB
  602. GLOFITAMAB [Suspect]
     Active Substance: GLOFITAMAB
     Route: 042
  603. GLOFITAMAB [Suspect]
     Active Substance: GLOFITAMAB
     Dates: start: 20201222
  604. GLOFITAMAB [Suspect]
     Active Substance: GLOFITAMAB
     Dates: start: 20201222
  605. GLOFITAMAB [Suspect]
     Active Substance: GLOFITAMAB
     Dates: start: 20201222
  606. GLOFITAMAB [Suspect]
     Active Substance: GLOFITAMAB
     Dosage: 2.5 MG EVERY 3 WEEKS
  607. GLOFITAMAB [Suspect]
     Active Substance: GLOFITAMAB
     Dates: start: 20201222
  608. GLOFITAMAB [Suspect]
     Active Substance: GLOFITAMAB
     Dates: start: 20201222
  609. GLOFITAMAB [Suspect]
     Active Substance: GLOFITAMAB
  610. GLOFITAMAB [Suspect]
     Active Substance: GLOFITAMAB
     Dates: start: 20201230, end: 20201230
  611. GLOFITAMAB [Suspect]
     Active Substance: GLOFITAMAB
     Dates: start: 20210119, end: 20210119
  612. GLOFITAMAB [Suspect]
     Active Substance: GLOFITAMAB
     Dates: start: 20210209, end: 20210209
  613. GLOFITAMAB [Suspect]
     Active Substance: GLOFITAMAB
     Dates: start: 20210302, end: 20210302
  614. GLOFITAMAB [Suspect]
     Active Substance: GLOFITAMAB
     Dates: start: 20210309
  615. GLOFITAMAB [Suspect]
     Active Substance: GLOFITAMAB
     Dates: start: 20210323, end: 20210323
  616. GLOFITAMAB [Suspect]
     Active Substance: GLOFITAMAB
  617. GLOFITAMAB [Suspect]
     Active Substance: GLOFITAMAB
  618. GLOFITAMAB [Suspect]
     Active Substance: GLOFITAMAB
     Dates: start: 20201222
  619. GLOFITAMAB [Suspect]
     Active Substance: GLOFITAMAB
     Dosage: 2.5 MILLIGRAM, Q3W (THE MOST RECENT DOSE OF RO7082859 (10 MG) WAS ADMINISTERED ON 30/DEC/2020
     Dates: start: 20201222
  620. GLOFITAMAB [Suspect]
     Active Substance: GLOFITAMAB
  621. GLOFITAMAB [Suspect]
     Active Substance: GLOFITAMAB
  622. GLOFITAMAB [Suspect]
     Active Substance: GLOFITAMAB
  623. GLOFITAMAB [Suspect]
     Active Substance: GLOFITAMAB
     Dates: start: 20201222
  624. GLOFITAMAB [Suspect]
     Active Substance: GLOFITAMAB
     Dosage: 2.5 MG/M2, Q2WEEKS
  625. GLOFITAMAB [Suspect]
     Active Substance: GLOFITAMAB
  626. GLOFITAMAB [Suspect]
     Active Substance: GLOFITAMAB
     Route: 065
  627. GLOFITAMAB [Suspect]
     Active Substance: GLOFITAMAB
     Dosage: 2.5 MG/M2, 3/WEEK
  628. GLOFITAMAB [Suspect]
     Active Substance: GLOFITAMAB
     Dosage: 2.5 MG/M2, 2/WEEK
  629. VALGANCICLOVIR [Suspect]
     Active Substance: VALGANCICLOVIR
     Indication: Cytomegalovirus viraemia
     Route: 065
     Dates: start: 20210426, end: 20210513
  630. VALGANCICLOVIR [Suspect]
     Active Substance: VALGANCICLOVIR
     Route: 065
     Dates: start: 20210426, end: 20210513
  631. VALGANCICLOVIR [Suspect]
     Active Substance: VALGANCICLOVIR
     Dates: start: 20210426, end: 20210513
  632. VALGANCICLOVIR [Suspect]
     Active Substance: VALGANCICLOVIR
     Dates: start: 20210426, end: 20210513
  633. VALGANCICLOVIR [Suspect]
     Active Substance: VALGANCICLOVIR
     Dates: start: 20210426, end: 20210513
  634. VALGANCICLOVIR [Suspect]
     Active Substance: VALGANCICLOVIR
     Route: 065
     Dates: start: 20210426, end: 20210513
  635. VALGANCICLOVIR [Suspect]
     Active Substance: VALGANCICLOVIR
     Dates: end: 20210513
  636. VALGANCICLOVIR [Suspect]
     Active Substance: VALGANCICLOVIR
     Dates: start: 20210513
  637. VALGANCICLOVIR [Suspect]
     Active Substance: VALGANCICLOVIR
     Dates: start: 20210513
  638. VALGANCICLOVIR [Suspect]
     Active Substance: VALGANCICLOVIR
     Indication: Product used for unknown indication
     Dates: end: 20210518
  639. VALGANCICLOVIR [Suspect]
     Active Substance: VALGANCICLOVIR
     Dates: end: 20210518
  640. VALGANCICLOVIR [Suspect]
     Active Substance: VALGANCICLOVIR
     Route: 065
     Dates: start: 20210426, end: 20210513
  641. VALGANCICLOVIR [Suspect]
     Active Substance: VALGANCICLOVIR
     Indication: Cytomegalovirus viraemia
     Route: 050
     Dates: start: 20210426, end: 20210513
  642. VALGANCICLOVIR [Suspect]
     Active Substance: VALGANCICLOVIR
     Route: 065
     Dates: start: 20210426, end: 20210513
  643. VALGANCICLOVIR [Suspect]
     Active Substance: VALGANCICLOVIR
     Route: 065
     Dates: start: 20210513
  644. VALGANCICLOVIR [Suspect]
     Active Substance: VALGANCICLOVIR
     Route: 065
     Dates: start: 20210513
  645. VALGANCICLOVIR [Suspect]
     Active Substance: VALGANCICLOVIR
     Route: 065
     Dates: start: 20210513
  646. VALGANCICLOVIR [Suspect]
     Active Substance: VALGANCICLOVIR
     Dates: start: 20210426, end: 20210513
  647. VALGANCICLOVIR [Suspect]
     Active Substance: VALGANCICLOVIR
     Dates: end: 20210518
  648. VALGANCICLOVIR [Suspect]
     Active Substance: VALGANCICLOVIR
     Dates: start: 20210426, end: 20210513
  649. VALGANCICLOVIR [Suspect]
     Active Substance: VALGANCICLOVIR
     Dates: start: 20210426, end: 20210513
  650. VALGANCICLOVIR [Suspect]
     Active Substance: VALGANCICLOVIR
     Dates: start: 20210426, end: 20210513
  651. VALGANCICLOVIR [Suspect]
     Active Substance: VALGANCICLOVIR
     Dates: end: 20210518
  652. VALGANCICLOVIR [Suspect]
     Active Substance: VALGANCICLOVIR
     Dates: start: 20210426, end: 20210513
  653. VALGANCICLOVIR [Suspect]
     Active Substance: VALGANCICLOVIR
     Dates: start: 20210426, end: 20210513
  654. VINCRISTINE [Suspect]
     Active Substance: VINCRISTINE
     Indication: Diffuse large B-cell lymphoma
     Route: 042
     Dates: start: 20201124
  655. VINCRISTINE [Suspect]
     Active Substance: VINCRISTINE
     Route: 065
  656. VINCRISTINE [Suspect]
     Active Substance: VINCRISTINE
     Route: 065
  657. VINCRISTINE [Suspect]
     Active Substance: VINCRISTINE
     Route: 042
  658. VINCRISTINE [Suspect]
     Active Substance: VINCRISTINE
     Route: 065
  659. VINCRISTINE [Suspect]
     Active Substance: VINCRISTINE
     Route: 042
     Dates: start: 20201215, end: 20201215
  660. VINCRISTINE [Suspect]
     Active Substance: VINCRISTINE
     Route: 042
     Dates: start: 20210105, end: 20210105
  661. VINCRISTINE [Suspect]
     Active Substance: VINCRISTINE
     Route: 042
     Dates: start: 20210126, end: 20210126
  662. VINCRISTINE [Suspect]
     Active Substance: VINCRISTINE
     Route: 042
     Dates: start: 20210216
  663. VINCRISTINE [Suspect]
     Active Substance: VINCRISTINE
     Route: 042
     Dates: start: 20210309, end: 20210309
  664. VINCRISTINE [Suspect]
     Active Substance: VINCRISTINE
     Route: 065
  665. VINCRISTINE [Suspect]
     Active Substance: VINCRISTINE
     Route: 065
  666. VINCRISTINE [Suspect]
     Active Substance: VINCRISTINE
     Route: 065
  667. VINCRISTINE [Suspect]
     Active Substance: VINCRISTINE
     Route: 065
  668. VINCRISTINE [Suspect]
     Active Substance: VINCRISTINE
     Route: 065
  669. VINCRISTINE [Suspect]
     Active Substance: VINCRISTINE
     Dosage: TOTAL VOLUME: 50 ML, DATE OF MOST RECENT DOSE PRIOR TO FIRST EPISODE OF NEUTROPENIA 24/NOV/2020, S..
     Route: 065
     Dates: start: 20201124
  670. VINCRISTINE [Suspect]
     Active Substance: VINCRISTINE
     Dosage: TOTAL VOLUME: 50 MLDATE OF MOST RECENT DOSE PRIOR TO FIRST EPISODE OF NEUTROPENIA 24/NOV/2020, S...
     Route: 065
     Dates: start: 20201124
  671. VINCRISTINE [Suspect]
     Active Substance: VINCRISTINE
     Dosage: TOTAL VOLUME: 50 MLDATE OF MOST RECENT DOSE PRIOR TO FIRST EPISODE OF NEUTROPENIA 24/NOV/2020, S...
     Route: 065
     Dates: start: 20201124
  672. VINCRISTINE [Suspect]
     Active Substance: VINCRISTINE
     Route: 050
  673. VINCRISTINE [Suspect]
     Active Substance: VINCRISTINE
     Route: 042
     Dates: start: 20201124
  674. VINCRISTINE [Suspect]
     Active Substance: VINCRISTINE
     Route: 042
  675. VINCRISTINE [Suspect]
     Active Substance: VINCRISTINE
     Route: 042
  676. VINCRISTINE [Suspect]
     Active Substance: VINCRISTINE
     Route: 042
  677. VINCRISTINE [Suspect]
     Active Substance: VINCRISTINE
     Indication: Diffuse large B-cell lymphoma
     Route: 065
  678. VINCRISTINE [Suspect]
     Active Substance: VINCRISTINE
     Route: 065
  679. VINCRISTINE [Suspect]
     Active Substance: VINCRISTINE
     Route: 065
  680. VINCRISTINE [Suspect]
     Active Substance: VINCRISTINE
     Route: 065
     Dates: start: 20201124
  681. VINCRISTINE [Suspect]
     Active Substance: VINCRISTINE
     Route: 065
     Dates: start: 20201124
  682. VINCRISTINE [Suspect]
     Active Substance: VINCRISTINE
     Route: 065
  683. VINCRISTINE [Suspect]
     Active Substance: VINCRISTINE
     Route: 065
  684. VINCRISTINE [Suspect]
     Active Substance: VINCRISTINE
     Route: 042
     Dates: start: 20201124
  685. VINCRISTINE [Suspect]
     Active Substance: VINCRISTINE
     Route: 042
     Dates: start: 20201124
  686. VINCRISTINE [Suspect]
     Active Substance: VINCRISTINE
     Route: 042
     Dates: start: 20201124
  687. VINCRISTINE [Suspect]
     Active Substance: VINCRISTINE
     Route: 050
     Dates: start: 20201124
  688. VINCRISTINE [Suspect]
     Active Substance: VINCRISTINE
     Route: 065
     Dates: start: 20201124
  689. VINCRISTINE [Suspect]
     Active Substance: VINCRISTINE
     Route: 042
  690. VINCRISTINE [Suspect]
     Active Substance: VINCRISTINE
     Route: 065
  691. VINCRISTINE [Suspect]
     Active Substance: VINCRISTINE
     Route: 050
     Dates: start: 20201124
  692. VINCRISTINE [Suspect]
     Active Substance: VINCRISTINE
     Route: 050
     Dates: start: 20201124
  693. VINCRISTINE [Suspect]
     Active Substance: VINCRISTINE
     Dosage: 6 MG/M2, 1 WK, 2 MILLIGRAM/SQ. METER, 3XW (TOTAL VOLUME: 50 MLDATE OF MOST RECENT DOSE PRIOR TO FIRS
     Route: 042
     Dates: start: 20201124
  694. VINCRISTINE [Suspect]
     Active Substance: VINCRISTINE
     Dosage: 6 MG/M2, 1 WK, 2 MILLIGRAM/SQ. METER, 3XW (TOTAL VOLUME: 50 MLDATE OF MOST RECENT DOSE PRIOR TO FIRS
     Route: 042
     Dates: start: 20201124
  695. VINCRISTINE [Suspect]
     Active Substance: VINCRISTINE
     Route: 042
     Dates: start: 20201124
  696. VINCRISTINE [Suspect]
     Active Substance: VINCRISTINE
     Route: 065
  697. VINCRISTINE [Suspect]
     Active Substance: VINCRISTINE
     Route: 065
     Dates: start: 20201121
  698. VINCRISTINE [Suspect]
     Active Substance: VINCRISTINE
     Route: 065
     Dates: start: 20201121
  699. VINCRISTINE [Suspect]
     Active Substance: VINCRISTINE
  700. VINCRISTINE [Suspect]
     Active Substance: VINCRISTINE
     Route: 042
     Dates: start: 20201124
  701. VINCRISTINE [Suspect]
     Active Substance: VINCRISTINE
     Route: 042
     Dates: start: 20201124
  702. VINCRISTINE [Suspect]
     Active Substance: VINCRISTINE
  703. VINCRISTINE [Suspect]
     Active Substance: VINCRISTINE
     Route: 065
     Dates: start: 20201124
  704. VINCRISTINE [Suspect]
     Active Substance: VINCRISTINE
     Route: 065
     Dates: start: 20201124
  705. VINCRISTINE [Suspect]
     Active Substance: VINCRISTINE
  706. VINCRISTINE [Suspect]
     Active Substance: VINCRISTINE
     Route: 042
     Dates: start: 20201124
  707. VINCRISTINE [Suspect]
     Active Substance: VINCRISTINE
     Route: 042
     Dates: start: 20201124
  708. VINCRISTINE [Suspect]
     Active Substance: VINCRISTINE
     Route: 042
     Dates: start: 20201124
  709. VINCRISTINE [Suspect]
     Active Substance: VINCRISTINE
     Route: 042
  710. VINCRISTINE [Suspect]
     Active Substance: VINCRISTINE
     Dates: start: 20201124
  711. VINCRISTINE [Suspect]
     Active Substance: VINCRISTINE
  712. VINCRISTINE [Suspect]
     Active Substance: VINCRISTINE
     Route: 042
     Dates: start: 20201124
  713. VINCRISTINE [Suspect]
     Active Substance: VINCRISTINE
     Route: 042
     Dates: start: 20201124
  714. VINCRISTINE [Suspect]
     Active Substance: VINCRISTINE
     Dates: start: 20201124
  715. VINCRISTINE [Suspect]
     Active Substance: VINCRISTINE
     Dates: start: 20201124
  716. VINCRISTINE [Suspect]
     Active Substance: VINCRISTINE
     Dosage: 27MG/M2, 1 WK, 9 MILLIGRAM/SQ. METER, 3XW (9 MG/M2, THREE TIMES IN WEEK, TOTAL VOLUME: 50 ML DATE OF
     Route: 042
     Dates: start: 20201124
  717. VINCRISTINE [Suspect]
     Active Substance: VINCRISTINE
     Route: 065
     Dates: start: 20201124
  718. VINCRISTINE [Suspect]
     Active Substance: VINCRISTINE
     Dates: start: 20201124
  719. VINCRISTINE [Suspect]
     Active Substance: VINCRISTINE
     Route: 042
     Dates: start: 20201121
  720. VINCRISTINE [Suspect]
     Active Substance: VINCRISTINE
     Dates: start: 20201124
  721. VINCRISTINE [Suspect]
     Active Substance: VINCRISTINE
     Dates: start: 20201124
  722. VINCRISTINE [Suspect]
     Active Substance: VINCRISTINE
     Dates: start: 20201124
  723. VINCRISTINE [Suspect]
     Active Substance: VINCRISTINE
     Dates: start: 20201124
  724. VINCRISTINE [Suspect]
     Active Substance: VINCRISTINE
     Route: 042
     Dates: start: 20201121
  725. VINCRISTINE [Suspect]
     Active Substance: VINCRISTINE
     Dates: start: 20201124
  726. VINCRISTINE [Suspect]
     Active Substance: VINCRISTINE
     Dates: start: 20201124
  727. VINCRISTINE [Suspect]
     Active Substance: VINCRISTINE
     Indication: Diffuse large B-cell lymphoma
     Dates: start: 20201124
  728. VINCRISTINE [Suspect]
     Active Substance: VINCRISTINE
     Route: 042
     Dates: start: 20201124
  729. VINCRISTINE [Suspect]
     Active Substance: VINCRISTINE
     Dosage: 2 MG/M2, 3/WEEK
     Route: 042
     Dates: start: 20201124
  730. VINCRISTINE [Suspect]
     Active Substance: VINCRISTINE
     Dates: start: 20201124
  731. VINCRISTINE [Suspect]
     Active Substance: VINCRISTINE
  732. VINCRISTINE [Suspect]
     Active Substance: VINCRISTINE
  733. VINCRISTINE [Suspect]
     Active Substance: VINCRISTINE
     Route: 042
  734. VINCRISTINE [Suspect]
     Active Substance: VINCRISTINE
  735. VINCRISTINE [Suspect]
     Active Substance: VINCRISTINE
  736. VINCRISTINE [Suspect]
     Active Substance: VINCRISTINE
  737. VINCRISTINE [Suspect]
     Active Substance: VINCRISTINE
  738. VINCRISTINE [Suspect]
     Active Substance: VINCRISTINE
  739. VINCRISTINE [Suspect]
     Active Substance: VINCRISTINE
  740. VINCRISTINE [Suspect]
     Active Substance: VINCRISTINE
     Dosage: 9 MG/M2, THREE TIMES IN WEEK, TOTAL VOLUME: 50 ML DATE OF MOST RECENT DOSE PRIOR TO FIRST
     Route: 042
     Dates: start: 20201121
  741. VINCRISTINE [Suspect]
     Active Substance: VINCRISTINE
     Dosage: 9 MG/M2, THREE TIMES IN WEEK, TOTAL VOLUME: 50 ML DATE OF MOST RECENT DOSE PRIOR TO FIRST
     Route: 042
  742. VINCRISTINE [Suspect]
     Active Substance: VINCRISTINE
     Dosage: 6MG/M2 1 PER WEEK (DOSAGE TEXT: 9 MG/M2, THREE TIMES IN WEEK, TOTAL VOLUME: 50 ML DATE OF MOST RECEN
     Dates: start: 20201121
  743. VINCRISTINE [Suspect]
     Active Substance: VINCRISTINE
     Dosage: 2 MG/M2, 3/WEEK (DOSAGE TEXT: 9 MG/M2, THREE TIMES IN WEEK, 2 MILLIGRAM/SQ. METER, TOTAL VOLUME: 50
     Dates: start: 20201124
  744. VINCRISTINE [Suspect]
     Active Substance: VINCRISTINE
     Route: 050
  745. VINCRISTINE [Suspect]
     Active Substance: VINCRISTINE
     Dosage: 27 MG/M2, 1/WEEK (DOSAGE TEXT: 9 MG/M2, THREE TIMES IN WEEK, TOTAL VOLUME: 50 ML DATE OF MOST RECENT
  746. VINCRISTINE [Suspect]
     Active Substance: VINCRISTINE
  747. VINCRISTINE [Suspect]
     Active Substance: VINCRISTINE
     Route: 050
     Dates: start: 20201124
  748. VINCRISTINE [Suspect]
     Active Substance: VINCRISTINE
     Route: 050
     Dates: start: 20201124
  749. VINCRISTINE [Suspect]
     Active Substance: VINCRISTINE
     Route: 050
  750. VINCRISTINE [Suspect]
     Active Substance: VINCRISTINE
     Route: 050
  751. VINCRISTINE [Suspect]
     Active Substance: VINCRISTINE
     Route: 050
     Dates: start: 20201124
  752. VINCRISTINE [Suspect]
     Active Substance: VINCRISTINE
     Route: 065
     Dates: start: 20201124
  753. VINCRISTINE [Suspect]
     Active Substance: VINCRISTINE
     Route: 065
  754. VINCRISTINE [Suspect]
     Active Substance: VINCRISTINE
     Route: 065
  755. VINCRISTINE [Suspect]
     Active Substance: VINCRISTINE
     Route: 065
  756. VINCRISTINE [Suspect]
     Active Substance: VINCRISTINE
     Route: 065
  757. VINCRISTINE [Suspect]
     Active Substance: VINCRISTINE
     Route: 065
  758. VINCRISTINE [Suspect]
     Active Substance: VINCRISTINE
     Route: 065
  759. VINCRISTINE [Suspect]
     Active Substance: VINCRISTINE
     Route: 065
  760. VINCRISTINE [Suspect]
     Active Substance: VINCRISTINE
     Route: 065
  761. VINCRISTINE [Suspect]
     Active Substance: VINCRISTINE
     Route: 065
     Dates: start: 20201121
  762. VINCRISTINE [Suspect]
     Active Substance: VINCRISTINE
     Route: 065
  763. VINCRISTINE [Suspect]
     Active Substance: VINCRISTINE
     Route: 065
  764. VINCRISTINE [Suspect]
     Active Substance: VINCRISTINE
     Route: 065
  765. VINCRISTINE [Suspect]
     Active Substance: VINCRISTINE
     Route: 065
  766. VINCRISTINE [Suspect]
     Active Substance: VINCRISTINE
     Route: 065
  767. VINCRISTINE [Suspect]
     Active Substance: VINCRISTINE
     Route: 065
  768. VINCRISTINE [Suspect]
     Active Substance: VINCRISTINE
     Route: 065
  769. VINCRISTINE [Suspect]
     Active Substance: VINCRISTINE
     Route: 065
  770. VINCRISTINE [Suspect]
     Active Substance: VINCRISTINE
     Route: 065
  771. VINCRISTINE [Suspect]
     Active Substance: VINCRISTINE
     Route: 065
  772. VINCRISTINE [Suspect]
     Active Substance: VINCRISTINE
     Route: 065
  773. VINCRISTINE [Suspect]
     Active Substance: VINCRISTINE
     Route: 065
  774. VINCRISTINE [Suspect]
     Active Substance: VINCRISTINE
     Route: 065
  775. VINCRISTINE [Suspect]
     Active Substance: VINCRISTINE
     Route: 042
     Dates: start: 20201124
  776. VINCRISTINE [Suspect]
     Active Substance: VINCRISTINE
     Route: 042
     Dates: start: 20201124
  777. VINCRISTINE [Suspect]
     Active Substance: VINCRISTINE
     Indication: Diffuse large B-cell lymphoma
     Route: 042
     Dates: start: 20201124
  778. VINCRISTINE [Suspect]
     Active Substance: VINCRISTINE
     Route: 065
     Dates: start: 2020
  779. VINCRISTINE [Suspect]
     Active Substance: VINCRISTINE
     Indication: Diffuse large B-cell lymphoma
     Route: 042
     Dates: start: 20201124
  780. VINCRISTINE [Suspect]
     Active Substance: VINCRISTINE
  781. VINCRISTINE [Suspect]
     Active Substance: VINCRISTINE
  782. VINCRISTINE [Suspect]
     Active Substance: VINCRISTINE
  783. VINCRISTINE [Suspect]
     Active Substance: VINCRISTINE
  784. VINCRISTINE [Suspect]
     Active Substance: VINCRISTINE
  785. VINCRISTINE [Suspect]
     Active Substance: VINCRISTINE
  786. VINCRISTINE [Suspect]
     Active Substance: VINCRISTINE
  787. VINCRISTINE [Suspect]
     Active Substance: VINCRISTINE
  788. VINCRISTINE [Suspect]
     Active Substance: VINCRISTINE
  789. VINCRISTINE [Suspect]
     Active Substance: VINCRISTINE
  790. VINCRISTINE [Suspect]
     Active Substance: VINCRISTINE
  791. VINCRISTINE [Suspect]
     Active Substance: VINCRISTINE
  792. VINCRISTINE [Suspect]
     Active Substance: VINCRISTINE
  793. VINCRISTINE [Suspect]
     Active Substance: VINCRISTINE
  794. VINCRISTINE [Suspect]
     Active Substance: VINCRISTINE
     Dates: start: 20201124
  795. VINCRISTINE [Suspect]
     Active Substance: VINCRISTINE
  796. VINCRISTINE [Suspect]
     Active Substance: VINCRISTINE
  797. VINCRISTINE [Suspect]
     Active Substance: VINCRISTINE
     Dates: start: 20201124
  798. VINCRISTINE [Suspect]
     Active Substance: VINCRISTINE
     Route: 042
     Dates: start: 20201124
  799. VINCRISTINE [Suspect]
     Active Substance: VINCRISTINE
     Dates: start: 20201124
  800. VINCRISTINE [Suspect]
     Active Substance: VINCRISTINE
  801. VINCRISTINE [Suspect]
     Active Substance: VINCRISTINE
  802. VINCRISTINE [Suspect]
     Active Substance: VINCRISTINE
     Route: 042
     Dates: start: 20201124
  803. VINCRISTINE [Suspect]
     Active Substance: VINCRISTINE
  804. VINCRISTINE [Suspect]
     Active Substance: VINCRISTINE
     Route: 042
     Dates: start: 20201124
  805. VINCRISTINE [Suspect]
     Active Substance: VINCRISTINE
  806. VINCRISTINE [Suspect]
     Active Substance: VINCRISTINE
     Route: 042
     Dates: start: 20201124
  807. VINCRISTINE [Suspect]
     Active Substance: VINCRISTINE
  808. VINCRISTINE [Suspect]
     Active Substance: VINCRISTINE
  809. VINCRISTINE [Suspect]
     Active Substance: VINCRISTINE
  810. VINCRISTINE [Suspect]
     Active Substance: VINCRISTINE
  811. VINCRISTINE [Suspect]
     Active Substance: VINCRISTINE
  812. VINCRISTINE [Suspect]
     Active Substance: VINCRISTINE
  813. VINCRISTINE [Suspect]
     Active Substance: VINCRISTINE
  814. VINCRISTINE [Suspect]
     Active Substance: VINCRISTINE
  815. VINCRISTINE [Suspect]
     Active Substance: VINCRISTINE
  816. VINCRISTINE [Suspect]
     Active Substance: VINCRISTINE
  817. VINCRISTINE [Suspect]
     Active Substance: VINCRISTINE
     Dates: start: 20201124
  818. VINCRISTINE [Suspect]
     Active Substance: VINCRISTINE
  819. VINCRISTINE [Suspect]
     Active Substance: VINCRISTINE
  820. VINCRISTINE [Suspect]
     Active Substance: VINCRISTINE
  821. VINCRISTINE [Suspect]
     Active Substance: VINCRISTINE
  822. VINCRISTINE [Suspect]
     Active Substance: VINCRISTINE
  823. VINCRISTINE [Suspect]
     Active Substance: VINCRISTINE
  824. VINCRISTINE [Suspect]
     Active Substance: VINCRISTINE
  825. VINCRISTINE [Suspect]
     Active Substance: VINCRISTINE
  826. VINCRISTINE [Suspect]
     Active Substance: VINCRISTINE
  827. VINCRISTINE [Suspect]
     Active Substance: VINCRISTINE
  828. VINCRISTINE [Suspect]
     Active Substance: VINCRISTINE
     Dosage: 9 MILLIGRAM/SQ. METER, 3XW (9 MG/M2, THREE TIMES IN WEEK, TOTAL VOLUME: 50 ML DATE OF MOST
     Route: 042
     Dates: start: 20201124
  829. VINCRISTINE [Suspect]
     Active Substance: VINCRISTINE
     Indication: Diffuse large B-cell lymphoma
     Dates: start: 20201124
  830. VINCRISTINE [Suspect]
     Active Substance: VINCRISTINE
     Dates: start: 20201124
  831. VINCRISTINE [Suspect]
     Active Substance: VINCRISTINE
     Route: 042
     Dates: start: 20201121
  832. VINCRISTINE [Suspect]
     Active Substance: VINCRISTINE
     Route: 042
     Dates: start: 20201124
  833. VINCRISTINE [Suspect]
     Active Substance: VINCRISTINE
     Route: 042
     Dates: start: 20201124
  834. VINCRISTINE [Suspect]
     Active Substance: VINCRISTINE
     Route: 042
     Dates: start: 20201124
  835. VINCRISTINE [Suspect]
     Active Substance: VINCRISTINE
     Route: 042
     Dates: start: 20201124
  836. VINCRISTINE [Suspect]
     Active Substance: VINCRISTINE
     Route: 042
     Dates: start: 20201121
  837. VINCRISTINE [Suspect]
     Active Substance: VINCRISTINE
     Route: 042
     Dates: start: 20201124
  838. VINCRISTINE [Suspect]
     Active Substance: VINCRISTINE
     Route: 042
     Dates: start: 20201124
  839. VINCRISTINE [Suspect]
     Active Substance: VINCRISTINE
     Route: 042
     Dates: start: 20201124
  840. VINCRISTINE [Suspect]
     Active Substance: VINCRISTINE
     Route: 042
     Dates: start: 20201124
  841. VINCRISTINE [Suspect]
     Active Substance: VINCRISTINE
     Route: 042
     Dates: start: 20201124
  842. VINCRISTINE [Suspect]
     Active Substance: VINCRISTINE
     Route: 042
     Dates: start: 20201124
  843. VINCRISTINE [Suspect]
     Active Substance: VINCRISTINE
     Dates: start: 20201121
  844. VINCRISTINE [Suspect]
     Active Substance: VINCRISTINE
     Dates: start: 20201121
  845. VINCRISTINE [Suspect]
     Active Substance: VINCRISTINE
     Route: 042
     Dates: start: 20201124
  846. VINCRISTINE [Suspect]
     Active Substance: VINCRISTINE
     Route: 042
     Dates: start: 20201124
  847. VINCRISTINE [Suspect]
     Active Substance: VINCRISTINE
     Route: 042
     Dates: start: 20201124
  848. VINCRISTINE [Suspect]
     Active Substance: VINCRISTINE
     Route: 042
     Dates: start: 20201124
  849. VINCRISTINE [Suspect]
     Active Substance: VINCRISTINE
     Route: 042
     Dates: start: 20201124
  850. VINCRISTINE [Suspect]
     Active Substance: VINCRISTINE
     Route: 042
     Dates: start: 20201121
  851. VINCRISTINE [Suspect]
     Active Substance: VINCRISTINE
     Route: 042
     Dates: start: 20201124
  852. VINCRISTINE [Suspect]
     Active Substance: VINCRISTINE
     Route: 042
     Dates: start: 20201124
  853. VINCRISTINE [Suspect]
     Active Substance: VINCRISTINE
     Route: 042
     Dates: start: 20201124
  854. VINCRISTINE [Suspect]
     Active Substance: VINCRISTINE
     Route: 042
     Dates: start: 20201124
  855. VINCRISTINE [Suspect]
     Active Substance: VINCRISTINE
     Route: 042
     Dates: start: 20201124
  856. VINCRISTINE [Suspect]
     Active Substance: VINCRISTINE
     Route: 042
     Dates: start: 20201124
  857. VINCRISTINE [Suspect]
     Active Substance: VINCRISTINE
     Route: 042
     Dates: start: 20201124
  858. VINCRISTINE [Suspect]
     Active Substance: VINCRISTINE
     Route: 042
     Dates: start: 20201124
  859. VINCRISTINE [Suspect]
     Active Substance: VINCRISTINE
     Route: 042
     Dates: start: 20201124
  860. VINCRISTINE [Suspect]
     Active Substance: VINCRISTINE
  861. VINCRISTINE [Suspect]
     Active Substance: VINCRISTINE
  862. VINCRISTINE [Suspect]
     Active Substance: VINCRISTINE
  863. VINCRISTINE [Suspect]
     Active Substance: VINCRISTINE
  864. VINCRISTINE [Suspect]
     Active Substance: VINCRISTINE
     Dates: start: 20201215, end: 20201215
  865. VINCRISTINE [Suspect]
     Active Substance: VINCRISTINE
     Dates: start: 20210105, end: 20210105
  866. VINCRISTINE [Suspect]
     Active Substance: VINCRISTINE
     Dates: start: 20210126, end: 20210126
  867. VINCRISTINE [Suspect]
     Active Substance: VINCRISTINE
     Dates: start: 20210216
  868. VINCRISTINE [Suspect]
     Active Substance: VINCRISTINE
     Dates: start: 20210309, end: 20210309
  869. VINCRISTINE [Suspect]
     Active Substance: VINCRISTINE
  870. VINCRISTINE [Suspect]
     Active Substance: VINCRISTINE
  871. VINCRISTINE [Suspect]
     Active Substance: VINCRISTINE
     Dates: start: 20201124
  872. VINCRISTINE [Suspect]
     Active Substance: VINCRISTINE
  873. PREDNISOLONE [Suspect]
     Active Substance: PREDNISOLONE
     Indication: Diffuse large B-cell lymphoma
     Route: 048
     Dates: start: 20201124
  874. PREDNISOLONE [Suspect]
     Active Substance: PREDNISOLONE
     Route: 048
     Dates: start: 20201128
  875. PREDNISOLONE [Suspect]
     Active Substance: PREDNISOLONE
     Route: 048
     Dates: start: 20201215
  876. PREDNISOLONE [Suspect]
     Active Substance: PREDNISOLONE
     Route: 048
     Dates: start: 20210109
  877. PREDNISOLONE [Suspect]
     Active Substance: PREDNISOLONE
     Route: 048
     Dates: start: 20210218, end: 20210218
  878. PREDNISOLONE [Suspect]
     Active Substance: PREDNISOLONE
     Dates: start: 20210220
  879. PREDNISOLONE [Suspect]
     Active Substance: PREDNISOLONE
     Route: 048
     Dates: start: 20210309
  880. PREDNISOLONE [Suspect]
     Active Substance: PREDNISOLONE
     Route: 048
     Dates: start: 20201118, end: 20201122
  881. PREDNISOLONE [Suspect]
     Active Substance: PREDNISOLONE
     Route: 048
     Dates: start: 20201124
  882. PREDNISOLONE [Suspect]
     Active Substance: PREDNISOLONE
     Route: 065
     Dates: start: 20201124
  883. PREDNISOLONE [Suspect]
     Active Substance: PREDNISOLONE
     Route: 065
  884. PREDNISOLONE [Suspect]
     Active Substance: PREDNISOLONE
     Route: 065
  885. PREDNISOLONE [Suspect]
     Active Substance: PREDNISOLONE
     Route: 065
     Dates: start: 20201118, end: 20201122
  886. PREDNISOLONE [Suspect]
     Active Substance: PREDNISOLONE
     Route: 048
     Dates: start: 20201124
  887. PREDNISOLONE [Suspect]
     Active Substance: PREDNISOLONE
     Route: 048
     Dates: start: 20201124
  888. PREDNISOLONE [Suspect]
     Active Substance: PREDNISOLONE
     Route: 065
     Dates: start: 20201118, end: 20201122
  889. PREDNISOLONE [Suspect]
     Active Substance: PREDNISOLONE
     Route: 048
     Dates: start: 20201124
  890. PREDNISOLONE [Suspect]
     Active Substance: PREDNISOLONE
     Route: 048
     Dates: start: 20201124
  891. PREDNISOLONE [Suspect]
     Active Substance: PREDNISOLONE
     Dates: start: 20201118, end: 20201122
  892. PREDNISOLONE [Suspect]
     Active Substance: PREDNISOLONE
     Dates: start: 20201118, end: 20201122
  893. PREDNISOLONE [Suspect]
     Active Substance: PREDNISOLONE
  894. PREDNISOLONE [Suspect]
     Active Substance: PREDNISOLONE
  895. PREDNISOLONE [Suspect]
     Active Substance: PREDNISOLONE
  896. PREDNISOLONE [Suspect]
     Active Substance: PREDNISOLONE
  897. PREDNISOLONE [Suspect]
     Active Substance: PREDNISOLONE
     Dates: start: 20201118, end: 20201122
  898. PREDNISOLONE [Suspect]
     Active Substance: PREDNISOLONE
     Dates: start: 20201124
  899. PREDNISOLONE [Suspect]
     Active Substance: PREDNISOLONE
     Route: 048
     Dates: start: 20201118, end: 20201122
  900. PREDNISOLONE [Suspect]
     Active Substance: PREDNISOLONE
     Route: 048
     Dates: start: 20201118, end: 20201122
  901. PREDNISOLONE [Suspect]
     Active Substance: PREDNISOLONE
     Route: 048
     Dates: end: 20201122
  902. PREDNISOLONE [Suspect]
     Active Substance: PREDNISOLONE
     Route: 048
     Dates: start: 20201118, end: 20201122
  903. PREDNISOLONE [Suspect]
     Active Substance: PREDNISOLONE
     Route: 048
     Dates: start: 20201118, end: 20201122
  904. PREDNISOLONE [Suspect]
     Active Substance: PREDNISOLONE
     Route: 048
     Dates: start: 20201118, end: 20201122
  905. PREDNISOLONE [Suspect]
     Active Substance: PREDNISOLONE
     Route: 048
     Dates: start: 20201118, end: 20201122
  906. PREDNISOLONE [Suspect]
     Active Substance: PREDNISOLONE
     Dates: start: 20201124
  907. PREDNISOLONE [Suspect]
     Active Substance: PREDNISOLONE
     Dates: start: 20201124
  908. PREDNISOLONE [Suspect]
     Active Substance: PREDNISOLONE
     Dates: start: 20201124
  909. PREDNISOLONE [Suspect]
     Active Substance: PREDNISOLONE
     Dates: start: 20201124
  910. PREDNISOLONE [Suspect]
     Active Substance: PREDNISOLONE
     Route: 048
     Dates: start: 20201124
  911. PREDNISOLONE [Suspect]
     Active Substance: PREDNISOLONE
     Route: 048
     Dates: start: 20201124
  912. PREDNISOLONE [Suspect]
     Active Substance: PREDNISOLONE
     Route: 048
     Dates: start: 20201124
  913. PREDNISOLONE [Suspect]
     Active Substance: PREDNISOLONE
     Route: 048
  914. PREDNISOLONE [Suspect]
     Active Substance: PREDNISOLONE
     Route: 048
     Dates: start: 20201122
  915. PREDNISOLONE [Suspect]
     Active Substance: PREDNISOLONE
     Dates: start: 20201124
  916. PREDNISOLONE [Suspect]
     Active Substance: PREDNISOLONE
     Route: 048
     Dates: start: 20201124
  917. PREDNISOLONE [Suspect]
     Active Substance: PREDNISOLONE
     Route: 048
     Dates: start: 20201118, end: 20201122
  918. PREDNISOLONE [Suspect]
     Active Substance: PREDNISOLONE
     Dates: start: 20201118, end: 20201122
  919. PREDNISOLONE [Suspect]
     Active Substance: PREDNISOLONE
     Dates: start: 20201124
  920. PREDNISOLONE [Suspect]
     Active Substance: PREDNISOLONE
     Dates: start: 20201124
  921. PREDNISOLONE [Suspect]
     Active Substance: PREDNISOLONE
     Dates: start: 20201124
  922. PREDNISOLONE [Suspect]
     Active Substance: PREDNISOLONE
     Indication: Diffuse large B-cell lymphoma
     Route: 048
     Dates: start: 20201118, end: 20201122
  923. PREDNISOLONE [Suspect]
     Active Substance: PREDNISOLONE
     Route: 048
     Dates: start: 20201118, end: 20201122
  924. PREDNISOLONE [Suspect]
     Active Substance: PREDNISOLONE
     Route: 050
     Dates: start: 20201124
  925. PREDNISOLONE [Suspect]
     Active Substance: PREDNISOLONE
     Route: 050
     Dates: start: 20201118, end: 20201122
  926. PREDNISOLONE [Suspect]
     Active Substance: PREDNISOLONE
     Dates: start: 20201118, end: 20201122
  927. PREDNISOLONE [Suspect]
     Active Substance: PREDNISOLONE
  928. PREDNISOLONE [Suspect]
     Active Substance: PREDNISOLONE
     Indication: Product used for unknown indication
     Dates: start: 20201124
  929. PREDNISOLONE [Suspect]
     Active Substance: PREDNISOLONE
     Route: 048
     Dates: start: 20201118, end: 20201122
  930. PREDNISOLONE [Suspect]
     Active Substance: PREDNISOLONE
     Route: 065
  931. PREDNISOLONE [Suspect]
     Active Substance: PREDNISOLONE
     Indication: Diffuse large B-cell lymphoma
     Route: 048
     Dates: start: 20201118, end: 20201122
  932. PREDNISOLONE [Suspect]
     Active Substance: PREDNISOLONE
     Route: 048
     Dates: start: 20201124
  933. PREDNISOLONE [Suspect]
     Active Substance: PREDNISOLONE
     Dates: start: 20201124
  934. PREDNISOLONE [Suspect]
     Active Substance: PREDNISOLONE
     Route: 065
     Dates: start: 20201124
  935. PREDNISOLONE [Suspect]
     Active Substance: PREDNISOLONE
  936. PREDNISOLONE [Suspect]
     Active Substance: PREDNISOLONE
  937. PREDNISOLONE [Suspect]
     Active Substance: PREDNISOLONE
     Indication: Diffuse large B-cell lymphoma
     Route: 050
     Dates: start: 20201118, end: 20201122
  938. PREDNISOLONE [Suspect]
     Active Substance: PREDNISOLONE
     Indication: Product used for unknown indication
     Route: 065
  939. PREDNISOLONE [Suspect]
     Active Substance: PREDNISOLONE
     Route: 050
     Dates: start: 20201124
  940. PREDNISOLONE [Suspect]
     Active Substance: PREDNISOLONE
     Route: 050
     Dates: start: 20201124
  941. PREDNISOLONE [Suspect]
     Active Substance: PREDNISOLONE
     Route: 048
     Dates: start: 20201118, end: 20201122
  942. PREDNISOLONE [Suspect]
     Active Substance: PREDNISOLONE
     Route: 065
     Dates: start: 20201124
  943. PREDNISOLONE [Suspect]
     Active Substance: PREDNISOLONE
     Route: 065
     Dates: start: 20201124
  944. PREDNISOLONE [Suspect]
     Active Substance: PREDNISOLONE
     Route: 065
  945. PREDNISOLONE [Suspect]
     Active Substance: PREDNISOLONE
     Route: 065
  946. PREDNISOLONE [Suspect]
     Active Substance: PREDNISOLONE
     Route: 065
  947. PREDNISOLONE [Suspect]
     Active Substance: PREDNISOLONE
     Route: 065
     Dates: start: 20201124
  948. PREDNISOLONE [Suspect]
     Active Substance: PREDNISOLONE
     Route: 048
     Dates: start: 20201124
  949. PREDNISOLONE [Suspect]
     Active Substance: PREDNISOLONE
     Indication: Diffuse large B-cell lymphoma
     Route: 065
     Dates: start: 20201124
  950. PREDNISOLONE [Suspect]
     Active Substance: PREDNISOLONE
     Indication: Product used for unknown indication
     Route: 050
     Dates: start: 20201124
  951. PREDNISOLONE [Suspect]
     Active Substance: PREDNISOLONE
     Route: 050
     Dates: start: 20201118, end: 20201122
  952. PREDNISOLONE [Suspect]
     Active Substance: PREDNISOLONE
     Route: 065
     Dates: start: 20201124
  953. PREDNISOLONE [Suspect]
     Active Substance: PREDNISOLONE
     Route: 048
     Dates: start: 20201124
  954. PREDNISOLONE [Suspect]
     Active Substance: PREDNISOLONE
     Route: 065
     Dates: start: 20201124
  955. PREDNISOLONE [Suspect]
     Active Substance: PREDNISOLONE
     Route: 048
     Dates: start: 20201118, end: 20201122
  956. PREDNISOLONE [Suspect]
     Active Substance: PREDNISOLONE
     Route: 048
     Dates: start: 20201124
  957. PREDNISOLONE [Suspect]
     Active Substance: PREDNISOLONE
     Route: 048
     Dates: start: 20201118, end: 20201122
  958. PREDNISOLONE [Suspect]
     Active Substance: PREDNISOLONE
     Route: 048
     Dates: start: 20201118, end: 20201122
  959. PREDNISOLONE [Suspect]
     Active Substance: PREDNISOLONE
     Route: 048
     Dates: start: 20201118, end: 20201122
  960. PREDNISOLONE [Suspect]
     Active Substance: PREDNISOLONE
     Route: 048
     Dates: start: 20201118, end: 20201122
  961. PREDNISOLONE [Suspect]
     Active Substance: PREDNISOLONE
     Route: 048
     Dates: start: 20201118, end: 20201122
  962. PREDNISOLONE [Suspect]
     Active Substance: PREDNISOLONE
     Route: 048
     Dates: start: 20201124
  963. PREDNISOLONE [Suspect]
     Active Substance: PREDNISOLONE
     Route: 065
     Dates: start: 20201118, end: 20201122
  964. PREDNISOLONE [Suspect]
     Active Substance: PREDNISOLONE
     Route: 065
  965. PREDNISOLONE [Concomitant]
     Active Substance: PREDNISOLONE
     Indication: Diffuse large B-cell lymphoma
     Route: 048
     Dates: start: 20201118, end: 20201122
  966. PREDNISOLONE [Concomitant]
     Active Substance: PREDNISOLONE
     Indication: Product used for unknown indication
     Route: 050
     Dates: start: 20201118, end: 20201122
  967. PREDNISOLONE [Concomitant]
     Active Substance: PREDNISOLONE
     Route: 065
     Dates: start: 20201124
  968. PREDNISOLONE [Concomitant]
     Active Substance: PREDNISOLONE
     Route: 065
     Dates: start: 20201118, end: 20201122
  969. PREDNISOLONE [Concomitant]
     Active Substance: PREDNISOLONE
     Route: 065
  970. PREDNISOLONE [Concomitant]
     Active Substance: PREDNISOLONE
     Route: 065
  971. PREDNISOLONE [Concomitant]
     Active Substance: PREDNISOLONE
     Indication: Diffuse large B-cell lymphoma
     Dates: start: 20201118, end: 20201122
  972. PREDNISOLONE [Concomitant]
     Active Substance: PREDNISOLONE
     Indication: Product used for unknown indication
     Dates: start: 20201124
  973. ALLOPURINOL [Concomitant]
     Active Substance: ALLOPURINOL
     Indication: Prophylaxis
     Route: 065
     Dates: start: 20201118
  974. ALLOPURINOL [Concomitant]
     Active Substance: ALLOPURINOL
     Dates: start: 20201118
  975. ALLOPURINOL [Concomitant]
     Active Substance: ALLOPURINOL
     Dates: start: 20201118
  976. ALLOPURINOL [Concomitant]
     Active Substance: ALLOPURINOL
     Dates: start: 20201118
  977. ALLOPURINOL [Concomitant]
     Active Substance: ALLOPURINOL
     Dates: start: 20201118
  978. ALLOPURINOL [Concomitant]
     Active Substance: ALLOPURINOL
     Dates: start: 20201118
  979. ALLOPURINOL [Concomitant]
     Active Substance: ALLOPURINOL
     Dates: start: 20201118
  980. ALLOPURINOL [Concomitant]
     Active Substance: ALLOPURINOL
     Dates: start: 20201118
  981. ALLOPURINOL [Concomitant]
     Active Substance: ALLOPURINOL
     Dates: start: 20201118
  982. ALLOPURINOL [Concomitant]
     Active Substance: ALLOPURINOL
     Dates: start: 20201118
  983. ALLOPURINOL [Concomitant]
     Active Substance: ALLOPURINOL
     Dates: start: 20201118
  984. ALLOPURINOL [Concomitant]
     Active Substance: ALLOPURINOL
     Dates: start: 20201118
  985. ALLOPURINOL [Concomitant]
     Active Substance: ALLOPURINOL
     Dates: start: 20201118
  986. ALLOPURINOL [Concomitant]
     Active Substance: ALLOPURINOL
     Indication: Prophylaxis
     Route: 050
     Dates: start: 20201118
  987. ALLOPURINOL [Concomitant]
     Active Substance: ALLOPURINOL
     Route: 065
     Dates: start: 20201118
  988. ALLOPURINOL [Concomitant]
     Active Substance: ALLOPURINOL
     Route: 065
     Dates: start: 20201118
  989. ALLOPURINOL [Concomitant]
     Active Substance: ALLOPURINOL
     Route: 065
     Dates: start: 20201118
  990. ALLOPURINOL [Concomitant]
     Active Substance: ALLOPURINOL
     Route: 065
     Dates: start: 20201118
  991. ALLOPURINOL [Concomitant]
     Active Substance: ALLOPURINOL
     Route: 065
     Dates: start: 20201118
  992. ALLOPURINOL [Concomitant]
     Active Substance: ALLOPURINOL
     Route: 065
     Dates: start: 20201118
  993. ALLOPURINOL [Concomitant]
     Active Substance: ALLOPURINOL
     Route: 065
     Dates: start: 20201118
  994. ALLOPURINOL [Concomitant]
     Active Substance: ALLOPURINOL
     Route: 065
     Dates: start: 20201118
  995. ALLOPURINOL [Concomitant]
     Active Substance: ALLOPURINOL
     Route: 065
     Dates: start: 20201118
  996. ALLOPURINOL [Concomitant]
     Active Substance: ALLOPURINOL
     Route: 065
     Dates: start: 20201118
  997. ALLOPURINOL [Concomitant]
     Active Substance: ALLOPURINOL
     Route: 065
     Dates: start: 20201118
  998. ALLOPURINOL [Concomitant]
     Active Substance: ALLOPURINOL
     Route: 065
     Dates: start: 20201118
  999. ALLOPURINOL [Concomitant]
     Active Substance: ALLOPURINOL
     Route: 065
     Dates: start: 20201118
  1000. CHLORPHENIRAMINE MALEATE [Concomitant]
     Active Substance: CHLORPHENIRAMINE MALEATE
     Indication: Prophylaxis
     Dosage: 10 MG EVRY 3 WEEKS / DOSE LAST STUDY DRUG ADMIN PRIOR AE 1260 MG START AD END DATE OF MOST RECENT DO
     Route: 065
     Dates: start: 20201124, end: 20201124
  1001. CHLORPHENIRAMINE MALEATE [Concomitant]
     Active Substance: CHLORPHENIRAMINE MALEATE
     Indication: Rash maculo-papular
     Route: 042
     Dates: start: 20201215, end: 20201215
  1002. CHLORPHENIRAMINE MALEATE [Concomitant]
     Active Substance: CHLORPHENIRAMINE MALEATE
     Route: 042
     Dates: start: 20210126, end: 20210126
  1003. CHLORPHENIRAMINE MALEATE [Concomitant]
     Active Substance: CHLORPHENIRAMINE MALEATE
     Route: 042
     Dates: start: 20210302, end: 20210302
  1004. CHLORPHENIRAMINE MALEATE [Concomitant]
     Active Substance: CHLORPHENIRAMINE MALEATE
     Route: 042
     Dates: start: 20210323, end: 20210323
  1005. CHLORPHENIRAMINE MALEATE [Concomitant]
     Active Substance: CHLORPHENIRAMINE MALEATE
     Route: 042
     Dates: start: 20210216, end: 20210216
  1006. CHLORPHENIRAMINE MALEATE [Concomitant]
     Active Substance: CHLORPHENIRAMINE MALEATE
     Route: 042
     Dates: start: 20210119, end: 20210119
  1007. CHLORPHENIRAMINE MALEATE [Concomitant]
     Active Substance: CHLORPHENIRAMINE MALEATE
     Route: 042
     Dates: start: 20210309, end: 20210309
  1008. CHLORPHENIRAMINE MALEATE [Concomitant]
     Active Substance: CHLORPHENIRAMINE MALEATE
     Route: 042
     Dates: start: 20210209, end: 20210209
  1009. CHLORPHENIRAMINE MALEATE [Concomitant]
     Active Substance: CHLORPHENIRAMINE MALEATE
     Route: 065
     Dates: start: 20201217
  1010. CHLORPHENIRAMINE MALEATE [Concomitant]
     Active Substance: CHLORPHENIRAMINE MALEATE
     Route: 050
     Dates: start: 20210323, end: 20210323
  1011. CHLORPHENIRAMINE MALEATE [Concomitant]
     Active Substance: CHLORPHENIRAMINE MALEATE
     Route: 065
     Dates: start: 20201215, end: 20201215
  1012. CHLORPHENIRAMINE MALEATE [Concomitant]
     Active Substance: CHLORPHENIRAMINE MALEATE
     Route: 065
     Dates: start: 20210309, end: 20210309
  1013. CHLORPHENIRAMINE MALEATE [Concomitant]
     Active Substance: CHLORPHENIRAMINE MALEATE
     Route: 065
     Dates: start: 20210119, end: 20210119
  1014. CHLORPHENIRAMINE MALEATE [Concomitant]
     Active Substance: CHLORPHENIRAMINE MALEATE
     Route: 065
     Dates: start: 20201217
  1015. CHLORPHENIRAMINE MALEATE [Concomitant]
     Active Substance: CHLORPHENIRAMINE MALEATE
     Route: 065
     Dates: start: 20210302, end: 20210302
  1016. CHLORPHENIRAMINE MALEATE [Concomitant]
     Active Substance: CHLORPHENIRAMINE MALEATE
     Route: 065
     Dates: start: 20210126, end: 20210126
  1017. CHLORPHENIRAMINE MALEATE [Concomitant]
     Active Substance: CHLORPHENIRAMINE MALEATE
     Route: 065
     Dates: start: 20210216, end: 20210216
  1018. CHLORPHENIRAMINE MALEATE [Concomitant]
     Active Substance: CHLORPHENIRAMINE MALEATE
     Route: 065
     Dates: start: 20210209, end: 20210209
  1019. CHLORPHENIRAMINE MALEATE [Concomitant]
     Active Substance: CHLORPHENIRAMINE MALEATE
     Route: 050
     Dates: start: 20210209, end: 20210209
  1020. CHLORPHENIRAMINE MALEATE [Concomitant]
     Active Substance: CHLORPHENIRAMINE MALEATE
     Route: 050
     Dates: start: 20211206, end: 20211206
  1021. CHLORPHENIRAMINE MALEATE [Concomitant]
     Active Substance: CHLORPHENIRAMINE MALEATE
     Route: 050
     Dates: start: 20210209, end: 20210209
  1022. CHLORPHENIRAMINE MALEATE [Concomitant]
     Active Substance: CHLORPHENIRAMINE MALEATE
     Route: 050
     Dates: start: 20210309, end: 20210309
  1023. CHLORPHENIRAMINE MALEATE [Concomitant]
     Active Substance: CHLORPHENIRAMINE MALEATE
     Route: 050
     Dates: start: 20210302, end: 20210302
  1024. CHLORPHENIRAMINE MALEATE [Concomitant]
     Active Substance: CHLORPHENIRAMINE MALEATE
     Route: 065
     Dates: start: 20210323, end: 20210323
  1025. CHLORPHENIRAMINE MALEATE [Concomitant]
     Active Substance: CHLORPHENIRAMINE MALEATE
     Route: 050
     Dates: start: 20210216, end: 20210216
  1026. CHLORPHENIRAMINE MALEATE [Concomitant]
     Active Substance: CHLORPHENIRAMINE MALEATE
     Route: 065
     Dates: start: 20201217
  1027. CHLORPHENIRAMINE MALEATE [Concomitant]
     Active Substance: CHLORPHENIRAMINE MALEATE
     Route: 050
     Dates: start: 20201215, end: 20201215
  1028. CHLORPHENIRAMINE MALEATE [Concomitant]
     Active Substance: CHLORPHENIRAMINE MALEATE
     Route: 050
     Dates: start: 20201124, end: 20201124
  1029. CHLORPHENIRAMINE MALEATE [Concomitant]
     Active Substance: CHLORPHENIRAMINE MALEATE
     Route: 065
     Dates: start: 20210119, end: 20210119
  1030. CHLORPHENIRAMINE MALEATE [Concomitant]
     Active Substance: CHLORPHENIRAMINE MALEATE
     Route: 042
     Dates: start: 20201124, end: 20201124
  1031. CHLORPHENIRAMINE MALEATE [Concomitant]
     Active Substance: CHLORPHENIRAMINE MALEATE
     Route: 042
     Dates: start: 20210309, end: 20210309
  1032. CHLORPHENIRAMINE MALEATE [Concomitant]
     Active Substance: CHLORPHENIRAMINE MALEATE
     Route: 042
     Dates: start: 20210323, end: 20210323
  1033. CHLORPHENIRAMINE MALEATE [Concomitant]
     Active Substance: CHLORPHENIRAMINE MALEATE
     Route: 042
     Dates: start: 20210126, end: 20210126
  1034. CHLORPHENIRAMINE MALEATE [Concomitant]
     Active Substance: CHLORPHENIRAMINE MALEATE
     Route: 042
     Dates: start: 20210209, end: 20210209
  1035. CHLORPHENIRAMINE MALEATE [Concomitant]
     Active Substance: CHLORPHENIRAMINE MALEATE
     Route: 042
     Dates: start: 20210119, end: 20210119
  1036. CHLORPHENIRAMINE MALEATE [Concomitant]
     Active Substance: CHLORPHENIRAMINE MALEATE
     Dates: start: 20210309, end: 20210309
  1037. CHLORPHENIRAMINE MALEATE [Concomitant]
     Active Substance: CHLORPHENIRAMINE MALEATE
     Route: 050
     Dates: start: 20210323, end: 20210323
  1038. CHLORPHENIRAMINE MALEATE [Concomitant]
     Active Substance: CHLORPHENIRAMINE MALEATE
     Dates: start: 20201217
  1039. CHLORPHENIRAMINE MALEATE [Concomitant]
     Active Substance: CHLORPHENIRAMINE MALEATE
     Dates: start: 20210302, end: 20210302
  1040. CHLORPHENIRAMINE MALEATE [Concomitant]
     Active Substance: CHLORPHENIRAMINE MALEATE
     Dates: start: 20210216, end: 20210216
  1041. CHLORPHENIRAMINE MALEATE [Concomitant]
     Active Substance: CHLORPHENIRAMINE MALEATE
     Dates: start: 20210216, end: 20210216
  1042. CHLORPHENIRAMINE MALEATE [Concomitant]
     Active Substance: CHLORPHENIRAMINE MALEATE
     Dates: start: 20210209, end: 20210209
  1043. CHLORPHENIRAMINE MALEATE [Concomitant]
     Active Substance: CHLORPHENIRAMINE MALEATE
     Dates: start: 20201215, end: 20201215
  1044. CHLORPHENIRAMINE MALEATE [Concomitant]
     Active Substance: CHLORPHENIRAMINE MALEATE
     Dates: start: 20201215, end: 20201215
  1045. CHLORPHENIRAMINE MALEATE [Concomitant]
     Active Substance: CHLORPHENIRAMINE MALEATE
     Dates: start: 20201124, end: 20201124
  1046. CHLORPHENIRAMINE MALEATE [Concomitant]
     Active Substance: CHLORPHENIRAMINE MALEATE
     Dates: start: 20210323, end: 20210323
  1047. CHLORPHENIRAMINE MALEATE [Concomitant]
     Active Substance: CHLORPHENIRAMINE MALEATE
     Dates: start: 20210216, end: 20210216
  1048. CHLORPHENIRAMINE MALEATE [Concomitant]
     Active Substance: CHLORPHENIRAMINE MALEATE
     Dates: start: 20201124, end: 20201124
  1049. CHLORPHENIRAMINE MALEATE [Concomitant]
     Active Substance: CHLORPHENIRAMINE MALEATE
     Dates: start: 20210209, end: 20210209
  1050. CHLORPHENIRAMINE MALEATE [Concomitant]
     Active Substance: CHLORPHENIRAMINE MALEATE
     Indication: Prophylaxis
     Dates: start: 20210119, end: 20210119
  1051. CHLORPHENIRAMINE MALEATE [Concomitant]
     Active Substance: CHLORPHENIRAMINE MALEATE
     Indication: Rash maculo-papular
     Dates: start: 20210126, end: 20210126
  1052. CHLORPHENIRAMINE MALEATE [Concomitant]
     Active Substance: CHLORPHENIRAMINE MALEATE
     Dates: start: 20210309, end: 20210309
  1053. CHLORPHENIRAMINE MALEATE [Concomitant]
     Active Substance: CHLORPHENIRAMINE MALEATE
     Dates: start: 20210323, end: 20210323
  1054. CHLORPHENIRAMINE MALEATE [Concomitant]
     Active Substance: CHLORPHENIRAMINE MALEATE
     Dates: start: 20210309, end: 20210309
  1055. CHLORPHENIRAMINE MALEATE [Concomitant]
     Active Substance: CHLORPHENIRAMINE MALEATE
     Dates: start: 20210309, end: 20210309
  1056. CHLORPHENIRAMINE MALEATE [Concomitant]
     Active Substance: CHLORPHENIRAMINE MALEATE
     Dates: start: 20210126, end: 20210126
  1057. CHLORPHENIRAMINE MALEATE [Concomitant]
     Active Substance: CHLORPHENIRAMINE MALEATE
     Dates: start: 20210126, end: 20210126
  1058. CHLORPHENIRAMINE MALEATE [Concomitant]
     Active Substance: CHLORPHENIRAMINE MALEATE
     Dates: start: 20210119, end: 20210119
  1059. CHLORPHENIRAMINE MALEATE [Concomitant]
     Active Substance: CHLORPHENIRAMINE MALEATE
     Dates: start: 20210119, end: 20210119
  1060. CHLORPHENIRAMINE MALEATE [Concomitant]
     Active Substance: CHLORPHENIRAMINE MALEATE
     Dates: start: 20210323, end: 20210323
  1061. CHLORPHENIRAMINE MALEATE [Concomitant]
     Active Substance: CHLORPHENIRAMINE MALEATE
     Dates: start: 20210323, end: 20210323
  1062. CHLORPHENIRAMINE MALEATE [Concomitant]
     Active Substance: CHLORPHENIRAMINE MALEATE
     Dates: start: 20210209, end: 20210209
  1063. CHLORPHENIRAMINE MALEATE [Concomitant]
     Active Substance: CHLORPHENIRAMINE MALEATE
     Dates: start: 20210209, end: 20210209
  1064. CHLORPHENIRAMINE MALEATE [Concomitant]
     Active Substance: CHLORPHENIRAMINE MALEATE
     Dates: start: 20210119, end: 20210119
  1065. CHLORPHENIRAMINE MALEATE [Concomitant]
     Active Substance: CHLORPHENIRAMINE MALEATE
     Dates: start: 20210119, end: 20210119
  1066. CHLORPHENIRAMINE MALEATE [Concomitant]
     Active Substance: CHLORPHENIRAMINE MALEATE
     Dates: start: 20201124, end: 20201124
  1067. CHLORPHENIRAMINE MALEATE [Concomitant]
     Active Substance: CHLORPHENIRAMINE MALEATE
     Dates: start: 20201124, end: 20201124
  1068. CHLORPHENIRAMINE MALEATE [Concomitant]
     Active Substance: CHLORPHENIRAMINE MALEATE
     Dates: start: 20210323, end: 20210323
  1069. CHLORPHENIRAMINE MALEATE [Concomitant]
     Active Substance: CHLORPHENIRAMINE MALEATE
     Dates: start: 20210323, end: 20210323
  1070. CHLORPHENIRAMINE MALEATE [Concomitant]
     Active Substance: CHLORPHENIRAMINE MALEATE
     Dates: start: 20210309, end: 20210309
  1071. CHLORPHENIRAMINE MALEATE [Concomitant]
     Active Substance: CHLORPHENIRAMINE MALEATE
     Dates: start: 20210309, end: 20210309
  1072. CHLORPHENIRAMINE MALEATE [Concomitant]
     Active Substance: CHLORPHENIRAMINE MALEATE
     Dates: start: 20210209, end: 20210209
  1073. CHLORPHENIRAMINE MALEATE [Concomitant]
     Active Substance: CHLORPHENIRAMINE MALEATE
     Dates: start: 20210209, end: 20210209
  1074. CHLORPHENIRAMINE MALEATE [Concomitant]
     Active Substance: CHLORPHENIRAMINE MALEATE
     Dates: start: 20210126, end: 20210126
  1075. CHLORPHENIRAMINE MALEATE [Concomitant]
     Active Substance: CHLORPHENIRAMINE MALEATE
     Dates: start: 20210126, end: 20210126
  1076. CHLORPHENIRAMINE MALEATE [Concomitant]
     Active Substance: CHLORPHENIRAMINE MALEATE
     Dates: start: 20210206, end: 20210206
  1077. CHLORPHENIRAMINE MALEATE [Concomitant]
     Active Substance: CHLORPHENIRAMINE MALEATE
     Dates: start: 20210206, end: 20210206
  1078. CHLORPHENIRAMINE MALEATE [Concomitant]
     Active Substance: CHLORPHENIRAMINE MALEATE
  1079. CHLORPHENIRAMINE MALEATE [Concomitant]
     Active Substance: CHLORPHENIRAMINE MALEATE
  1080. CHLORPHENIRAMINE MALEATE [Concomitant]
     Active Substance: CHLORPHENIRAMINE MALEATE
     Dates: start: 20201217
  1081. CHLORPHENIRAMINE MALEATE [Concomitant]
     Active Substance: CHLORPHENIRAMINE MALEATE
  1082. CHLORPHENIRAMINE MALEATE [Concomitant]
     Active Substance: CHLORPHENIRAMINE MALEATE
  1083. CHLORPHENIRAMINE MALEATE [Concomitant]
     Active Substance: CHLORPHENIRAMINE MALEATE
     Dates: start: 20201124, end: 20201124
  1084. CHLORPHENIRAMINE MALEATE [Concomitant]
     Active Substance: CHLORPHENIRAMINE MALEATE
     Dates: start: 20201217
  1085. CHLORPHENIRAMINE MALEATE [Concomitant]
     Active Substance: CHLORPHENIRAMINE MALEATE
     Dates: start: 20201217
  1086. CHLORPHENIRAMINE MALEATE [Concomitant]
     Active Substance: CHLORPHENIRAMINE MALEATE
     Dates: start: 20210216, end: 20210216
  1087. CHLORPHENIRAMINE MALEATE [Concomitant]
     Active Substance: CHLORPHENIRAMINE MALEATE
     Dates: start: 20210216, end: 20210216
  1088. CHLORPHENIRAMINE MALEATE [Concomitant]
     Active Substance: CHLORPHENIRAMINE MALEATE
     Route: 042
     Dates: start: 20210323, end: 20210323
  1089. CHLORPHENIRAMINE MALEATE [Concomitant]
     Active Substance: CHLORPHENIRAMINE MALEATE
     Dates: start: 20210216, end: 20210216
  1090. CHLORPHENIRAMINE MALEATE [Concomitant]
     Active Substance: CHLORPHENIRAMINE MALEATE
     Dates: start: 20210302, end: 20210302
  1091. CHLORPHENIRAMINE MALEATE [Concomitant]
     Active Substance: CHLORPHENIRAMINE MALEATE
     Dates: start: 20210126, end: 20210126
  1092. CHLORPHENIRAMINE MALEATE [Concomitant]
     Active Substance: CHLORPHENIRAMINE MALEATE
     Dates: start: 20210126, end: 20210126
  1093. CHLORPHENIRAMINE MALEATE [Concomitant]
     Active Substance: CHLORPHENIRAMINE MALEATE
     Dates: start: 20210302, end: 20210302
  1094. CHLORPHENIRAMINE MALEATE [Concomitant]
     Active Substance: CHLORPHENIRAMINE MALEATE
     Dates: start: 20210119, end: 20210119
  1095. CHLORPHENIRAMINE MALEATE [Concomitant]
     Active Substance: CHLORPHENIRAMINE MALEATE
     Dates: start: 20210119, end: 20210119
  1096. CHLORPHENIRAMINE MALEATE [Concomitant]
     Active Substance: CHLORPHENIRAMINE MALEATE
     Dates: start: 20210209, end: 20210209
  1097. CHLORPHENIRAMINE MALEATE [Concomitant]
     Active Substance: CHLORPHENIRAMINE MALEATE
     Dates: start: 20210309, end: 20210309
  1098. CHLORPHENIRAMINE MALEATE [Concomitant]
     Active Substance: CHLORPHENIRAMINE MALEATE
     Dates: start: 20210309, end: 20210309
  1099. CHLORPHENIRAMINE MALEATE [Concomitant]
     Active Substance: CHLORPHENIRAMINE MALEATE
     Dates: start: 20201215, end: 20201215
  1100. CHLORPHENIRAMINE MALEATE [Concomitant]
     Active Substance: CHLORPHENIRAMINE MALEATE
     Indication: Prophylaxis
     Dosage: 10 MILLIGRAM, Q3W (DOSE LAST STUDY DRUG ADMIN PRIOR AE 1260 MG START AD END DATE OF MOST RECENT DO)
     Dates: start: 20201124, end: 20201124
  1101. CHLORPHENIRAMINE MALEATE [Concomitant]
     Active Substance: CHLORPHENIRAMINE MALEATE
     Indication: Rash maculo-papular
     Dates: start: 20201124, end: 20201124
  1102. CHLORPHENIRAMINE MALEATE [Concomitant]
     Active Substance: CHLORPHENIRAMINE MALEATE
     Dates: start: 20210126, end: 20210126
  1103. CHLORPHENIRAMINE MALEATE [Concomitant]
     Active Substance: CHLORPHENIRAMINE MALEATE
     Dates: start: 20201215, end: 20201215
  1104. CHLORPHENIRAMINE MALEATE [Concomitant]
     Active Substance: CHLORPHENIRAMINE MALEATE
     Indication: Prophylaxis
     Route: 050
     Dates: start: 20210209, end: 20210209
  1105. CHLORPHENIRAMINE MALEATE [Concomitant]
     Active Substance: CHLORPHENIRAMINE MALEATE
     Indication: Rash maculo-papular
     Route: 050
     Dates: start: 20201215, end: 20201215
  1106. CHLORPHENIRAMINE MALEATE [Concomitant]
     Active Substance: CHLORPHENIRAMINE MALEATE
     Route: 065
     Dates: start: 20201217
  1107. CHLORPHENIRAMINE MALEATE [Concomitant]
     Active Substance: CHLORPHENIRAMINE MALEATE
     Route: 050
     Dates: start: 20210302, end: 20210302
  1108. CHLORPHENIRAMINE MALEATE [Concomitant]
     Active Substance: CHLORPHENIRAMINE MALEATE
     Route: 050
     Dates: start: 20210126, end: 20210126
  1109. CHLORPHENIRAMINE MALEATE [Concomitant]
     Active Substance: CHLORPHENIRAMINE MALEATE
     Route: 050
     Dates: start: 20201124, end: 20201124
  1110. CHLORPHENIRAMINE MALEATE [Concomitant]
     Active Substance: CHLORPHENIRAMINE MALEATE
     Route: 050
     Dates: start: 20210309, end: 20210309
  1111. CHLORPHENIRAMINE MALEATE [Concomitant]
     Active Substance: CHLORPHENIRAMINE MALEATE
     Route: 050
     Dates: start: 20210216, end: 20210216
  1112. CHLORPHENIRAMINE MALEATE [Concomitant]
     Active Substance: CHLORPHENIRAMINE MALEATE
     Route: 050
     Dates: start: 20210119, end: 20210119
  1113. CHLORPHENIRAMINE MALEATE [Concomitant]
     Active Substance: CHLORPHENIRAMINE MALEATE
     Route: 050
     Dates: start: 20210323, end: 20210323
  1114. CHLORPHENIRAMINE MALEATE [Concomitant]
     Active Substance: CHLORPHENIRAMINE MALEATE
     Route: 065
     Dates: start: 20210302, end: 20210302
  1115. CHLORPHENIRAMINE MALEATE [Concomitant]
     Active Substance: CHLORPHENIRAMINE MALEATE
     Route: 065
     Dates: start: 20210126, end: 20210126
  1116. CHLORPHENIRAMINE MALEATE [Concomitant]
     Active Substance: CHLORPHENIRAMINE MALEATE
     Route: 065
     Dates: start: 20201215, end: 20201215
  1117. CHLORPHENIRAMINE MALEATE [Concomitant]
     Active Substance: CHLORPHENIRAMINE MALEATE
     Route: 065
     Dates: start: 20210309, end: 20210309
  1118. CHLORPHENIRAMINE MALEATE [Concomitant]
     Active Substance: CHLORPHENIRAMINE MALEATE
     Route: 065
     Dates: start: 20210216, end: 20210216
  1119. CHLORPHENIRAMINE MALEATE [Concomitant]
     Active Substance: CHLORPHENIRAMINE MALEATE
     Route: 065
     Dates: start: 20210323, end: 20210323
  1120. CHLORPHENIRAMINE MALEATE [Concomitant]
     Active Substance: CHLORPHENIRAMINE MALEATE
     Route: 065
     Dates: start: 20210209, end: 20210209
  1121. CHLORPHENIRAMINE MALEATE [Concomitant]
     Active Substance: CHLORPHENIRAMINE MALEATE
     Route: 065
     Dates: start: 20210323, end: 20210323
  1122. CHLORPHENIRAMINE MALEATE [Concomitant]
     Active Substance: CHLORPHENIRAMINE MALEATE
     Route: 065
     Dates: start: 20200217
  1123. CHLORPHENIRAMINE MALEATE [Concomitant]
     Active Substance: CHLORPHENIRAMINE MALEATE
     Route: 065
     Dates: start: 20200217
  1124. CHLORPHENIRAMINE MALEATE [Concomitant]
     Active Substance: CHLORPHENIRAMINE MALEATE
  1125. CHLORPHENIRAMINE MALEATE [Concomitant]
     Active Substance: CHLORPHENIRAMINE MALEATE
     Route: 065
     Dates: start: 20201215, end: 20201215
  1126. CHLORPHENIRAMINE MALEATE [Concomitant]
     Active Substance: CHLORPHENIRAMINE MALEATE
     Route: 065
     Dates: start: 20210216, end: 20210216
  1127. CHLORPHENIRAMINE MALEATE [Concomitant]
     Active Substance: CHLORPHENIRAMINE MALEATE
     Route: 065
     Dates: start: 20201217
  1128. CHLORPHENIRAMINE MALEATE [Concomitant]
     Active Substance: CHLORPHENIRAMINE MALEATE
     Route: 065
     Dates: start: 20201217
  1129. CHLORPHENIRAMINE MALEATE [Concomitant]
     Active Substance: CHLORPHENIRAMINE MALEATE
     Route: 065
     Dates: start: 20210309, end: 20210309
  1130. CHLORPHENIRAMINE MALEATE [Concomitant]
     Active Substance: CHLORPHENIRAMINE MALEATE
     Route: 065
     Dates: start: 20210126, end: 20210126
  1131. CHLORPHENIRAMINE MALEATE [Concomitant]
     Active Substance: CHLORPHENIRAMINE MALEATE
     Route: 065
     Dates: start: 20201217
  1132. CHLORPHENIRAMINE MALEATE [Concomitant]
     Active Substance: CHLORPHENIRAMINE MALEATE
     Route: 065
     Dates: start: 20210119, end: 20210119
  1133. CHLORPHENIRAMINE MALEATE [Concomitant]
     Active Substance: CHLORPHENIRAMINE MALEATE
     Route: 065
     Dates: start: 20210302, end: 20210302
  1134. CHLORPHENIRAMINE MALEATE [Concomitant]
     Active Substance: CHLORPHENIRAMINE MALEATE
     Route: 065
     Dates: start: 20201124, end: 20201124
  1135. CHLORPHENIRAMINE MALEATE [Concomitant]
     Active Substance: CHLORPHENIRAMINE MALEATE
     Route: 065
     Dates: start: 20201215, end: 20201215
  1136. CHLORPHENIRAMINE MALEATE [Concomitant]
     Active Substance: CHLORPHENIRAMINE MALEATE
     Route: 065
     Dates: start: 20210119, end: 20210119
  1137. CHLORPHENIRAMINE MALEATE [Concomitant]
     Active Substance: CHLORPHENIRAMINE MALEATE
     Route: 065
     Dates: start: 20201217, end: 20210119
  1138. CHLORPHENIRAMINE MALEATE [Concomitant]
     Active Substance: CHLORPHENIRAMINE MALEATE
     Route: 065
     Dates: start: 20201124, end: 20201124
  1139. CHLORPHENIRAMINE MALEATE [Concomitant]
     Active Substance: CHLORPHENIRAMINE MALEATE
     Route: 065
     Dates: start: 20210302, end: 20210302
  1140. CHLORPHENIRAMINE MALEATE [Concomitant]
     Active Substance: CHLORPHENIRAMINE MALEATE
  1141. CHLORPHENIRAMINE MALEATE [Concomitant]
     Active Substance: CHLORPHENIRAMINE MALEATE
     Route: 065
     Dates: start: 20210126, end: 20210126
  1142. CHLORPHENIRAMINE MALEATE [Concomitant]
     Active Substance: CHLORPHENIRAMINE MALEATE
     Route: 065
     Dates: start: 20210209, end: 20210209
  1143. CHLORPHENIRAMINE MALEATE [Concomitant]
     Active Substance: CHLORPHENIRAMINE MALEATE
     Route: 065
     Dates: start: 20210323, end: 20210323
  1144. CHLORPHENIRAMINE MALEATE [Concomitant]
     Active Substance: CHLORPHENIRAMINE MALEATE
     Route: 065
     Dates: start: 20210216, end: 20210216
  1145. CHLORPHENIRAMINE MALEATE [Concomitant]
     Active Substance: CHLORPHENIRAMINE MALEATE
     Route: 065
     Dates: start: 20210119, end: 20210119
  1146. CHLORPHENIRAMINE MALEATE [Concomitant]
     Active Substance: CHLORPHENIRAMINE MALEATE
     Route: 065
     Dates: start: 20201124, end: 20201124
  1147. CHLORPHENIRAMINE MALEATE [Concomitant]
     Active Substance: CHLORPHENIRAMINE MALEATE
     Route: 065
     Dates: start: 20201217
  1148. CHLORPHENIRAMINE MALEATE [Concomitant]
     Active Substance: CHLORPHENIRAMINE MALEATE
     Route: 065
     Dates: start: 20201215, end: 20201215
  1149. CHLORPHENIRAMINE MALEATE [Concomitant]
     Active Substance: CHLORPHENIRAMINE MALEATE
     Route: 065
     Dates: start: 20201217
  1150. CHLORPHENIRAMINE MALEATE [Concomitant]
     Active Substance: CHLORPHENIRAMINE MALEATE
     Route: 065
     Dates: start: 20210323, end: 20210323
  1151. CHLORPHENIRAMINE MALEATE [Concomitant]
     Active Substance: CHLORPHENIRAMINE MALEATE
     Route: 065
     Dates: start: 20210302, end: 20210302
  1152. CHLORPHENIRAMINE MALEATE [Concomitant]
     Active Substance: CHLORPHENIRAMINE MALEATE
     Route: 065
     Dates: start: 20201124, end: 20201124
  1153. CHLORPHENIRAMINE MALEATE [Concomitant]
     Active Substance: CHLORPHENIRAMINE MALEATE
     Route: 065
     Dates: start: 20210206, end: 20210206
  1154. CHLORPHENIRAMINE MALEATE [Concomitant]
     Active Substance: CHLORPHENIRAMINE MALEATE
     Indication: Rash maculo-papular
     Route: 065
     Dates: start: 20210309, end: 20210309
  1155. CHLORPHENIRAMINE MALEATE [Concomitant]
     Active Substance: CHLORPHENIRAMINE MALEATE
     Indication: Prophylaxis
     Route: 065
     Dates: start: 20201217
  1156. CHLORPHENIRAMINE MALEATE [Concomitant]
     Active Substance: CHLORPHENIRAMINE MALEATE
     Route: 065
     Dates: start: 20210209, end: 20210209
  1157. CHLORPHENIRAMINE MALEATE [Concomitant]
     Active Substance: CHLORPHENIRAMINE MALEATE
     Route: 065
     Dates: start: 20210216, end: 20210216
  1158. CHLORPHENIRAMINE MALEATE [Concomitant]
     Active Substance: CHLORPHENIRAMINE MALEATE
     Route: 065
     Dates: start: 20210209, end: 20210209
  1159. CHLORPHENIRAMINE MALEATE [Concomitant]
     Active Substance: CHLORPHENIRAMINE MALEATE
     Route: 065
     Dates: start: 20210309, end: 20210309
  1160. CHLORPHENIRAMINE MALEATE [Concomitant]
     Active Substance: CHLORPHENIRAMINE MALEATE
     Route: 065
     Dates: start: 20210209, end: 20210209
  1161. CHLORPHENIRAMINE MALEATE [Concomitant]
     Active Substance: CHLORPHENIRAMINE MALEATE
     Route: 065
     Dates: start: 20201124, end: 20201124
  1162. CHLORPHENIRAMINE MALEATE [Concomitant]
     Active Substance: CHLORPHENIRAMINE MALEATE
     Route: 065
     Dates: start: 20201217
  1163. CHLORPHENIRAMINE MALEATE [Concomitant]
     Active Substance: CHLORPHENIRAMINE MALEATE
     Route: 065
     Dates: start: 20201124, end: 20201124
  1164. CHLORPHENIRAMINE MALEATE [Concomitant]
     Active Substance: CHLORPHENIRAMINE MALEATE
     Dates: start: 20201124, end: 20201124
  1165. CODEINE [Concomitant]
     Active Substance: CODEINE
     Indication: Pain
     Route: 065
     Dates: start: 20201123
  1166. CODEINE [Concomitant]
     Active Substance: CODEINE
     Route: 065
     Dates: start: 20201224, end: 20201224
  1167. CODEINE [Concomitant]
     Active Substance: CODEINE
     Route: 050
     Dates: start: 20201123
  1168. CODEINE [Concomitant]
     Active Substance: CODEINE
     Route: 065
     Dates: start: 20201224, end: 20201224
  1169. CODEINE [Concomitant]
     Active Substance: CODEINE
     Route: 065
     Dates: start: 20201123
  1170. CODEINE [Concomitant]
     Active Substance: CODEINE
     Dates: start: 20201224, end: 20201224
  1171. CODEINE [Concomitant]
     Active Substance: CODEINE
     Dates: start: 20201123
  1172. CODEINE [Concomitant]
     Active Substance: CODEINE
     Dates: start: 20201224, end: 20201224
  1173. CODEINE [Concomitant]
     Active Substance: CODEINE
     Indication: Pain
     Dates: start: 20201123
  1174. CODEINE [Concomitant]
     Active Substance: CODEINE
     Dates: start: 20201224, end: 20201224
  1175. CODEINE [Concomitant]
     Active Substance: CODEINE
     Dates: start: 20201123
  1176. CODEINE [Concomitant]
     Active Substance: CODEINE
     Dates: start: 20201123
  1177. CODEINE [Concomitant]
     Active Substance: CODEINE
     Dates: start: 20201224, end: 20201224
  1178. CODEINE [Concomitant]
     Active Substance: CODEINE
     Route: 065
     Dates: start: 20201224, end: 20201224
  1179. CODEINE [Concomitant]
     Active Substance: CODEINE
     Dates: start: 20201123
  1180. CODEINE [Concomitant]
     Active Substance: CODEINE
     Dates: start: 20201224, end: 20201224
  1181. CODEINE [Concomitant]
     Active Substance: CODEINE
     Dates: start: 20201123
  1182. CODEINE [Concomitant]
     Active Substance: CODEINE
     Dates: start: 20201224, end: 20201224
  1183. CODEINE [Concomitant]
     Active Substance: CODEINE
     Dates: start: 20201224, end: 20201224
  1184. CODEINE [Concomitant]
     Active Substance: CODEINE
     Dates: start: 20201224, end: 20201224
  1185. CODEINE [Concomitant]
     Active Substance: CODEINE
     Dates: start: 20201224, end: 20201224
  1186. CODEINE [Concomitant]
     Active Substance: CODEINE
     Dates: start: 20201224, end: 20201224
  1187. CODEINE [Concomitant]
     Active Substance: CODEINE
     Dates: start: 20201224, end: 20201224
  1188. CODEINE [Concomitant]
     Active Substance: CODEINE
     Dates: start: 20201224, end: 20201224
  1189. CODEINE [Concomitant]
     Active Substance: CODEINE
     Dates: start: 20201224, end: 20201224
  1190. CODEINE [Concomitant]
     Active Substance: CODEINE
     Dates: start: 20201224, end: 20201224
  1191. CODEINE [Concomitant]
     Active Substance: CODEINE
     Dates: start: 20201224, end: 20201224
  1192. CODEINE [Concomitant]
     Active Substance: CODEINE
     Dates: start: 20201224, end: 20201224
  1193. CODEINE [Concomitant]
     Active Substance: CODEINE
     Dates: start: 20201224, end: 20201224
  1194. CODEINE [Concomitant]
     Active Substance: CODEINE
     Dates: start: 20201224, end: 20201224
  1195. CODEINE [Concomitant]
     Active Substance: CODEINE
     Dates: start: 20201224, end: 20201224
  1196. CODEINE [Concomitant]
     Active Substance: CODEINE
     Route: 065
     Dates: start: 20201123
  1197. CODEINE [Concomitant]
     Active Substance: CODEINE
     Dates: start: 20201123
  1198. CODEINE [Concomitant]
     Active Substance: CODEINE
     Indication: Pain
     Route: 065
     Dates: start: 20201224, end: 20201224
  1199. CODEINE [Concomitant]
     Active Substance: CODEINE
     Route: 050
     Dates: start: 20201123
  1200. CODEINE [Concomitant]
     Active Substance: CODEINE
     Route: 065
     Dates: start: 20201123
  1201. CODEINE [Concomitant]
     Active Substance: CODEINE
     Route: 065
     Dates: start: 20201224, end: 20201224
  1202. CODEINE [Concomitant]
     Active Substance: CODEINE
     Route: 065
     Dates: start: 20201224, end: 20201224
  1203. CODEINE [Concomitant]
     Active Substance: CODEINE
     Route: 065
     Dates: start: 20201123
  1204. CODEINE [Concomitant]
     Active Substance: CODEINE
     Route: 065
     Dates: start: 20201224, end: 20201224
  1205. CODEINE [Concomitant]
     Active Substance: CODEINE
     Route: 065
     Dates: start: 20201224, end: 20201224
  1206. CODEINE [Concomitant]
     Active Substance: CODEINE
     Route: 065
     Dates: start: 20201123
  1207. CODEINE [Concomitant]
     Active Substance: CODEINE
     Route: 065
     Dates: start: 20201224, end: 20201224
  1208. CODEINE [Concomitant]
     Active Substance: CODEINE
     Route: 065
     Dates: start: 20201224, end: 20201224
  1209. CODEINE [Concomitant]
     Active Substance: CODEINE
     Route: 065
     Dates: start: 20201224, end: 20201224
  1210. CODEINE [Concomitant]
     Active Substance: CODEINE
     Route: 065
     Dates: start: 20201224, end: 20201224
  1211. CODEINE [Concomitant]
     Active Substance: CODEINE
     Route: 065
     Dates: start: 20201224, end: 20201224
  1212. CODEINE [Concomitant]
     Active Substance: CODEINE
     Route: 065
     Dates: start: 20201224, end: 20201224
  1213. CODEINE [Concomitant]
     Active Substance: CODEINE
     Route: 065
     Dates: start: 20201224, end: 20201224
  1214. CODEINE [Concomitant]
     Active Substance: CODEINE
     Route: 065
     Dates: start: 20201224, end: 20201224
  1215. CODEINE [Concomitant]
     Active Substance: CODEINE
     Route: 065
     Dates: start: 20201224, end: 20201224
  1216. CODEINE [Concomitant]
     Active Substance: CODEINE
     Route: 065
     Dates: start: 20201123
  1217. CODEINE [Concomitant]
     Active Substance: CODEINE
     Route: 065
     Dates: start: 20201224, end: 20201224
  1218. CODEINE [Concomitant]
     Active Substance: CODEINE
     Dates: start: 20201123
  1219. CODEINE [Concomitant]
     Active Substance: CODEINE
     Dates: start: 20201123
  1220. DEXAMETHASONE SODIUM SUCCINATE [Concomitant]
     Active Substance: DEXAMETHASONE SODIUM SUCCINATE
     Indication: Product used for unknown indication
     Route: 065
     Dates: start: 20210119, end: 20210119
  1221. DEXAMETHASONE SODIUM SUCCINATE [Concomitant]
     Active Substance: DEXAMETHASONE SODIUM SUCCINATE
     Route: 065
     Dates: start: 20210209, end: 20210209
  1222. DEXAMETHASONE SODIUM SUCCINATE [Concomitant]
     Active Substance: DEXAMETHASONE SODIUM SUCCINATE
     Route: 065
     Dates: start: 20210302, end: 20210302
  1223. DEXAMETHASONE SODIUM SUCCINATE [Concomitant]
     Active Substance: DEXAMETHASONE SODIUM SUCCINATE
     Route: 042
     Dates: start: 20210323, end: 20210323
  1224. DEXAMETHASONE SODIUM SUCCINATE [Concomitant]
     Active Substance: DEXAMETHASONE SODIUM SUCCINATE
     Route: 042
     Dates: start: 20210302, end: 20210302
  1225. DEXAMETHASONE SODIUM SUCCINATE [Concomitant]
     Active Substance: DEXAMETHASONE SODIUM SUCCINATE
     Route: 042
     Dates: start: 20210323, end: 20210323
  1226. DEXAMETHASONE SODIUM SUCCINATE [Concomitant]
     Active Substance: DEXAMETHASONE SODIUM SUCCINATE
     Route: 042
     Dates: start: 20210119, end: 20210119
  1227. DEXAMETHASONE SODIUM SUCCINATE [Concomitant]
     Active Substance: DEXAMETHASONE SODIUM SUCCINATE
     Route: 042
     Dates: start: 20210209, end: 20210209
  1228. DEXAMETHASONE SODIUM SUCCINATE [Concomitant]
     Active Substance: DEXAMETHASONE SODIUM SUCCINATE
     Dates: start: 20210302, end: 20210302
  1229. DEXAMETHASONE SODIUM SUCCINATE [Concomitant]
     Active Substance: DEXAMETHASONE SODIUM SUCCINATE
     Dates: start: 20210302, end: 20210302
  1230. DEXAMETHASONE SODIUM SUCCINATE [Concomitant]
     Active Substance: DEXAMETHASONE SODIUM SUCCINATE
     Dates: start: 20210119, end: 20210119
  1231. DEXAMETHASONE SODIUM SUCCINATE [Concomitant]
     Active Substance: DEXAMETHASONE SODIUM SUCCINATE
     Dates: start: 20210119, end: 20210119
  1232. DEXAMETHASONE SODIUM SUCCINATE [Concomitant]
     Active Substance: DEXAMETHASONE SODIUM SUCCINATE
     Dates: start: 20210302, end: 20210302
  1233. DEXAMETHASONE SODIUM SUCCINATE [Concomitant]
     Active Substance: DEXAMETHASONE SODIUM SUCCINATE
     Dates: start: 20210302, end: 20210302
  1234. DEXAMETHASONE SODIUM SUCCINATE [Concomitant]
     Active Substance: DEXAMETHASONE SODIUM SUCCINATE
     Route: 042
     Dates: start: 20210302, end: 20210302
  1235. DEXAMETHASONE SODIUM SUCCINATE [Concomitant]
     Active Substance: DEXAMETHASONE SODIUM SUCCINATE
     Route: 065
     Dates: start: 20210302, end: 20210302
  1236. DEXAMETHASONE SODIUM SUCCINATE [Concomitant]
     Active Substance: DEXAMETHASONE SODIUM SUCCINATE
     Route: 042
     Dates: start: 20210209, end: 20210209
  1237. DEXAMETHASONE SODIUM SUCCINATE [Concomitant]
     Active Substance: DEXAMETHASONE SODIUM SUCCINATE
     Route: 042
     Dates: start: 20210119, end: 20210119
  1238. DEXAMETHASONE SODIUM SUCCINATE [Concomitant]
     Active Substance: DEXAMETHASONE SODIUM SUCCINATE
     Route: 042
     Dates: start: 20210323, end: 20210323
  1239. DEXAMETHASONE SODIUM SUCCINATE [Concomitant]
     Active Substance: DEXAMETHASONE SODIUM SUCCINATE
     Route: 042
     Dates: start: 20210323, end: 20210323
  1240. DEXAMETHASONE SODIUM SUCCINATE [Concomitant]
     Active Substance: DEXAMETHASONE SODIUM SUCCINATE
     Dates: start: 20210323, end: 20210323
  1241. DEXAMETHASONE SODIUM SUCCINATE [Concomitant]
     Active Substance: DEXAMETHASONE SODIUM SUCCINATE
     Dates: start: 20210209, end: 20210209
  1242. DEXAMETHASONE SODIUM SUCCINATE [Concomitant]
     Active Substance: DEXAMETHASONE SODIUM SUCCINATE
     Dates: start: 20210302, end: 20210302
  1243. DEXAMETHASONE SODIUM SUCCINATE [Concomitant]
     Active Substance: DEXAMETHASONE SODIUM SUCCINATE
     Dates: start: 20210323, end: 20210323
  1244. DEXAMETHASONE SODIUM SUCCINATE [Concomitant]
     Active Substance: DEXAMETHASONE SODIUM SUCCINATE
     Dates: start: 20210323, end: 20210323
  1245. DEXAMETHASONE SODIUM SUCCINATE [Concomitant]
     Active Substance: DEXAMETHASONE SODIUM SUCCINATE
     Dates: start: 20210209, end: 20210209
  1246. DEXAMETHASONE SODIUM SUCCINATE [Concomitant]
     Active Substance: DEXAMETHASONE SODIUM SUCCINATE
     Dates: start: 20210302, end: 20210302
  1247. DEXAMETHASONE SODIUM SUCCINATE [Concomitant]
     Active Substance: DEXAMETHASONE SODIUM SUCCINATE
     Dates: start: 20210323, end: 20210323
  1248. DEXAMETHASONE SODIUM SUCCINATE [Concomitant]
     Active Substance: DEXAMETHASONE SODIUM SUCCINATE
     Dates: start: 20210323, end: 20210323
  1249. DEXAMETHASONE SODIUM SUCCINATE [Concomitant]
     Active Substance: DEXAMETHASONE SODIUM SUCCINATE
     Dates: start: 20210209, end: 20210209
  1250. DEXAMETHASONE SODIUM SUCCINATE [Concomitant]
     Active Substance: DEXAMETHASONE SODIUM SUCCINATE
     Dates: start: 20210209, end: 20210209
  1251. DEXAMETHASONE SODIUM SUCCINATE [Concomitant]
     Active Substance: DEXAMETHASONE SODIUM SUCCINATE
     Dates: start: 20210302, end: 20210302
  1252. DEXAMETHASONE SODIUM SUCCINATE [Concomitant]
     Active Substance: DEXAMETHASONE SODIUM SUCCINATE
     Dates: start: 20210302, end: 20210302
  1253. DEXAMETHASONE SODIUM SUCCINATE [Concomitant]
     Active Substance: DEXAMETHASONE SODIUM SUCCINATE
     Dates: start: 20210323, end: 20210323
  1254. DEXAMETHASONE SODIUM SUCCINATE [Concomitant]
     Active Substance: DEXAMETHASONE SODIUM SUCCINATE
     Dates: start: 20210323, end: 20210323
  1255. DEXAMETHASONE SODIUM SUCCINATE [Concomitant]
     Active Substance: DEXAMETHASONE SODIUM SUCCINATE
     Dates: start: 20210302, end: 20210302
  1256. DEXAMETHASONE SODIUM SUCCINATE [Concomitant]
     Active Substance: DEXAMETHASONE SODIUM SUCCINATE
     Dates: start: 20210302, end: 20210302
  1257. DEXAMETHASONE SODIUM SUCCINATE [Concomitant]
     Active Substance: DEXAMETHASONE SODIUM SUCCINATE
     Dates: start: 20210209, end: 20210209
  1258. DEXAMETHASONE SODIUM SUCCINATE [Concomitant]
     Active Substance: DEXAMETHASONE SODIUM SUCCINATE
     Dates: start: 20210209, end: 20210209
  1259. DEXAMETHASONE SODIUM SUCCINATE [Concomitant]
     Active Substance: DEXAMETHASONE SODIUM SUCCINATE
     Dates: start: 20210209, end: 20210209
  1260. DEXAMETHASONE SODIUM SUCCINATE [Concomitant]
     Active Substance: DEXAMETHASONE SODIUM SUCCINATE
     Dates: start: 20210209, end: 20210209
  1261. DEXAMETHASONE SODIUM SUCCINATE [Concomitant]
     Active Substance: DEXAMETHASONE SODIUM SUCCINATE
     Dates: start: 20210323, end: 20210323
  1262. DEXAMETHASONE SODIUM SUCCINATE [Concomitant]
     Active Substance: DEXAMETHASONE SODIUM SUCCINATE
     Dates: start: 20210323, end: 20210323
  1263. DEXAMETHASONE SODIUM SUCCINATE [Concomitant]
     Active Substance: DEXAMETHASONE SODIUM SUCCINATE
     Dates: start: 20210302, end: 20210302
  1264. DEXAMETHASONE SODIUM SUCCINATE [Concomitant]
     Active Substance: DEXAMETHASONE SODIUM SUCCINATE
     Dates: start: 20210302, end: 20210302
  1265. DEXAMETHASONE SODIUM SUCCINATE [Concomitant]
     Active Substance: DEXAMETHASONE SODIUM SUCCINATE
     Dates: start: 20210209, end: 20210209
  1266. DEXAMETHASONE SODIUM SUCCINATE [Concomitant]
     Active Substance: DEXAMETHASONE SODIUM SUCCINATE
     Dates: start: 20210209, end: 20210209
  1267. DEXAMETHASONE SODIUM SUCCINATE [Concomitant]
     Active Substance: DEXAMETHASONE SODIUM SUCCINATE
     Route: 065
     Dates: start: 20210119, end: 20210119
  1268. DEXAMETHASONE SODIUM SUCCINATE [Concomitant]
     Active Substance: DEXAMETHASONE SODIUM SUCCINATE
     Dates: start: 20210119, end: 20210119
  1269. DEXAMETHASONE SODIUM SUCCINATE [Concomitant]
     Active Substance: DEXAMETHASONE SODIUM SUCCINATE
     Dates: start: 20210302, end: 20210302
  1270. DEXAMETHASONE SODIUM SUCCINATE [Concomitant]
     Active Substance: DEXAMETHASONE SODIUM SUCCINATE
     Indication: Product used for unknown indication
     Dates: start: 20210302, end: 20210302
  1271. DEXAMETHASONE SODIUM SUCCINATE [Concomitant]
     Active Substance: DEXAMETHASONE SODIUM SUCCINATE
     Dates: start: 20210302, end: 20210302
  1272. DEXAMETHASONE SODIUM SUCCINATE [Concomitant]
     Active Substance: DEXAMETHASONE SODIUM SUCCINATE
     Dates: start: 20210302, end: 20210302
  1273. DEXAMETHASONE SODIUM SUCCINATE [Concomitant]
     Active Substance: DEXAMETHASONE SODIUM SUCCINATE
     Dates: start: 20210209, end: 20210209
  1274. DEXAMETHASONE SODIUM SUCCINATE [Concomitant]
     Active Substance: DEXAMETHASONE SODIUM SUCCINATE
     Dates: start: 20210209, end: 20210209
  1275. DEXAMETHASONE SODIUM SUCCINATE [Concomitant]
     Active Substance: DEXAMETHASONE SODIUM SUCCINATE
     Dates: start: 20210323, end: 20210323
  1276. DEXAMETHASONE SODIUM SUCCINATE [Concomitant]
     Active Substance: DEXAMETHASONE SODIUM SUCCINATE
     Dates: start: 20210323, end: 20210323
  1277. DEXAMETHASONE SODIUM SUCCINATE [Concomitant]
     Active Substance: DEXAMETHASONE SODIUM SUCCINATE
     Dates: start: 20210302, end: 20210302
  1278. DEXAMETHASONE SODIUM SUCCINATE [Concomitant]
     Active Substance: DEXAMETHASONE SODIUM SUCCINATE
     Dates: start: 20210302, end: 20210302
  1279. DEXAMETHASONE SODIUM SUCCINATE [Concomitant]
     Active Substance: DEXAMETHASONE SODIUM SUCCINATE
     Dates: start: 20210323, end: 20210323
  1280. DEXAMETHASONE SODIUM SUCCINATE [Concomitant]
     Active Substance: DEXAMETHASONE SODIUM SUCCINATE
     Dates: start: 20210323, end: 20210323
  1281. DEXAMETHASONE SODIUM SUCCINATE [Concomitant]
     Active Substance: DEXAMETHASONE SODIUM SUCCINATE
     Route: 065
     Dates: start: 20210323, end: 20210323
  1282. DEXAMETHASONE SODIUM SUCCINATE [Concomitant]
     Active Substance: DEXAMETHASONE SODIUM SUCCINATE
     Dates: start: 20210323, end: 20210323
  1283. DEXAMETHASONE SODIUM SUCCINATE [Concomitant]
     Active Substance: DEXAMETHASONE SODIUM SUCCINATE
     Dates: start: 20210209, end: 20210209
  1284. DEXAMETHASONE SODIUM SUCCINATE [Concomitant]
     Active Substance: DEXAMETHASONE SODIUM SUCCINATE
     Dates: start: 20210209, end: 20210209
  1285. DEXAMETHASONE SODIUM SUCCINATE [Concomitant]
     Active Substance: DEXAMETHASONE SODIUM SUCCINATE
     Dates: start: 20210302, end: 20210302
  1286. DEXAMETHASONE SODIUM SUCCINATE [Concomitant]
     Active Substance: DEXAMETHASONE SODIUM SUCCINATE
     Dates: start: 20210302, end: 20210302
  1287. DEXAMETHASONE SODIUM SUCCINATE [Concomitant]
     Active Substance: DEXAMETHASONE SODIUM SUCCINATE
     Dates: start: 20210302, end: 20210302
  1288. DEXAMETHASONE SODIUM SUCCINATE [Concomitant]
     Active Substance: DEXAMETHASONE SODIUM SUCCINATE
     Dates: start: 20210302, end: 20210302
  1289. DEXAMETHASONE SODIUM SUCCINATE [Concomitant]
     Active Substance: DEXAMETHASONE SODIUM SUCCINATE
     Dates: start: 20210209, end: 20210209
  1290. DEXAMETHASONE SODIUM SUCCINATE [Concomitant]
     Active Substance: DEXAMETHASONE SODIUM SUCCINATE
     Dates: start: 20210209, end: 20210209
  1291. DEXAMETHASONE SODIUM SUCCINATE [Concomitant]
     Active Substance: DEXAMETHASONE SODIUM SUCCINATE
     Dates: start: 20210323, end: 20210323
  1292. DEXAMETHASONE SODIUM SUCCINATE [Concomitant]
     Active Substance: DEXAMETHASONE SODIUM SUCCINATE
     Dates: start: 20210323, end: 20210323
  1293. DEXAMETHASONE SODIUM SUCCINATE [Concomitant]
     Active Substance: DEXAMETHASONE SODIUM SUCCINATE
     Dates: start: 20210323, end: 20210323
  1294. DEXAMETHASONE SODIUM SUCCINATE [Concomitant]
     Active Substance: DEXAMETHASONE SODIUM SUCCINATE
     Dates: start: 20210323, end: 20210323
  1295. DEXAMETHASONE SODIUM SUCCINATE [Concomitant]
     Active Substance: DEXAMETHASONE SODIUM SUCCINATE
     Dates: start: 20210323, end: 20210323
  1296. DEXAMETHASONE SODIUM SUCCINATE [Concomitant]
     Active Substance: DEXAMETHASONE SODIUM SUCCINATE
     Dates: start: 20210323, end: 20210323
  1297. DEXAMETHASONE SODIUM SUCCINATE [Concomitant]
     Active Substance: DEXAMETHASONE SODIUM SUCCINATE
     Route: 065
     Dates: start: 20210209, end: 20210209
  1298. DEXAMETHASONE SODIUM SUCCINATE [Concomitant]
     Active Substance: DEXAMETHASONE SODIUM SUCCINATE
     Dates: start: 20210209, end: 20210209
  1299. DEXAMETHASONE SODIUM SUCCINATE [Concomitant]
     Active Substance: DEXAMETHASONE SODIUM SUCCINATE
     Dates: start: 20210209, end: 20210209
  1300. DEXAMETHASONE SODIUM SUCCINATE [Concomitant]
     Active Substance: DEXAMETHASONE SODIUM SUCCINATE
     Dates: start: 20210209, end: 20210209
  1301. DEXAMETHASONE SODIUM SUCCINATE [Concomitant]
     Active Substance: DEXAMETHASONE SODIUM SUCCINATE
     Dates: start: 20210119, end: 20210119
  1302. DEXAMETHASONE SODIUM SUCCINATE [Concomitant]
     Active Substance: DEXAMETHASONE SODIUM SUCCINATE
     Dates: start: 20210119, end: 20210119
  1303. DEXAMETHASONE SODIUM SUCCINATE [Concomitant]
     Active Substance: DEXAMETHASONE SODIUM SUCCINATE
     Dates: start: 20210209, end: 20210209
  1304. DEXAMETHASONE SODIUM SUCCINATE [Concomitant]
     Active Substance: DEXAMETHASONE SODIUM SUCCINATE
     Dates: start: 20210209, end: 20210209
  1305. DEXAMETHASONE SODIUM SUCCINATE [Concomitant]
     Active Substance: DEXAMETHASONE SODIUM SUCCINATE
     Dates: start: 20210323, end: 20210323
  1306. DEXAMETHASONE SODIUM SUCCINATE [Concomitant]
     Active Substance: DEXAMETHASONE SODIUM SUCCINATE
     Dates: start: 20210323, end: 20210323
  1307. DEXAMETHASONE SODIUM SUCCINATE [Concomitant]
     Active Substance: DEXAMETHASONE SODIUM SUCCINATE
     Dates: start: 20210302, end: 20210302
  1308. DEXAMETHASONE SODIUM SUCCINATE [Concomitant]
     Active Substance: DEXAMETHASONE SODIUM SUCCINATE
     Dates: start: 20210302, end: 20210302
  1309. DEXAMETHASONE SODIUM SUCCINATE [Concomitant]
     Active Substance: DEXAMETHASONE SODIUM SUCCINATE
     Dates: start: 20210209, end: 20210209
  1310. DEXAMETHASONE SODIUM SUCCINATE [Concomitant]
     Active Substance: DEXAMETHASONE SODIUM SUCCINATE
     Dates: start: 20210209, end: 20210209
  1311. DEXAMETHASONE SODIUM SUCCINATE [Concomitant]
     Active Substance: DEXAMETHASONE SODIUM SUCCINATE
     Dates: start: 20210323, end: 20210323
  1312. DEXAMETHASONE SODIUM SUCCINATE [Concomitant]
     Active Substance: DEXAMETHASONE SODIUM SUCCINATE
     Dates: start: 20210323, end: 20210323
  1313. DEXAMETHASONE SODIUM SUCCINATE [Concomitant]
     Active Substance: DEXAMETHASONE SODIUM SUCCINATE
     Dates: start: 20210209, end: 20210209
  1314. DEXAMETHASONE SODIUM SUCCINATE [Concomitant]
     Active Substance: DEXAMETHASONE SODIUM SUCCINATE
     Dates: start: 20210209, end: 20210209
  1315. DEXAMETHASONE SODIUM SUCCINATE [Concomitant]
     Active Substance: DEXAMETHASONE SODIUM SUCCINATE
     Dates: start: 20210323, end: 20210323
  1316. DEXAMETHASONE SODIUM SUCCINATE [Concomitant]
     Active Substance: DEXAMETHASONE SODIUM SUCCINATE
     Dates: start: 20210323, end: 20210323
  1317. DEXAMETHASONE SODIUM SUCCINATE [Concomitant]
     Active Substance: DEXAMETHASONE SODIUM SUCCINATE
     Dates: start: 20210302, end: 20210302
  1318. DEXAMETHASONE SODIUM SUCCINATE [Concomitant]
     Active Substance: DEXAMETHASONE SODIUM SUCCINATE
     Dates: start: 20210302, end: 20210302
  1319. DEXAMETHASONE SODIUM SUCCINATE [Concomitant]
     Active Substance: DEXAMETHASONE SODIUM SUCCINATE
     Dates: start: 20210323, end: 20210323
  1320. DEXAMETHASONE SODIUM SUCCINATE [Concomitant]
     Active Substance: DEXAMETHASONE SODIUM SUCCINATE
     Indication: Product used for unknown indication
     Dates: start: 20210323, end: 20210323
  1321. DEXAMETHASONE SODIUM SUCCINATE [Concomitant]
     Active Substance: DEXAMETHASONE SODIUM SUCCINATE
     Dates: start: 20210323, end: 20210323
  1322. DEXAMETHASONE SODIUM SUCCINATE [Concomitant]
     Active Substance: DEXAMETHASONE SODIUM SUCCINATE
     Dates: start: 20210323, end: 20210323
  1323. DEXAMETHASONE SODIUM SUCCINATE [Concomitant]
     Active Substance: DEXAMETHASONE SODIUM SUCCINATE
     Dates: start: 20210209, end: 20210209
  1324. DEXAMETHASONE SODIUM SUCCINATE [Concomitant]
     Active Substance: DEXAMETHASONE SODIUM SUCCINATE
     Dates: start: 20210209, end: 20210209
  1325. DEXAMETHASONE SODIUM SUCCINATE [Concomitant]
     Active Substance: DEXAMETHASONE SODIUM SUCCINATE
     Dates: start: 20210323, end: 20210323
  1326. DEXAMETHASONE SODIUM SUCCINATE [Concomitant]
     Active Substance: DEXAMETHASONE SODIUM SUCCINATE
     Dates: start: 20210302, end: 20210302
  1327. DEXAMETHASONE SODIUM SUCCINATE [Concomitant]
     Active Substance: DEXAMETHASONE SODIUM SUCCINATE
     Dates: start: 20210302, end: 20210302
  1328. DEXAMETHASONE SODIUM SUCCINATE [Concomitant]
     Active Substance: DEXAMETHASONE SODIUM SUCCINATE
     Dates: start: 20210302, end: 20210302
  1329. DEXAMETHASONE SODIUM SUCCINATE [Concomitant]
     Active Substance: DEXAMETHASONE SODIUM SUCCINATE
     Dates: start: 20210302, end: 20210302
  1330. DEXAMETHASONE SODIUM SUCCINATE [Concomitant]
     Active Substance: DEXAMETHASONE SODIUM SUCCINATE
     Dates: start: 20210209, end: 20210209
  1331. DEXAMETHASONE SODIUM SUCCINATE [Concomitant]
     Active Substance: DEXAMETHASONE SODIUM SUCCINATE
     Dates: start: 20210209, end: 20210209
  1332. DEXAMETHASONE SODIUM SUCCINATE [Concomitant]
     Active Substance: DEXAMETHASONE SODIUM SUCCINATE
     Dates: start: 20210323, end: 20210323
  1333. DEXAMETHASONE SODIUM SUCCINATE [Concomitant]
     Active Substance: DEXAMETHASONE SODIUM SUCCINATE
     Dates: start: 20210323, end: 20210323
  1334. DEXAMETHASONE SODIUM SUCCINATE [Concomitant]
     Active Substance: DEXAMETHASONE SODIUM SUCCINATE
     Route: 042
     Dates: start: 20210302, end: 20210302
  1335. DEXAMETHASONE SODIUM SUCCINATE [Concomitant]
     Active Substance: DEXAMETHASONE SODIUM SUCCINATE
     Route: 065
     Dates: start: 20210302, end: 20210302
  1336. DEXAMETHASONE SODIUM SUCCINATE [Concomitant]
     Active Substance: DEXAMETHASONE SODIUM SUCCINATE
     Dates: start: 20210209, end: 20210209
  1337. DEXAMETHASONE SODIUM SUCCINATE [Concomitant]
     Active Substance: DEXAMETHASONE SODIUM SUCCINATE
     Dates: start: 20210209, end: 20210209
  1338. DEXAMETHASONE SODIUM SUCCINATE [Concomitant]
     Active Substance: DEXAMETHASONE SODIUM SUCCINATE
     Route: 065
     Dates: start: 20210219, end: 20210219
  1339. DEXAMETHASONE SODIUM SUCCINATE [Concomitant]
     Active Substance: DEXAMETHASONE SODIUM SUCCINATE
     Route: 042
     Dates: start: 20210323, end: 20210323
  1340. DEXAMETHASONE SODIUM SUCCINATE [Concomitant]
     Active Substance: DEXAMETHASONE SODIUM SUCCINATE
     Dates: start: 20210119, end: 20210119
  1341. DEXAMETHASONE SODIUM SUCCINATE [Concomitant]
     Active Substance: DEXAMETHASONE SODIUM SUCCINATE
     Dates: start: 20210302, end: 20210302
  1342. FILGRASTIM [Concomitant]
     Active Substance: FILGRASTIM
     Indication: Prophylaxis
     Dates: start: 20201129, end: 20201206
  1343. FILGRASTIM [Concomitant]
     Active Substance: FILGRASTIM
     Dates: start: 20201220
  1344. FILGRASTIM [Concomitant]
     Active Substance: FILGRASTIM
     Dates: start: 20201220
  1345. FILGRASTIM [Concomitant]
     Active Substance: FILGRASTIM
     Dates: start: 20201220
  1346. FILGRASTIM [Concomitant]
     Active Substance: FILGRASTIM
     Dates: start: 20201129, end: 20201206
  1347. FILGRASTIM [Concomitant]
     Active Substance: FILGRASTIM
     Dates: start: 20201129, end: 20201206
  1348. FILGRASTIM [Concomitant]
     Active Substance: FILGRASTIM
     Dates: start: 20201129, end: 20201206
  1349. FILGRASTIM [Concomitant]
     Active Substance: FILGRASTIM
     Dates: start: 20201129, end: 20201206
  1350. FILGRASTIM [Concomitant]
     Active Substance: FILGRASTIM
     Dates: start: 20201220
  1351. FILGRASTIM [Concomitant]
     Active Substance: FILGRASTIM
     Dates: start: 20201129, end: 20201206
  1352. FILGRASTIM [Concomitant]
     Active Substance: FILGRASTIM
     Dates: start: 20201220
  1353. FILGRASTIM [Concomitant]
     Active Substance: FILGRASTIM
     Dates: start: 20201220
  1354. FILGRASTIM [Concomitant]
     Active Substance: FILGRASTIM
     Dates: start: 20201129, end: 20201206
  1355. FILGRASTIM [Concomitant]
     Active Substance: FILGRASTIM
     Dates: start: 20201129, end: 20201206
  1356. FILGRASTIM [Concomitant]
     Active Substance: FILGRASTIM
     Dates: start: 20201220
  1357. FILGRASTIM [Concomitant]
     Active Substance: FILGRASTIM
     Dates: start: 20201129, end: 20201206
  1358. FILGRASTIM [Concomitant]
     Active Substance: FILGRASTIM
     Dates: start: 20201220
  1359. FILGRASTIM [Concomitant]
     Active Substance: FILGRASTIM
     Dates: start: 20201220
  1360. FILGRASTIM [Concomitant]
     Active Substance: FILGRASTIM
     Dates: start: 20201129, end: 20201206
  1361. FILGRASTIM [Concomitant]
     Active Substance: FILGRASTIM
     Dates: start: 20201129, end: 20201206
  1362. FILGRASTIM [Concomitant]
     Active Substance: FILGRASTIM
     Dates: start: 20201220
  1363. FILGRASTIM [Concomitant]
     Active Substance: FILGRASTIM
     Dates: start: 20201129, end: 20201206
  1364. FILGRASTIM [Concomitant]
     Active Substance: FILGRASTIM
     Dates: start: 20201129, end: 20201206
  1365. FILGRASTIM [Concomitant]
     Active Substance: FILGRASTIM
     Dates: start: 20201129, end: 20201206
  1366. FILGRASTIM [Concomitant]
     Active Substance: FILGRASTIM
     Dates: start: 20201129, end: 20201206
  1367. FILGRASTIM [Concomitant]
     Active Substance: FILGRASTIM
     Dates: start: 20201129, end: 20201206
  1368. FILGRASTIM [Concomitant]
     Active Substance: FILGRASTIM
     Dates: start: 20201129, end: 20201206
  1369. FILGRASTIM [Concomitant]
     Active Substance: FILGRASTIM
     Dates: start: 20201129, end: 20201206
  1370. FILGRASTIM [Concomitant]
     Active Substance: FILGRASTIM
     Dates: start: 20201129, end: 20201206
  1371. FILGRASTIM [Concomitant]
     Active Substance: FILGRASTIM
     Dates: start: 20201220
  1372. FILGRASTIM [Concomitant]
     Active Substance: FILGRASTIM
     Indication: Prophylaxis
     Route: 065
     Dates: start: 20201129, end: 20201206
  1373. FILGRASTIM [Concomitant]
     Active Substance: FILGRASTIM
     Route: 065
     Dates: start: 20201220, end: 20210513
  1374. FILGRASTIM [Concomitant]
     Active Substance: FILGRASTIM
     Route: 065
     Dates: start: 20201220
  1375. FILGRASTIM [Concomitant]
     Active Substance: FILGRASTIM
     Indication: Prophylaxis
     Route: 065
     Dates: start: 20201220
  1376. FILGRASTIM [Concomitant]
     Active Substance: FILGRASTIM
     Route: 065
     Dates: start: 20201129, end: 20201206
  1377. FILGRASTIM [Concomitant]
     Active Substance: FILGRASTIM
     Indication: Prophylaxis
     Route: 065
     Dates: start: 20201220
  1378. FILGRASTIM [Concomitant]
     Active Substance: FILGRASTIM
     Route: 065
     Dates: start: 20201220
  1379. FILGRASTIM [Concomitant]
     Active Substance: FILGRASTIM
     Route: 065
     Dates: start: 20201129, end: 20201206
  1380. FILGRASTIM [Concomitant]
     Active Substance: FILGRASTIM
     Route: 065
     Dates: start: 20201129, end: 20201206
  1381. FILGRASTIM [Concomitant]
     Active Substance: FILGRASTIM
     Route: 065
     Dates: start: 20201129, end: 20201206
  1382. FILGRASTIM [Concomitant]
     Active Substance: FILGRASTIM
     Route: 065
     Dates: start: 20201129, end: 20201206
  1383. FILGRASTIM [Concomitant]
     Active Substance: FILGRASTIM
     Route: 065
     Dates: start: 20201220
  1384. FILGRASTIM [Concomitant]
     Active Substance: FILGRASTIM
     Route: 065
     Dates: start: 20201129, end: 20201206
  1385. FILGRASTIM [Concomitant]
     Active Substance: FILGRASTIM
     Route: 065
     Dates: start: 20201129, end: 20201206
  1386. FILGRASTIM [Concomitant]
     Active Substance: FILGRASTIM
     Route: 065
     Dates: start: 20201220
  1387. FILGRASTIM [Concomitant]
     Active Substance: FILGRASTIM
     Route: 065
     Dates: start: 20201206, end: 20201220
  1388. FILGRASTIM [Concomitant]
     Active Substance: FILGRASTIM
     Route: 065
     Dates: start: 20201220
  1389. FILGRASTIM [Concomitant]
     Active Substance: FILGRASTIM
     Route: 065
     Dates: start: 20201220
  1390. FILGRASTIM [Concomitant]
     Active Substance: FILGRASTIM
     Route: 065
     Dates: start: 20201206, end: 20201220
  1391. FILGRASTIM [Concomitant]
     Active Substance: FILGRASTIM
     Route: 065
     Dates: start: 20201220
  1392. FILGRASTIM [Concomitant]
     Active Substance: FILGRASTIM
     Route: 065
     Dates: start: 20201220
  1393. FILGRASTIM [Concomitant]
     Active Substance: FILGRASTIM
     Route: 065
     Dates: start: 20201129, end: 20201206
  1394. FILGRASTIM [Concomitant]
     Active Substance: FILGRASTIM
     Route: 065
     Dates: start: 20201129, end: 20201206
  1395. FILGRASTIM [Concomitant]
     Active Substance: FILGRASTIM
     Route: 065
     Dates: start: 20201129, end: 20201206
  1396. FILGRASTIM [Concomitant]
     Active Substance: FILGRASTIM
     Route: 065
     Dates: start: 20201129, end: 20201206
  1397. FILGRASTIM [Concomitant]
     Active Substance: FILGRASTIM
     Dates: start: 20201220
  1398. FILGRASTIM [Concomitant]
     Active Substance: FILGRASTIM
     Dates: start: 20201220
  1399. FILGRASTIM [Concomitant]
     Active Substance: FILGRASTIM
     Dates: start: 20201220
  1400. FILGRASTIM [Concomitant]
     Active Substance: FILGRASTIM
     Dates: start: 20201129, end: 20201206
  1401. FILGRASTIM [Concomitant]
     Active Substance: FILGRASTIM
     Dates: start: 20201129, end: 20201206
  1402. FILGRASTIM [Concomitant]
     Active Substance: FILGRASTIM
     Dates: start: 20201129, end: 20201206
  1403. FILGRASTIM [Concomitant]
     Active Substance: FILGRASTIM
     Dates: start: 20201220
  1404. FILGRASTIM [Concomitant]
     Active Substance: FILGRASTIM
     Dates: start: 20201129, end: 20201206
  1405. FILGRASTIM [Concomitant]
     Active Substance: FILGRASTIM
     Dates: start: 20201129, end: 20201206
  1406. FILGRASTIM [Concomitant]
     Active Substance: FILGRASTIM
     Dates: start: 20201129, end: 20201206
  1407. FILGRASTIM [Concomitant]
     Active Substance: FILGRASTIM
     Dates: start: 20201129, end: 20201206
  1408. FILGRASTIM [Concomitant]
     Active Substance: FILGRASTIM
     Dates: start: 20201129, end: 20201206
  1409. OMEPRAZOLE [Concomitant]
     Active Substance: OMEPRAZOLE
     Indication: Gastrointestinal disorder prophylaxis
     Route: 050
     Dates: start: 20201118
  1410. OMEPRAZOLE [Concomitant]
     Active Substance: OMEPRAZOLE
     Route: 065
  1411. OMEPRAZOLE [Concomitant]
     Active Substance: OMEPRAZOLE
     Route: 065
     Dates: start: 20201118
  1412. OMEPRAZOLE [Concomitant]
     Active Substance: OMEPRAZOLE
     Dates: start: 20201118
  1413. OMEPRAZOLE [Concomitant]
     Active Substance: OMEPRAZOLE
     Dates: start: 20201118
  1414. OMEPRAZOLE [Concomitant]
     Active Substance: OMEPRAZOLE
  1415. OMEPRAZOLE [Concomitant]
     Active Substance: OMEPRAZOLE
  1416. OMEPRAZOLE [Concomitant]
     Active Substance: OMEPRAZOLE
     Dates: start: 20201118
  1417. OMEPRAZOLE [Concomitant]
     Active Substance: OMEPRAZOLE
  1418. OMEPRAZOLE [Concomitant]
     Active Substance: OMEPRAZOLE
  1419. OMEPRAZOLE [Concomitant]
     Active Substance: OMEPRAZOLE
  1420. OMEPRAZOLE [Concomitant]
     Active Substance: OMEPRAZOLE
  1421. OMEPRAZOLE [Concomitant]
     Active Substance: OMEPRAZOLE
  1422. OMEPRAZOLE [Concomitant]
     Active Substance: OMEPRAZOLE
  1423. OMEPRAZOLE [Concomitant]
     Active Substance: OMEPRAZOLE
  1424. OMEPRAZOLE [Concomitant]
     Active Substance: OMEPRAZOLE
  1425. OMEPRAZOLE [Concomitant]
     Active Substance: OMEPRAZOLE
  1426. OMEPRAZOLE [Concomitant]
     Active Substance: OMEPRAZOLE
  1427. OMEPRAZOLE [Concomitant]
     Active Substance: OMEPRAZOLE
  1428. OMEPRAZOLE [Concomitant]
     Active Substance: OMEPRAZOLE
  1429. OMEPRAZOLE [Concomitant]
     Active Substance: OMEPRAZOLE
  1430. OMEPRAZOLE [Concomitant]
     Active Substance: OMEPRAZOLE
  1431. OMEPRAZOLE [Concomitant]
     Active Substance: OMEPRAZOLE
     Dates: start: 20201118
  1432. OMEPRAZOLE [Concomitant]
     Active Substance: OMEPRAZOLE
     Indication: Gastrointestinal disorder prophylaxis
  1433. OMEPRAZOLE [Concomitant]
     Active Substance: OMEPRAZOLE
     Indication: Product used for unknown indication
     Route: 050
     Dates: start: 20201118
  1434. OMEPRAZOLE [Concomitant]
     Active Substance: OMEPRAZOLE
     Route: 065
  1435. OMEPRAZOLE [Concomitant]
     Active Substance: OMEPRAZOLE
     Route: 065
  1436. OMEPRAZOLE [Concomitant]
     Active Substance: OMEPRAZOLE
     Route: 065
     Dates: start: 20201118
  1437. OMEPRAZOLE [Concomitant]
     Active Substance: OMEPRAZOLE
     Route: 065
  1438. OMEPRAZOLE [Concomitant]
     Active Substance: OMEPRAZOLE
     Route: 065
  1439. OMEPRAZOLE [Concomitant]
     Active Substance: OMEPRAZOLE
     Route: 065
  1440. OMEPRAZOLE [Concomitant]
     Active Substance: OMEPRAZOLE
     Route: 065
     Dates: start: 20201118
  1441. OMEPRAZOLE [Concomitant]
     Active Substance: OMEPRAZOLE
     Route: 065
  1442. OMEPRAZOLE [Concomitant]
     Active Substance: OMEPRAZOLE
     Route: 065
  1443. OMEPRAZOLE [Concomitant]
     Active Substance: OMEPRAZOLE
     Route: 065
  1444. OMEPRAZOLE [Concomitant]
     Active Substance: OMEPRAZOLE
     Route: 065
  1445. OMEPRAZOLE [Concomitant]
     Active Substance: OMEPRAZOLE
     Route: 065
  1446. OMEPRAZOLE [Concomitant]
     Active Substance: OMEPRAZOLE
     Route: 065
  1447. OMEPRAZOLE [Concomitant]
     Active Substance: OMEPRAZOLE
     Route: 065
  1448. OMEPRAZOLE [Concomitant]
     Active Substance: OMEPRAZOLE
     Route: 065
  1449. OMEPRAZOLE [Concomitant]
     Active Substance: OMEPRAZOLE
     Route: 065
  1450. ACETAMINOPHEN [Concomitant]
     Active Substance: ACETAMINOPHEN
     Indication: Prophylaxis
     Route: 065
     Dates: start: 20201123
  1451. ACETAMINOPHEN [Concomitant]
     Active Substance: ACETAMINOPHEN
     Route: 065
     Dates: start: 20201124, end: 20201124
  1452. ACETAMINOPHEN [Concomitant]
     Active Substance: ACETAMINOPHEN
     Route: 065
     Dates: start: 20201215, end: 20201215
  1453. ACETAMINOPHEN [Concomitant]
     Active Substance: ACETAMINOPHEN
     Route: 065
     Dates: start: 20210119, end: 20210119
  1454. ACETAMINOPHEN [Concomitant]
     Active Substance: ACETAMINOPHEN
     Route: 048
     Dates: start: 20210126, end: 20210126
  1455. ACETAMINOPHEN [Concomitant]
     Active Substance: ACETAMINOPHEN
     Route: 065
     Dates: start: 20210126, end: 20210126
  1456. ACETAMINOPHEN [Concomitant]
     Active Substance: ACETAMINOPHEN
     Route: 050
     Dates: start: 20210126, end: 20210126
  1457. ACETAMINOPHEN [Concomitant]
     Active Substance: ACETAMINOPHEN
     Route: 065
     Dates: start: 20210209, end: 20210209
  1458. ACETAMINOPHEN [Concomitant]
     Active Substance: ACETAMINOPHEN
     Route: 065
     Dates: start: 20210216, end: 20210216
  1459. ACETAMINOPHEN [Concomitant]
     Active Substance: ACETAMINOPHEN
     Route: 065
     Dates: start: 20210302, end: 20210302
  1460. ACETAMINOPHEN [Concomitant]
     Active Substance: ACETAMINOPHEN
     Route: 065
     Dates: start: 20210309, end: 20210309
  1461. ACETAMINOPHEN [Concomitant]
     Active Substance: ACETAMINOPHEN
     Route: 048
     Dates: start: 20210323, end: 20210323
  1462. ACETAMINOPHEN [Concomitant]
     Active Substance: ACETAMINOPHEN
     Route: 065
     Dates: start: 20210323, end: 20210323
  1463. ACETAMINOPHEN [Concomitant]
     Active Substance: ACETAMINOPHEN
     Route: 065
     Dates: start: 20210126, end: 20210126
  1464. ACETAMINOPHEN [Concomitant]
     Active Substance: ACETAMINOPHEN
     Route: 048
     Dates: start: 20201215, end: 20201215
  1465. ACETAMINOPHEN [Concomitant]
     Active Substance: ACETAMINOPHEN
     Route: 048
     Dates: start: 20201124, end: 20201124
  1466. ACETAMINOPHEN [Concomitant]
     Active Substance: ACETAMINOPHEN
     Route: 048
     Dates: start: 20210309, end: 20210309
  1467. ACETAMINOPHEN [Concomitant]
     Active Substance: ACETAMINOPHEN
     Route: 048
     Dates: start: 20210323, end: 20210323
  1468. ACETAMINOPHEN [Concomitant]
     Active Substance: ACETAMINOPHEN
     Route: 048
     Dates: start: 20210302, end: 20210302
  1469. ACETAMINOPHEN [Concomitant]
     Active Substance: ACETAMINOPHEN
     Route: 048
     Dates: start: 20210209, end: 20210209
  1470. ACETAMINOPHEN [Concomitant]
     Active Substance: ACETAMINOPHEN
     Route: 048
     Dates: start: 20210119, end: 20210119
  1471. ACETAMINOPHEN [Concomitant]
     Active Substance: ACETAMINOPHEN
     Route: 048
     Dates: start: 20210216, end: 20210216
  1472. ACETAMINOPHEN [Concomitant]
     Active Substance: ACETAMINOPHEN
     Route: 048
     Dates: start: 20210126, end: 20210126
  1473. ACETAMINOPHEN [Concomitant]
     Active Substance: ACETAMINOPHEN
     Route: 048
     Dates: start: 20201124, end: 20201124
  1474. ACETAMINOPHEN [Concomitant]
     Active Substance: ACETAMINOPHEN
     Dates: start: 20210209, end: 20210209
  1475. ACETAMINOPHEN [Concomitant]
     Active Substance: ACETAMINOPHEN
     Route: 048
     Dates: start: 20210323, end: 20210323
  1476. ACETAMINOPHEN [Concomitant]
     Active Substance: ACETAMINOPHEN
     Dates: start: 20210126, end: 20210126
  1477. ACETAMINOPHEN [Concomitant]
     Active Substance: ACETAMINOPHEN
     Route: 048
     Dates: start: 20210126, end: 20210126
  1478. ACETAMINOPHEN [Concomitant]
     Active Substance: ACETAMINOPHEN
     Route: 065
     Dates: start: 20210323, end: 20210323
  1479. ACETAMINOPHEN [Concomitant]
     Active Substance: ACETAMINOPHEN
     Dates: start: 20201123
  1480. ACETAMINOPHEN [Concomitant]
     Active Substance: ACETAMINOPHEN
     Dates: start: 20201123
  1481. ACETAMINOPHEN [Concomitant]
     Active Substance: ACETAMINOPHEN
     Dates: start: 20201123
  1482. ACETAMINOPHEN [Concomitant]
     Active Substance: ACETAMINOPHEN
     Dates: start: 20210323, end: 20210323
  1483. ACETAMINOPHEN [Concomitant]
     Active Substance: ACETAMINOPHEN
     Dates: start: 20210209, end: 20210209
  1484. ACETAMINOPHEN [Concomitant]
     Active Substance: ACETAMINOPHEN
     Route: 048
     Dates: start: 20201215, end: 20201215
  1485. ACETAMINOPHEN [Concomitant]
     Active Substance: ACETAMINOPHEN
     Route: 048
     Dates: start: 20210119, end: 20210119
  1486. ACETAMINOPHEN [Concomitant]
     Active Substance: ACETAMINOPHEN
     Dates: start: 20210302, end: 20210302
  1487. ACETAMINOPHEN [Concomitant]
     Active Substance: ACETAMINOPHEN
     Dates: start: 20210216, end: 20210216
  1488. ACETAMINOPHEN [Concomitant]
     Active Substance: ACETAMINOPHEN
     Dates: start: 20210309, end: 20210309
  1489. ACETAMINOPHEN [Concomitant]
     Active Substance: ACETAMINOPHEN
     Route: 065
     Dates: start: 20210126, end: 20210126
  1490. ACETAMINOPHEN [Concomitant]
     Active Substance: ACETAMINOPHEN
     Dates: start: 20210309, end: 20210309
  1491. ACETAMINOPHEN [Concomitant]
     Active Substance: ACETAMINOPHEN
     Dates: start: 20210119, end: 20210119
  1492. ACETAMINOPHEN [Concomitant]
     Active Substance: ACETAMINOPHEN
     Route: 065
     Dates: start: 20210126, end: 20210126
  1493. ACETAMINOPHEN [Concomitant]
     Active Substance: ACETAMINOPHEN
     Dates: start: 20210302, end: 20210302
  1494. ACETAMINOPHEN [Concomitant]
     Active Substance: ACETAMINOPHEN
     Dates: start: 20201215, end: 20201215
  1495. ACETAMINOPHEN [Concomitant]
     Active Substance: ACETAMINOPHEN
     Route: 065
     Dates: start: 20210126, end: 20210126
  1496. ACETAMINOPHEN [Concomitant]
     Active Substance: ACETAMINOPHEN
     Dates: start: 20210216, end: 20210216
  1497. ACETAMINOPHEN [Concomitant]
     Active Substance: ACETAMINOPHEN
     Dates: start: 20210309, end: 20210309
  1498. ACETAMINOPHEN [Concomitant]
     Active Substance: ACETAMINOPHEN
     Dates: start: 20210216, end: 20210216
  1499. ACETAMINOPHEN [Concomitant]
     Active Substance: ACETAMINOPHEN
     Route: 065
     Dates: start: 20210216, end: 20210216
  1500. ACETAMINOPHEN [Concomitant]
     Active Substance: ACETAMINOPHEN
     Indication: Prophylaxis
     Dates: start: 20201215, end: 20201215
  1501. ACETAMINOPHEN [Concomitant]
     Active Substance: ACETAMINOPHEN
     Dates: start: 20201215, end: 20201215
  1502. ACETAMINOPHEN [Concomitant]
     Active Substance: ACETAMINOPHEN
     Dates: start: 20210119, end: 20210119
  1503. ACETAMINOPHEN [Concomitant]
     Active Substance: ACETAMINOPHEN
     Dates: start: 20210119, end: 20210119
  1504. ACETAMINOPHEN [Concomitant]
     Active Substance: ACETAMINOPHEN
     Dates: start: 20210126, end: 20210126
  1505. ACETAMINOPHEN [Concomitant]
     Active Substance: ACETAMINOPHEN
     Dates: start: 20201124, end: 20201124
  1506. ACETAMINOPHEN [Concomitant]
     Active Substance: ACETAMINOPHEN
     Dates: start: 20210209, end: 20210209
  1507. ACETAMINOPHEN [Concomitant]
     Active Substance: ACETAMINOPHEN
     Dates: start: 20210126, end: 20210126
  1508. ACETAMINOPHEN [Concomitant]
     Active Substance: ACETAMINOPHEN
     Dates: start: 20210309, end: 20210309
  1509. ACETAMINOPHEN [Concomitant]
     Active Substance: ACETAMINOPHEN
     Dates: start: 20210309, end: 20210309
  1510. ACETAMINOPHEN [Concomitant]
     Active Substance: ACETAMINOPHEN
     Dates: start: 20210302, end: 20210302
  1511. ACETAMINOPHEN [Concomitant]
     Active Substance: ACETAMINOPHEN
     Dates: start: 20210126, end: 20210126
  1512. ACETAMINOPHEN [Concomitant]
     Active Substance: ACETAMINOPHEN
     Dates: start: 20210302, end: 20210302
  1513. ACETAMINOPHEN [Concomitant]
     Active Substance: ACETAMINOPHEN
     Dates: start: 20210119, end: 20210119
  1514. ACETAMINOPHEN [Concomitant]
     Active Substance: ACETAMINOPHEN
     Dates: start: 20210216, end: 20210216
  1515. ACETAMINOPHEN [Concomitant]
     Active Substance: ACETAMINOPHEN
     Dates: start: 20201215, end: 20201215
  1516. ACETAMINOPHEN [Concomitant]
     Active Substance: ACETAMINOPHEN
     Dates: start: 20201124, end: 20201124
  1517. ACETAMINOPHEN [Concomitant]
     Active Substance: ACETAMINOPHEN
     Dates: start: 20210126, end: 20210126
  1518. ACETAMINOPHEN [Concomitant]
     Active Substance: ACETAMINOPHEN
     Route: 048
     Dates: start: 20210302, end: 20210302
  1519. ACETAMINOPHEN [Concomitant]
     Active Substance: ACETAMINOPHEN
     Dates: start: 20210209, end: 20210209
  1520. ACETAMINOPHEN [Concomitant]
     Active Substance: ACETAMINOPHEN
     Dates: start: 20210126, end: 20210126
  1521. ACETAMINOPHEN [Concomitant]
     Active Substance: ACETAMINOPHEN
     Route: 048
     Dates: start: 20210309, end: 20210309
  1522. ACETAMINOPHEN [Concomitant]
     Active Substance: ACETAMINOPHEN
     Dates: start: 20210126, end: 20210126
  1523. ACETAMINOPHEN [Concomitant]
     Active Substance: ACETAMINOPHEN
     Dates: start: 20210216, end: 20210216
  1524. ACETAMINOPHEN [Concomitant]
     Active Substance: ACETAMINOPHEN
     Dates: start: 20210216, end: 20210216
  1525. ACETAMINOPHEN [Concomitant]
     Active Substance: ACETAMINOPHEN
     Dates: start: 20210302, end: 20210302
  1526. ACETAMINOPHEN [Concomitant]
     Active Substance: ACETAMINOPHEN
     Dates: start: 20210302, end: 20210302
  1527. ACETAMINOPHEN [Concomitant]
     Active Substance: ACETAMINOPHEN
     Dates: start: 20201124, end: 20201124
  1528. ACETAMINOPHEN [Concomitant]
     Active Substance: ACETAMINOPHEN
     Dates: start: 20201124, end: 20201124
  1529. ACETAMINOPHEN [Concomitant]
     Active Substance: ACETAMINOPHEN
     Dates: start: 20210119, end: 20210119
  1530. ACETAMINOPHEN [Concomitant]
     Active Substance: ACETAMINOPHEN
     Dates: start: 20210119, end: 20210119
  1531. ACETAMINOPHEN [Concomitant]
     Active Substance: ACETAMINOPHEN
     Dates: start: 20201215, end: 20201215
  1532. ACETAMINOPHEN [Concomitant]
     Active Substance: ACETAMINOPHEN
     Dates: start: 20201215, end: 20201215
  1533. ACETAMINOPHEN [Concomitant]
     Active Substance: ACETAMINOPHEN
     Route: 048
     Dates: start: 20210309, end: 20210309
  1534. ACETAMINOPHEN [Concomitant]
     Active Substance: ACETAMINOPHEN
     Dates: start: 20210309, end: 20210309
  1535. ACETAMINOPHEN [Concomitant]
     Active Substance: ACETAMINOPHEN
     Dates: start: 20210209, end: 20210209
  1536. ACETAMINOPHEN [Concomitant]
     Active Substance: ACETAMINOPHEN
     Dates: start: 20210209, end: 20210209
  1537. ACETAMINOPHEN [Concomitant]
     Active Substance: ACETAMINOPHEN
     Dates: start: 20210126, end: 20210126
  1538. ACETAMINOPHEN [Concomitant]
     Active Substance: ACETAMINOPHEN
     Dates: start: 20210126, end: 20210126
  1539. ACETAMINOPHEN [Concomitant]
     Active Substance: ACETAMINOPHEN
     Dates: start: 20210126, end: 20210126
  1540. ACETAMINOPHEN [Concomitant]
     Active Substance: ACETAMINOPHEN
     Dates: start: 20210126, end: 20210126
  1541. ACETAMINOPHEN [Concomitant]
     Active Substance: ACETAMINOPHEN
     Dates: start: 20201124, end: 20201124
  1542. ACETAMINOPHEN [Concomitant]
     Active Substance: ACETAMINOPHEN
     Dates: start: 20201124, end: 20201124
  1543. ACETAMINOPHEN [Concomitant]
     Active Substance: ACETAMINOPHEN
     Dates: start: 20210323, end: 20210323
  1544. ACETAMINOPHEN [Concomitant]
     Active Substance: ACETAMINOPHEN
     Dates: start: 20210323, end: 20210323
  1545. ACETAMINOPHEN [Concomitant]
     Active Substance: ACETAMINOPHEN
     Dates: start: 20210309, end: 20210309
  1546. ACETAMINOPHEN [Concomitant]
     Active Substance: ACETAMINOPHEN
     Dates: start: 20210309, end: 20210309
  1547. ACETAMINOPHEN [Concomitant]
     Active Substance: ACETAMINOPHEN
     Dates: start: 20210126, end: 20210126
  1548. ACETAMINOPHEN [Concomitant]
     Active Substance: ACETAMINOPHEN
     Dates: start: 20210126, end: 20210126
  1549. ACETAMINOPHEN [Concomitant]
     Active Substance: ACETAMINOPHEN
     Dates: start: 20210119, end: 20210119
  1550. ACETAMINOPHEN [Concomitant]
     Active Substance: ACETAMINOPHEN
     Indication: Prophylaxis
     Dates: start: 20210119, end: 20210119
  1551. ACETAMINOPHEN [Concomitant]
     Active Substance: ACETAMINOPHEN
     Dates: start: 20210209, end: 20210209
  1552. ACETAMINOPHEN [Concomitant]
     Active Substance: ACETAMINOPHEN
     Dates: start: 20210209, end: 20210209
  1553. ACETAMINOPHEN [Concomitant]
     Active Substance: ACETAMINOPHEN
     Dates: start: 20210216, end: 20210216
  1554. ACETAMINOPHEN [Concomitant]
     Active Substance: ACETAMINOPHEN
     Route: 048
     Dates: start: 20210216, end: 20210216
  1555. ACETAMINOPHEN [Concomitant]
     Active Substance: ACETAMINOPHEN
     Dates: start: 20201215, end: 20201215
  1556. ACETAMINOPHEN [Concomitant]
     Active Substance: ACETAMINOPHEN
     Dates: start: 20201215, end: 20201215
  1557. ACETAMINOPHEN [Concomitant]
     Active Substance: ACETAMINOPHEN
     Dates: start: 20210302, end: 20210302
  1558. ACETAMINOPHEN [Concomitant]
     Active Substance: ACETAMINOPHEN
     Dates: start: 20210302, end: 20210302
  1559. ACETAMINOPHEN [Concomitant]
     Active Substance: ACETAMINOPHEN
     Dates: start: 20201215, end: 20201215
  1560. ACETAMINOPHEN [Concomitant]
     Active Substance: ACETAMINOPHEN
     Dates: start: 20210126, end: 20210126
  1561. ACETAMINOPHEN [Concomitant]
     Active Substance: ACETAMINOPHEN
     Dates: start: 20210126, end: 20210126
  1562. ACETAMINOPHEN [Concomitant]
     Active Substance: ACETAMINOPHEN
     Dates: start: 20201215, end: 20201215
  1563. ACETAMINOPHEN [Concomitant]
     Active Substance: ACETAMINOPHEN
     Dates: start: 20201123
  1564. ACETAMINOPHEN [Concomitant]
     Active Substance: ACETAMINOPHEN
     Dates: start: 20201124, end: 20201124
  1565. ACETAMINOPHEN [Concomitant]
     Active Substance: ACETAMINOPHEN
     Dates: start: 20210126, end: 20210126
  1566. ACETAMINOPHEN [Concomitant]
     Active Substance: ACETAMINOPHEN
     Route: 048
     Dates: start: 20210209, end: 20210209
  1567. ACETAMINOPHEN [Concomitant]
     Active Substance: ACETAMINOPHEN
     Route: 048
     Dates: start: 20210126, end: 20210126
  1568. ACETAMINOPHEN [Concomitant]
     Active Substance: ACETAMINOPHEN
     Dates: start: 20210302, end: 20210302
  1569. ACETAMINOPHEN [Concomitant]
     Active Substance: ACETAMINOPHEN
     Dates: start: 20210309, end: 20210309
  1570. ACETAMINOPHEN [Concomitant]
     Active Substance: ACETAMINOPHEN
     Dates: start: 20201123
  1571. ACETAMINOPHEN [Concomitant]
     Active Substance: ACETAMINOPHEN
     Dates: start: 20201123
  1572. ACETAMINOPHEN [Concomitant]
     Active Substance: ACETAMINOPHEN
     Route: 048
     Dates: start: 20210323, end: 20210323
  1573. ACETAMINOPHEN [Concomitant]
     Active Substance: ACETAMINOPHEN
     Route: 048
     Dates: start: 20210119, end: 20210119
  1574. ACETAMINOPHEN [Concomitant]
     Active Substance: ACETAMINOPHEN
     Route: 065
     Dates: start: 20201123
  1575. ACETAMINOPHEN [Concomitant]
     Active Substance: ACETAMINOPHEN
     Route: 048
     Dates: start: 20210209, end: 20210209
  1576. ACETAMINOPHEN [Concomitant]
     Active Substance: ACETAMINOPHEN
     Route: 048
     Dates: start: 20210126, end: 20210126
  1577. ACETAMINOPHEN [Concomitant]
     Active Substance: ACETAMINOPHEN
     Route: 048
     Dates: start: 20210309, end: 20210309
  1578. ACETAMINOPHEN [Concomitant]
     Active Substance: ACETAMINOPHEN
     Route: 048
     Dates: start: 20201215, end: 20201215
  1579. ACETAMINOPHEN [Concomitant]
     Active Substance: ACETAMINOPHEN
     Route: 048
     Dates: start: 20210216, end: 20210216
  1580. ACETAMINOPHEN [Concomitant]
     Active Substance: ACETAMINOPHEN
     Route: 048
     Dates: start: 20210302, end: 20210302
  1581. ACETAMINOPHEN [Concomitant]
     Active Substance: ACETAMINOPHEN
     Route: 048
     Dates: start: 20201124, end: 20201124
  1582. ACETAMINOPHEN [Concomitant]
     Active Substance: ACETAMINOPHEN
     Route: 048
     Dates: start: 20210323, end: 20210323
  1583. ACETAMINOPHEN [Concomitant]
     Active Substance: ACETAMINOPHEN
     Route: 048
     Dates: start: 20210123, end: 20210123
  1584. ACETAMINOPHEN [Concomitant]
     Active Substance: ACETAMINOPHEN
     Dates: start: 20201123
  1585. ACETAMINOPHEN [Concomitant]
     Active Substance: ACETAMINOPHEN
     Indication: Prophylaxis
     Route: 048
     Dates: start: 20210119, end: 20210119
  1586. ACETAMINOPHEN [Concomitant]
     Active Substance: ACETAMINOPHEN
     Route: 050
     Dates: start: 20210216, end: 20210216
  1587. ACETAMINOPHEN [Concomitant]
     Active Substance: ACETAMINOPHEN
     Route: 048
     Dates: start: 20201124, end: 20201124
  1588. ACETAMINOPHEN [Concomitant]
     Active Substance: ACETAMINOPHEN
     Route: 050
     Dates: start: 20210126, end: 20210126
  1589. ACETAMINOPHEN [Concomitant]
     Active Substance: ACETAMINOPHEN
     Route: 050
     Dates: start: 20210323, end: 20210323
  1590. ACETAMINOPHEN [Concomitant]
     Active Substance: ACETAMINOPHEN
     Route: 048
     Dates: start: 20210126, end: 20210126
  1591. ACETAMINOPHEN [Concomitant]
     Active Substance: ACETAMINOPHEN
     Route: 050
     Dates: start: 20210309, end: 20210309
  1592. ACETAMINOPHEN [Concomitant]
     Active Substance: ACETAMINOPHEN
     Route: 050
     Dates: start: 20201123
  1593. ACETAMINOPHEN [Concomitant]
     Active Substance: ACETAMINOPHEN
     Route: 048
     Dates: start: 20201215, end: 20201215
  1594. ACETAMINOPHEN [Concomitant]
     Active Substance: ACETAMINOPHEN
     Route: 050
     Dates: start: 20210302, end: 20210302
  1595. ACETAMINOPHEN [Concomitant]
     Active Substance: ACETAMINOPHEN
     Route: 050
     Dates: start: 20210209, end: 20210209
  1596. ACETAMINOPHEN [Concomitant]
     Active Substance: ACETAMINOPHEN
     Route: 048
     Dates: start: 20210323, end: 20210323
  1597. ACETAMINOPHEN [Concomitant]
     Active Substance: ACETAMINOPHEN
     Route: 065
     Dates: start: 20210216, end: 20210216
  1598. ACETAMINOPHEN [Concomitant]
     Active Substance: ACETAMINOPHEN
     Route: 065
     Dates: start: 20201124, end: 20201124
  1599. ACETAMINOPHEN [Concomitant]
     Active Substance: ACETAMINOPHEN
     Route: 048
     Dates: start: 20210209, end: 20210209
  1600. ACETAMINOPHEN [Concomitant]
     Active Substance: ACETAMINOPHEN
     Route: 065
     Dates: start: 20210302, end: 20210302
  1601. ACETAMINOPHEN [Concomitant]
     Active Substance: ACETAMINOPHEN
     Route: 048
     Dates: start: 20210126, end: 20210126
  1602. ACETAMINOPHEN [Concomitant]
     Active Substance: ACETAMINOPHEN
     Route: 065
     Dates: start: 20210216, end: 20210216
  1603. ACETAMINOPHEN [Concomitant]
     Active Substance: ACETAMINOPHEN
     Route: 048
     Dates: start: 20201215, end: 20201215
  1604. ACETAMINOPHEN [Concomitant]
     Active Substance: ACETAMINOPHEN
     Route: 048
     Dates: start: 20210119, end: 20210119
  1605. ACETAMINOPHEN [Concomitant]
     Active Substance: ACETAMINOPHEN
     Route: 065
     Dates: start: 20201124, end: 20201124
  1606. ACETAMINOPHEN [Concomitant]
     Active Substance: ACETAMINOPHEN
     Route: 065
     Dates: start: 20201123, end: 20201123
  1607. ACETAMINOPHEN [Concomitant]
     Active Substance: ACETAMINOPHEN
     Route: 065
     Dates: start: 20210126, end: 20210126
  1608. ACETAMINOPHEN [Concomitant]
     Active Substance: ACETAMINOPHEN
     Route: 065
     Dates: start: 20201215, end: 20201215
  1609. ACETAMINOPHEN [Concomitant]
     Active Substance: ACETAMINOPHEN
     Route: 065
     Dates: start: 20210126, end: 20210126
  1610. ACETAMINOPHEN [Concomitant]
     Active Substance: ACETAMINOPHEN
     Route: 065
     Dates: start: 20210323, end: 20210323
  1611. ACETAMINOPHEN [Concomitant]
     Active Substance: ACETAMINOPHEN
     Route: 065
     Dates: start: 20201123, end: 20201123
  1612. ACETAMINOPHEN [Concomitant]
     Active Substance: ACETAMINOPHEN
     Route: 048
     Dates: start: 20201215, end: 20201215
  1613. ACETAMINOPHEN [Concomitant]
     Active Substance: ACETAMINOPHEN
     Route: 065
     Dates: start: 20210302, end: 20210302
  1614. ACETAMINOPHEN [Concomitant]
     Active Substance: ACETAMINOPHEN
     Route: 065
     Dates: start: 20210209, end: 20210209
  1615. ACETAMINOPHEN [Concomitant]
     Active Substance: ACETAMINOPHEN
     Route: 065
     Dates: start: 20210216, end: 20210216
  1616. ACETAMINOPHEN [Concomitant]
     Active Substance: ACETAMINOPHEN
     Route: 065
     Dates: start: 20201215, end: 20201215
  1617. ACETAMINOPHEN [Concomitant]
     Active Substance: ACETAMINOPHEN
     Route: 065
     Dates: start: 20201215, end: 20201215
  1618. ACETAMINOPHEN [Concomitant]
     Active Substance: ACETAMINOPHEN
     Route: 065
     Dates: start: 20201123, end: 20201123
  1619. ACETAMINOPHEN [Concomitant]
     Active Substance: ACETAMINOPHEN
     Route: 065
     Dates: start: 20210323, end: 20210323
  1620. ACETAMINOPHEN [Concomitant]
     Active Substance: ACETAMINOPHEN
     Route: 065
     Dates: start: 20201123, end: 20201123
  1621. ACETAMINOPHEN [Concomitant]
     Active Substance: ACETAMINOPHEN
     Route: 065
     Dates: start: 20210119, end: 20210119
  1622. ACETAMINOPHEN [Concomitant]
     Active Substance: ACETAMINOPHEN
     Route: 065
     Dates: start: 20201123, end: 20201123
  1623. ACETAMINOPHEN [Concomitant]
     Active Substance: ACETAMINOPHEN
     Route: 048
     Dates: start: 20201124, end: 20201124
  1624. ACETAMINOPHEN [Concomitant]
     Active Substance: ACETAMINOPHEN
     Route: 065
     Dates: start: 20210209, end: 20210209
  1625. ACETAMINOPHEN [Concomitant]
     Active Substance: ACETAMINOPHEN
     Route: 065
     Dates: start: 20210126, end: 20210126
  1626. ACETAMINOPHEN [Concomitant]
     Active Substance: ACETAMINOPHEN
     Route: 065
     Dates: start: 20210323, end: 20210323
  1627. ACETAMINOPHEN [Concomitant]
     Active Substance: ACETAMINOPHEN
     Route: 065
     Dates: start: 20210309, end: 20210309
  1628. ACETAMINOPHEN [Concomitant]
     Active Substance: ACETAMINOPHEN
     Route: 048
     Dates: start: 20210119, end: 20210119
  1629. ACETAMINOPHEN [Concomitant]
     Active Substance: ACETAMINOPHEN
     Route: 065
     Dates: start: 20201124, end: 20201124
  1630. ACETAMINOPHEN [Concomitant]
     Active Substance: ACETAMINOPHEN
     Route: 048
     Dates: start: 20210216, end: 20210216
  1631. ACETAMINOPHEN [Concomitant]
     Active Substance: ACETAMINOPHEN
     Route: 048
     Dates: start: 20210309, end: 20210309
  1632. ACETAMINOPHEN [Concomitant]
     Active Substance: ACETAMINOPHEN
     Route: 048
     Dates: start: 20210302, end: 20210302
  1633. ACETAMINOPHEN [Concomitant]
     Active Substance: ACETAMINOPHEN
     Route: 065
     Dates: start: 20210309, end: 20210309
  1634. ACETAMINOPHEN [Concomitant]
     Active Substance: ACETAMINOPHEN
     Route: 065
     Dates: start: 20210323, end: 20210323
  1635. ACETAMINOPHEN [Concomitant]
     Active Substance: ACETAMINOPHEN
     Indication: Prophylaxis
     Route: 065
     Dates: start: 20210309, end: 20210309
  1636. ACETAMINOPHEN [Concomitant]
     Active Substance: ACETAMINOPHEN
     Route: 065
     Dates: start: 20210216, end: 20210216
  1637. ACETAMINOPHEN [Concomitant]
     Active Substance: ACETAMINOPHEN
     Route: 065
     Dates: start: 20201123
  1638. ACETAMINOPHEN [Concomitant]
     Active Substance: ACETAMINOPHEN
     Route: 048
     Dates: start: 20210126, end: 20210126
  1639. ACETAMINOPHEN [Concomitant]
     Active Substance: ACETAMINOPHEN
     Route: 065
     Dates: start: 20210209, end: 20210209
  1640. ACETAMINOPHEN [Concomitant]
     Active Substance: ACETAMINOPHEN
     Route: 065
     Dates: start: 20210126, end: 20210126
  1641. ACETAMINOPHEN [Concomitant]
     Active Substance: ACETAMINOPHEN
     Route: 065
     Dates: start: 20210309, end: 20210309
  1642. ACETAMINOPHEN [Concomitant]
     Active Substance: ACETAMINOPHEN
     Route: 065
     Dates: start: 20210126, end: 20210126
  1643. ACETAMINOPHEN [Concomitant]
     Active Substance: ACETAMINOPHEN
     Route: 065
     Dates: start: 20210309, end: 20210309
  1644. ACETAMINOPHEN [Concomitant]
     Active Substance: ACETAMINOPHEN
     Route: 065
     Dates: start: 20210126, end: 20210126
  1645. ACETAMINOPHEN [Concomitant]
     Active Substance: ACETAMINOPHEN
     Route: 048
     Dates: start: 20210123, end: 20210123
  1646. ACETAMINOPHEN [Concomitant]
     Active Substance: ACETAMINOPHEN
     Route: 048
     Dates: start: 20210119, end: 20210119
  1647. ACETAMINOPHEN [Concomitant]
     Active Substance: ACETAMINOPHEN
     Route: 048
     Dates: start: 20210119, end: 20210119
  1648. ACETAMINOPHEN [Concomitant]
     Active Substance: ACETAMINOPHEN
     Route: 048
     Dates: start: 20201215, end: 20201215
  1649. ACETAMINOPHEN [Concomitant]
     Active Substance: ACETAMINOPHEN
     Route: 048
     Dates: start: 20210323, end: 20210323
  1650. ACETAMINOPHEN [Concomitant]
     Active Substance: ACETAMINOPHEN
     Route: 048
     Dates: start: 20210323, end: 20210323
  1651. ACETAMINOPHEN [Concomitant]
     Active Substance: ACETAMINOPHEN
     Route: 048
     Dates: start: 20210303, end: 20210303
  1652. ACETAMINOPHEN [Concomitant]
     Active Substance: ACETAMINOPHEN
     Route: 048
     Dates: start: 20201215, end: 20201215
  1653. ACETAMINOPHEN [Concomitant]
     Active Substance: ACETAMINOPHEN
     Route: 048
     Dates: start: 20210209, end: 20210209
  1654. ACETAMINOPHEN [Concomitant]
     Active Substance: ACETAMINOPHEN
     Route: 048
     Dates: start: 20201124, end: 20201124
  1655. ACETAMINOPHEN [Concomitant]
     Active Substance: ACETAMINOPHEN
     Route: 048
     Dates: start: 20210216, end: 20210216
  1656. ACETAMINOPHEN [Concomitant]
     Active Substance: ACETAMINOPHEN
     Route: 048
     Dates: start: 20210126, end: 20210126
  1657. ACETAMINOPHEN [Concomitant]
     Active Substance: ACETAMINOPHEN
     Route: 065
     Dates: start: 20210309, end: 20210309
  1658. ACETAMINOPHEN [Concomitant]
     Active Substance: ACETAMINOPHEN
     Route: 065
     Dates: start: 20201124, end: 20201124
  1659. ACETAMINOPHEN [Concomitant]
     Active Substance: ACETAMINOPHEN
     Route: 065
     Dates: start: 20210216, end: 20210216
  1660. ACETAMINOPHEN [Concomitant]
     Active Substance: ACETAMINOPHEN
     Route: 065
     Dates: start: 20210209, end: 20210209
  1661. ACETAMINOPHEN [Concomitant]
     Active Substance: ACETAMINOPHEN
     Route: 065
     Dates: start: 20210323, end: 20210323
  1662. ACETAMINOPHEN [Concomitant]
     Active Substance: ACETAMINOPHEN
     Route: 065
     Dates: start: 20210309, end: 20210309
  1663. ACETAMINOPHEN [Concomitant]
     Active Substance: ACETAMINOPHEN
     Route: 065
     Dates: start: 20210323, end: 20210323
  1664. SENNA [Concomitant]
     Active Substance: SENNOSIDES
     Indication: Constipation
     Route: 065
     Dates: start: 20201124
  1665. SENNA [Concomitant]
     Active Substance: SENNOSIDES
     Dates: start: 20201124
  1666. SENNA [Concomitant]
     Active Substance: SENNOSIDES
     Dates: start: 20201124
  1667. SENNA [Concomitant]
     Active Substance: SENNOSIDES
     Dates: start: 20201124
  1668. SENNA [Concomitant]
     Active Substance: SENNOSIDES
     Dates: start: 20201124
  1669. SENNA [Concomitant]
     Active Substance: SENNOSIDES
     Dates: start: 20201124
  1670. SENNA [Concomitant]
     Active Substance: SENNOSIDES
     Dates: start: 20201124
  1671. SENNA [Concomitant]
     Active Substance: SENNOSIDES
     Dates: start: 20201124
  1672. SENNA [Concomitant]
     Active Substance: SENNOSIDES
     Dates: start: 20201124
  1673. SENNA [Concomitant]
     Active Substance: SENNOSIDES
     Dates: start: 20201124
  1674. SENNA [Concomitant]
     Active Substance: SENNOSIDES
     Dates: start: 20201124
  1675. SENNA [Concomitant]
     Active Substance: SENNOSIDES
     Dates: start: 20201124
  1676. SENNA [Concomitant]
     Active Substance: SENNOSIDES
     Dates: start: 20201124
  1677. SENNA [Concomitant]
     Active Substance: SENNOSIDES
     Indication: Constipation
     Route: 050
     Dates: start: 20201124
  1678. SENNA [Concomitant]
     Active Substance: SENNOSIDES
     Dates: start: 20201124
  1679. SENNA [Concomitant]
     Active Substance: SENNOSIDES
     Dates: start: 20201124
  1680. SENNA [Concomitant]
     Active Substance: SENNOSIDES
     Dates: start: 20201124
  1681. SENNA [Concomitant]
     Active Substance: SENNOSIDES
     Dates: start: 20201124
  1682. SENOKOT [Concomitant]
     Active Substance: SENNOSIDES
     Indication: Constipation
     Route: 065
  1683. SENOKOT [Concomitant]
     Active Substance: SENNOSIDES
  1684. SENOKOT [Concomitant]
     Active Substance: SENNOSIDES
  1685. SENOKOT [Concomitant]
     Active Substance: SENNOSIDES
  1686. SENOKOT [Concomitant]
     Active Substance: SENNOSIDES
  1687. SENOKOT [Concomitant]
     Active Substance: SENNOSIDES
  1688. SENOKOT [Concomitant]
     Active Substance: SENNOSIDES
  1689. SENOKOT [Concomitant]
     Active Substance: SENNOSIDES
     Dates: start: 20201124
  1690. SENOKOT [Concomitant]
     Active Substance: SENNOSIDES
     Dates: start: 20201124
  1691. SENOKOT [Concomitant]
     Active Substance: SENNOSIDES
  1692. SENOKOT [Concomitant]
     Active Substance: SENNOSIDES
  1693. SENOKOT [Concomitant]
     Active Substance: SENNOSIDES
  1694. SENOKOT [Concomitant]
     Active Substance: SENNOSIDES
  1695. SENOKOT [Concomitant]
     Active Substance: SENNOSIDES
  1696. SENOKOT [Concomitant]
     Active Substance: SENNOSIDES
  1697. SENOKOT [Concomitant]
     Active Substance: SENNOSIDES
  1698. SENOKOT [Concomitant]
     Active Substance: SENNOSIDES
  1699. SENOKOT [Concomitant]
     Active Substance: SENNOSIDES
  1700. SENOKOT [Concomitant]
     Active Substance: SENNOSIDES
  1701. SENOKOT [Concomitant]
     Active Substance: SENNOSIDES
  1702. SENOKOT [Concomitant]
     Active Substance: SENNOSIDES
  1703. SENOKOT [Concomitant]
     Active Substance: SENNOSIDES
  1704. SENOKOT [Concomitant]
     Active Substance: SENNOSIDES
  1705. SENOKOT [Concomitant]
     Active Substance: SENNOSIDES
  1706. SENOKOT [Concomitant]
     Active Substance: SENNOSIDES
  1707. SENOKOT [Concomitant]
     Active Substance: SENNOSIDES
  1708. SENOKOT [Concomitant]
     Active Substance: SENNOSIDES
  1709. SENOKOT [Concomitant]
     Active Substance: SENNOSIDES
  1710. SENOKOT [Concomitant]
     Active Substance: SENNOSIDES
     Dates: start: 20201124
  1711. SENOKOT [Concomitant]
     Active Substance: SENNOSIDES
     Dates: start: 20201124
  1712. SENOKOT [Concomitant]
     Active Substance: SENNOSIDES
     Dates: start: 20201124
  1713. SENOKOT [Concomitant]
     Active Substance: SENNOSIDES
     Dates: start: 20201124
  1714. SENOKOT [Concomitant]
     Active Substance: SENNOSIDES
     Dates: start: 20201124
  1715. SENOKOT [Concomitant]
     Active Substance: SENNOSIDES
     Dates: start: 20201124
  1716. SENOKOT [Concomitant]
     Active Substance: SENNOSIDES
     Dates: start: 20201124
  1717. SENOKOT [Concomitant]
     Active Substance: SENNOSIDES
     Dates: start: 20201124
  1718. SENOKOT [Concomitant]
     Active Substance: SENNOSIDES
     Dates: start: 20201124
  1719. SENOKOT [Concomitant]
     Active Substance: SENNOSIDES
     Dates: start: 20201124
  1720. SENOKOT [Concomitant]
     Active Substance: SENNOSIDES
     Dates: start: 20201124
  1721. SENOKOT [Concomitant]
     Active Substance: SENNOSIDES
     Dates: start: 20201124
  1722. SENOKOT [Concomitant]
     Active Substance: SENNOSIDES
     Dates: start: 20201124
  1723. SENOKOT [Concomitant]
     Active Substance: SENNOSIDES
     Dates: start: 20201124
  1724. SENOKOT [Concomitant]
     Active Substance: SENNOSIDES
     Dates: start: 20201124
  1725. SENOKOT [Concomitant]
     Active Substance: SENNOSIDES
     Dates: start: 20201124
  1726. SENOKOT [Concomitant]
     Active Substance: SENNOSIDES
     Dates: start: 20201124
  1727. SENOKOT [Concomitant]
     Active Substance: SENNOSIDES
     Dates: start: 20201124
  1728. SENOKOT [Concomitant]
     Active Substance: SENNOSIDES
     Dates: start: 20201124
  1729. SENOKOT [Concomitant]
     Active Substance: SENNOSIDES
     Dates: start: 20201124
  1730. SENOKOT [Concomitant]
     Active Substance: SENNOSIDES
     Dates: start: 20201124
  1731. SENOKOT [Concomitant]
     Active Substance: SENNOSIDES
     Dates: start: 20201124
  1732. SENOKOT [Concomitant]
     Active Substance: SENNOSIDES
     Indication: Constipation
  1733. SENOKOT [Concomitant]
     Active Substance: SENNOSIDES
  1734. SENOKOT [Concomitant]
     Active Substance: SENNOSIDES
  1735. SENOKOT [Concomitant]
     Active Substance: SENNOSIDES
     Dates: start: 20201124
  1736. SENOKOT [Concomitant]
     Active Substance: SENNOSIDES
     Dates: start: 20201124
  1737. SENOKOT [Concomitant]
     Active Substance: SENNOSIDES
     Dates: start: 20201124
  1738. SENOKOT [Concomitant]
     Active Substance: SENNOSIDES
     Dates: start: 20201124
  1739. SENOKOT [Concomitant]
     Active Substance: SENNOSIDES
     Dates: start: 20201124
  1740. SENOKOT [Concomitant]
     Active Substance: SENNOSIDES
     Dates: start: 20201124
  1741. SENOKOT [Concomitant]
     Active Substance: SENNOSIDES
     Dates: start: 20201124
  1742. SENOKOT [Concomitant]
     Active Substance: SENNOSIDES
     Dates: start: 20201124
  1743. SENOKOT [Concomitant]
     Active Substance: SENNOSIDES
     Dates: start: 20201124
  1744. SENOKOT [Concomitant]
     Active Substance: SENNOSIDES
     Dates: start: 20201124
  1745. SENOKOT [Concomitant]
     Active Substance: SENNOSIDES
     Dates: start: 20201124
  1746. SENOKOT [Concomitant]
     Active Substance: SENNOSIDES
     Indication: Constipation
     Route: 065
  1747. SENOKOT [Concomitant]
     Active Substance: SENNOSIDES
     Route: 065
     Dates: start: 20201124
  1748. SENOKOT [Concomitant]
     Active Substance: SENNOSIDES
     Route: 065
     Dates: start: 20201124
  1749. SENOKOT [Concomitant]
     Active Substance: SENNOSIDES
     Route: 065
     Dates: start: 20201124
  1750. SENOKOT [Concomitant]
     Active Substance: SENNOSIDES
     Route: 065
  1751. SENOKOT [Concomitant]
     Active Substance: SENNOSIDES
     Route: 065
     Dates: start: 20201124
  1752. SENOKOT [Concomitant]
     Active Substance: SENNOSIDES
     Route: 065
     Dates: start: 20201124
  1753. SENOKOT [Concomitant]
     Active Substance: SENNOSIDES
     Route: 065
     Dates: start: 20201124
  1754. SENOKOT [Concomitant]
     Active Substance: SENNOSIDES
     Route: 065
     Dates: start: 20201124
  1755. SENOKOT [Concomitant]
     Active Substance: SENNOSIDES
     Route: 065
     Dates: start: 20201124
  1756. SENOKOT [Concomitant]
     Active Substance: SENNOSIDES
     Route: 065
     Dates: start: 20201124
  1757. SENOKOT [Concomitant]
     Active Substance: SENNOSIDES
     Route: 065
  1758. SENOKOT [Concomitant]
     Active Substance: SENNOSIDES
     Route: 065
     Dates: start: 20201124
  1759. SENOKOT [Concomitant]
     Active Substance: SENNOSIDES
     Route: 065
     Dates: start: 20201124
  1760. SENOKOT [Concomitant]
     Active Substance: SENNOSIDES
     Route: 065
     Dates: start: 20201124
  1761. SENOKOT [Concomitant]
     Active Substance: SENNOSIDES
     Route: 065
  1762. SENOKOT [Concomitant]
     Active Substance: SENNOSIDES
     Route: 065
  1763. SENOKOT [Concomitant]
     Active Substance: SENNOSIDES
     Route: 065
     Dates: start: 20201124
  1764. SENOKOT [Concomitant]
     Active Substance: SENNOSIDES
     Route: 065
  1765. SENOKOT [Concomitant]
     Active Substance: SENNOSIDES
     Route: 065
  1766. SENOKOT [Concomitant]
     Active Substance: SENNOSIDES
     Route: 065
     Dates: start: 20201124
  1767. SENOKOT [Concomitant]
     Active Substance: SENNOSIDES
     Route: 065
  1768. SENOKOT [Concomitant]
     Active Substance: SENNOSIDES
     Route: 065
  1769. SENOKOT [Concomitant]
     Active Substance: SENNOSIDES
     Route: 065
     Dates: start: 20201124
  1770. SENOKOT [Concomitant]
     Active Substance: SENNOSIDES
     Route: 065
     Dates: start: 20201124
  1771. SENOKOT [Concomitant]
     Active Substance: SENNOSIDES
     Route: 065
     Dates: start: 20201124
  1772. SENOKOT [Concomitant]
     Active Substance: SENNOSIDES
     Route: 065
     Dates: start: 20201124
  1773. SARS-COV-2 VACCINE [Concomitant]
     Indication: COVID-19 immunisation
     Route: 065
  1774. SARS-COV-2 VACCINE [Concomitant]
     Route: 065
     Dates: start: 20210428, end: 20210428
  1775. SARS-COV-2 VACCINE [Concomitant]
     Route: 065
  1776. SARS-COV-2 VACCINE [Concomitant]
     Indication: Product used for unknown indication
  1777. COVID-19 VACCINE [Concomitant]
     Indication: Product used for unknown indication
     Route: 065
  1778. COVID-19 VACCINE [Concomitant]
  1779. COVID-19 VACCINE [Concomitant]
  1780. SENNA LEAF [Concomitant]
     Active Substance: SENNA LEAF
     Indication: Constipation
     Dates: start: 20201124
  1781. SENNA LEAF [Concomitant]
     Active Substance: SENNA LEAF
     Route: 065
     Dates: start: 20201124
  1782. SENNA LEAF [Concomitant]
     Active Substance: SENNA LEAF
     Route: 065
     Dates: start: 20201124
  1783. SENNA LEAF [Concomitant]
     Active Substance: SENNA LEAF
     Route: 065
     Dates: start: 20201124
  1784. SENNA LEAF [Concomitant]
     Active Substance: SENNA LEAF
     Route: 065
     Dates: start: 20201124
  1785. SENNA LEAF [Concomitant]
     Active Substance: SENNA LEAF
     Route: 065
     Dates: start: 20201124
  1786. SENNA LEAF [Concomitant]
     Active Substance: SENNA LEAF
     Route: 065
     Dates: start: 20201124
  1787. SENNA LEAF [Concomitant]
     Active Substance: SENNA LEAF
     Route: 065
     Dates: start: 20201124
  1788. SENNA LEAF [Concomitant]
     Active Substance: SENNA LEAF
     Route: 065
     Dates: start: 20201124
  1789. SENNA LEAF [Concomitant]
     Active Substance: SENNA LEAF
     Route: 065
     Dates: start: 20201124
  1790. SENNA LEAF [Concomitant]
     Active Substance: SENNA LEAF
     Route: 065
     Dates: start: 20201124
  1791. SENNA LEAF [Concomitant]
     Active Substance: SENNA LEAF
     Route: 065
     Dates: start: 20201124
  1792. SENNA LEAF [Concomitant]
     Active Substance: SENNA LEAF
     Route: 065
     Dates: start: 20201124
  1793. SENNA LEAF [Concomitant]
     Active Substance: SENNA LEAF
     Indication: Constipation
     Route: 065
     Dates: start: 20201124
  1794. SENNA LEAF [Concomitant]
     Active Substance: SENNA LEAF
     Route: 065
     Dates: start: 20201124
  1795. SENNA LEAF [Concomitant]
     Active Substance: SENNA LEAF
     Route: 065
     Dates: start: 20201124
  1796. SENNA LEAF [Concomitant]
     Active Substance: SENNA LEAF
     Route: 065
     Dates: start: 20201124
  1797. SENNA LEAF [Concomitant]
     Active Substance: SENNA LEAF
     Route: 065
     Dates: start: 20201124
  1798. SENNA LEAF [Concomitant]
     Active Substance: SENNA LEAF
     Route: 065
     Dates: start: 20201124
  1799. SENNA LEAF [Concomitant]
     Active Substance: SENNA LEAF
     Route: 065
     Dates: start: 20201124
  1800. SENNA LEAF [Concomitant]
     Active Substance: SENNA LEAF
     Route: 065
     Dates: start: 20201124
  1801. SENNA LEAF [Concomitant]
     Active Substance: SENNA LEAF
     Route: 065
     Dates: start: 20201124
  1802. SENNA LEAF [Concomitant]
     Active Substance: SENNA LEAF
     Route: 065
     Dates: start: 20201124
  1803. SENNA LEAF [Concomitant]
     Active Substance: SENNA LEAF
     Route: 065
     Dates: start: 20201124
  1804. SENNA LEAF [Concomitant]
     Active Substance: SENNA LEAF
     Route: 065
     Dates: start: 20201124
  1805. SENNA LEAF [Concomitant]
     Active Substance: SENNA LEAF
     Route: 065
     Dates: start: 20201124
  1806. SENNA LEAF [Concomitant]
     Active Substance: SENNA LEAF
     Dates: start: 20201124
  1807. SENNA LEAF [Concomitant]
     Active Substance: SENNA LEAF
     Dates: start: 20201124
  1808. SENNA LEAF [Concomitant]
     Active Substance: SENNA LEAF
     Dates: start: 20201124
  1809. SENNA LEAF [Concomitant]
     Active Substance: SENNA LEAF
     Dates: start: 20201124
  1810. SENNA LEAF [Concomitant]
     Active Substance: SENNA LEAF
     Dates: start: 20201124
  1811. SENNA LEAF [Concomitant]
     Active Substance: SENNA LEAF
     Dates: start: 20201124
  1812. SENNA LEAF [Concomitant]
     Active Substance: SENNA LEAF
     Dates: start: 20201124
  1813. SENNA LEAF [Concomitant]
     Active Substance: SENNA LEAF
     Dates: start: 20201124
  1814. SENNA LEAF [Concomitant]
     Active Substance: SENNA LEAF
     Dates: start: 20201124
  1815. SENNA LEAF [Concomitant]
     Active Substance: SENNA LEAF
     Dates: start: 20201124
  1816. SENNA LEAF [Concomitant]
     Active Substance: SENNA LEAF
     Dates: start: 20201124
  1817. SENNA LEAF [Concomitant]
     Active Substance: SENNA LEAF
     Dates: start: 20201124
  1818. SENNA LEAF [Concomitant]
     Active Substance: SENNA LEAF
     Dates: start: 20201124
  1819. SENNA LEAF [Concomitant]
     Active Substance: SENNA LEAF
     Dates: start: 20201124
  1820. SENNA LEAF [Concomitant]
     Active Substance: SENNA LEAF
     Dates: start: 20201124
  1821. SENNA LEAF [Concomitant]
     Active Substance: SENNA LEAF
     Dates: start: 20201124
  1822. SENNA LEAF [Concomitant]
     Active Substance: SENNA LEAF
     Dates: start: 20201124
  1823. SENNA LEAF [Concomitant]
     Active Substance: SENNA LEAF
     Dates: start: 20201124
  1824. SENNA LEAF [Concomitant]
     Active Substance: SENNA LEAF
     Dates: start: 20201124
  1825. SENNA LEAF [Concomitant]
     Active Substance: SENNA LEAF
     Dates: start: 20201124
  1826. SENNA LEAF [Concomitant]
     Active Substance: SENNA LEAF
     Dates: start: 20201124
  1827. SENNA LEAF [Concomitant]
     Active Substance: SENNA LEAF
     Dates: start: 20201124
  1828. SENNA LEAF [Concomitant]
     Active Substance: SENNA LEAF
     Dates: start: 20201124
  1829. SENNA LEAF [Concomitant]
     Active Substance: SENNA LEAF
     Dates: start: 20201124
  1830. SENNA LEAF [Concomitant]
     Active Substance: SENNA LEAF
     Dates: start: 20201124
  1831. SENNA LEAF [Concomitant]
     Active Substance: SENNA LEAF
     Dates: start: 20201124
  1832. SENNA LEAF [Concomitant]
     Active Substance: SENNA LEAF
     Dates: start: 20201124
  1833. SENNA LEAF [Concomitant]
     Active Substance: SENNA LEAF
     Dates: start: 20201124
  1834. SENNA LEAF [Concomitant]
     Active Substance: SENNA LEAF
     Dates: start: 20201124
  1835. SENNA LEAF [Concomitant]
     Active Substance: SENNA LEAF
     Dates: start: 20201124
  1836. SENNA LEAF [Concomitant]
     Active Substance: SENNA LEAF
     Dates: start: 20201124
  1837. SENNA LEAF [Concomitant]
     Active Substance: SENNA LEAF
     Dates: start: 20201124
  1838. SENNA LEAF [Concomitant]
     Active Substance: SENNA LEAF
     Dates: start: 20201124
  1839. SENNA LEAF [Concomitant]
     Active Substance: SENNA LEAF
     Dates: start: 20201124
  1840. SENNA LEAF [Concomitant]
     Active Substance: SENNA LEAF
     Dates: start: 20201124
  1841. SENNA LEAF [Concomitant]
     Active Substance: SENNA LEAF
     Dates: start: 20201124
  1842. SENNA LEAF [Concomitant]
     Active Substance: SENNA LEAF
     Dates: start: 20201124
  1843. SENNA LEAF [Concomitant]
     Active Substance: SENNA LEAF
     Indication: Constipation
     Dates: start: 20201124
  1844. SENNA LEAF [Concomitant]
     Active Substance: SENNA LEAF
     Dates: start: 20201124
  1845. SENNA LEAF [Concomitant]
     Active Substance: SENNA LEAF
     Dates: start: 20201124
  1846. SENNA LEAF [Concomitant]
     Active Substance: SENNA LEAF
     Dates: start: 20201124
  1847. SENNA LEAF [Concomitant]
     Active Substance: SENNA LEAF
     Dates: start: 20201124
  1848. SENNA LEAF [Concomitant]
     Active Substance: SENNA LEAF
     Dates: start: 20201124
  1849. SENNA LEAF [Concomitant]
     Active Substance: SENNA LEAF
     Dates: start: 20201124
  1850. SENNA LEAF [Concomitant]
     Active Substance: SENNA LEAF
     Dates: start: 20201124
  1851. SENNA LEAF [Concomitant]
     Active Substance: SENNA LEAF
     Dates: start: 20201124
  1852. SENNA LEAF [Concomitant]
     Active Substance: SENNA LEAF
     Dates: start: 20201124
  1853. SENNA LEAF [Concomitant]
     Active Substance: SENNA LEAF
     Dates: start: 20201124
  1854. SENNA LEAF [Concomitant]
     Active Substance: SENNA LEAF
     Dates: start: 20201124
  1855. SENNA LEAF [Concomitant]
     Active Substance: SENNA LEAF
     Dates: start: 20201124
  1856. SENNA LEAF [Concomitant]
     Active Substance: SENNA LEAF
     Dates: start: 20201124
  1857. SENNA LEAF [Concomitant]
     Active Substance: SENNA LEAF
     Dates: start: 20201124
  1858. SENNA LEAF [Concomitant]
     Active Substance: SENNA LEAF
     Dates: start: 20201124
  1859. SENNA LEAF [Concomitant]
     Active Substance: SENNA LEAF
     Dates: start: 20201124
  1860. SENNA LEAF [Concomitant]
     Active Substance: SENNA LEAF
     Dates: start: 20201124
  1861. SENNA LEAF [Concomitant]
     Active Substance: SENNA LEAF
     Dates: start: 20201124
  1862. SENNA LEAF [Concomitant]
     Active Substance: SENNA LEAF
     Dates: start: 20201124
  1863. SENNA LEAF [Concomitant]
     Active Substance: SENNA LEAF
     Dates: start: 20201124
  1864. SENNA LEAF [Concomitant]
     Active Substance: SENNA LEAF
     Dates: start: 20201124
  1865. SENNA LEAF [Concomitant]
     Active Substance: SENNA LEAF
     Dates: start: 20201124
  1866. SENNA LEAF [Concomitant]
     Active Substance: SENNA LEAF
     Dates: start: 20201124
  1867. SENNA LEAF [Concomitant]
     Active Substance: SENNA LEAF
     Dates: start: 20201124
  1868. SENNA LEAF [Concomitant]
     Active Substance: SENNA LEAF
     Dates: start: 20201124
  1869. SENNA LEAF [Concomitant]
     Active Substance: SENNA LEAF
     Dates: start: 20201124
  1870. SENNA LEAF [Concomitant]
     Active Substance: SENNA LEAF
     Dates: start: 20201124
  1871. SENNA LEAF [Concomitant]
     Active Substance: SENNA LEAF
     Dates: start: 20201124
  1872. SENNA LEAF [Concomitant]
     Active Substance: SENNA LEAF
     Dates: start: 20201124
  1873. SENNA LEAF [Concomitant]
     Active Substance: SENNA LEAF
     Dates: start: 20201124
  1874. SENNA LEAF [Concomitant]
     Active Substance: SENNA LEAF
     Dates: start: 20201124
  1875. SENNA LEAF [Concomitant]
     Active Substance: SENNA LEAF
     Dates: start: 20201124
  1876. SENNA LEAF [Concomitant]
     Active Substance: SENNA LEAF
     Dates: start: 20201124
  1877. SENNA LEAF [Concomitant]
     Active Substance: SENNA LEAF
     Dates: start: 20201124
  1878. SENNA LEAF [Concomitant]
     Active Substance: SENNA LEAF
     Dates: start: 20201124
  1879. SENNA LEAF [Concomitant]
     Active Substance: SENNA LEAF
     Dates: start: 20201124
  1880. SENNA LEAF [Concomitant]
     Active Substance: SENNA LEAF
     Dates: start: 20201124
  1881. SENNA LEAF [Concomitant]
     Active Substance: SENNA LEAF
     Dates: start: 20201124
  1882. SENNA LEAF [Concomitant]
     Active Substance: SENNA LEAF
     Dates: start: 20201124
  1883. SENNA LEAF [Concomitant]
     Active Substance: SENNA LEAF
     Dates: start: 20201124
  1884. SENNA LEAF [Concomitant]
     Active Substance: SENNA LEAF
     Dates: start: 20201124
  1885. SENNA LEAF [Concomitant]
     Active Substance: SENNA LEAF
     Dates: start: 20201124
  1886. SENNA LEAF [Concomitant]
     Active Substance: SENNA LEAF
     Dates: start: 20201124
  1887. SENNA LEAF [Concomitant]
     Active Substance: SENNA LEAF
     Dates: start: 20201124
  1888. SENNA LEAF [Concomitant]
     Active Substance: SENNA LEAF
     Dates: start: 20201124
  1889. SENNA LEAF [Concomitant]
     Active Substance: SENNA LEAF
     Dates: start: 20201124
  1890. SENNA LEAF [Concomitant]
     Active Substance: SENNA LEAF
     Dates: start: 20201124
  1891. SENNA LEAF [Concomitant]
     Active Substance: SENNA LEAF
     Dates: start: 20201124
  1892. SENNA LEAF [Concomitant]
     Active Substance: SENNA LEAF
     Dates: start: 20201124
  1893. SENNA LEAF [Concomitant]
     Active Substance: SENNA LEAF
     Indication: Constipation
     Dates: start: 20201124
  1894. SENNA LEAF [Concomitant]
     Active Substance: SENNA LEAF
     Dates: start: 20201124
  1895. SENNA LEAF [Concomitant]
     Active Substance: SENNA LEAF
     Dates: start: 20201124
  1896. SENNA LEAF [Concomitant]
     Active Substance: SENNA LEAF
     Dates: start: 20201124
  1897. SENNA LEAF [Concomitant]
     Active Substance: SENNA LEAF
     Dates: start: 20201124
  1898. SENNA LEAF [Concomitant]
     Active Substance: SENNA LEAF
     Dates: start: 20201124
  1899. SENNA LEAF [Concomitant]
     Active Substance: SENNA LEAF
     Dates: start: 20201124
  1900. SENNA LEAF [Concomitant]
     Active Substance: SENNA LEAF
     Dates: start: 20201124
  1901. SENNA LEAF [Concomitant]
     Active Substance: SENNA LEAF
     Dates: start: 20201124
  1902. SENNA LEAF [Concomitant]
     Active Substance: SENNA LEAF
     Dates: start: 20201124
  1903. SENNA LEAF [Concomitant]
     Active Substance: SENNA LEAF
     Dates: start: 20201124
  1904. SENNA LEAF [Concomitant]
     Active Substance: SENNA LEAF
     Dates: start: 20201124
  1905. SENNA LEAF [Concomitant]
     Active Substance: SENNA LEAF
     Dates: start: 20201124
  1906. SENNA LEAF [Concomitant]
     Active Substance: SENNA LEAF
     Dates: start: 20201124
  1907. SENNA LEAF [Concomitant]
     Active Substance: SENNA LEAF
     Dates: start: 20201124
  1908. SENNA LEAF [Concomitant]
     Active Substance: SENNA LEAF
     Dates: start: 20201124
  1909. SENNA LEAF [Concomitant]
     Active Substance: SENNA LEAF
     Dates: start: 20201124
  1910. CALCIUM SENNOSIDES [Concomitant]
     Active Substance: SENNOSIDES
     Indication: Constipation
     Dates: start: 20201124
  1911. CALCIUM SENNOSIDES [Concomitant]
     Active Substance: SENNOSIDES
     Dates: start: 20201124
  1912. CALCIUM SENNOSIDES [Concomitant]
     Active Substance: SENNOSIDES
     Dates: start: 20201124
  1913. CALCIUM SENNOSIDES [Concomitant]
     Active Substance: SENNOSIDES
     Dates: start: 20201124
  1914. CALCIUM SENNOSIDES [Concomitant]
     Active Substance: SENNOSIDES
     Dates: start: 20201124
  1915. CALCIUM SENNOSIDES [Concomitant]
     Active Substance: SENNOSIDES
     Dates: start: 20201124
  1916. CALCIUM SENNOSIDES [Concomitant]
     Active Substance: SENNOSIDES
     Dates: start: 20201124
  1917. CALCIUM SENNOSIDES [Concomitant]
     Active Substance: SENNOSIDES
     Dates: start: 20201124
  1918. CALCIUM SENNOSIDES [Concomitant]
     Active Substance: SENNOSIDES
     Dates: start: 20201124
  1919. CALCIUM SENNOSIDES [Concomitant]
     Active Substance: SENNOSIDES
     Dates: start: 20201124
  1920. CALCIUM SENNOSIDES [Concomitant]
     Active Substance: SENNOSIDES
     Dates: start: 20201124
  1921. CALCIUM SENNOSIDES [Concomitant]
     Active Substance: SENNOSIDES
     Dates: start: 20201124
  1922. CALCIUM SENNOSIDES [Concomitant]
     Active Substance: SENNOSIDES
     Dates: start: 20201124
  1923. DEXAMETHASONE SODIUM PHOSPHATE [Concomitant]
     Active Substance: DEXAMETHASONE SODIUM PHOSPHATE
     Indication: Product used for unknown indication
     Route: 042
     Dates: start: 20210209, end: 20210209
  1924. DEXAMETHASONE SODIUM PHOSPHATE [Concomitant]
     Active Substance: DEXAMETHASONE SODIUM PHOSPHATE
     Route: 042
     Dates: start: 20210302, end: 20210302
  1925. DEXAMETHASONE SODIUM PHOSPHATE [Concomitant]
     Active Substance: DEXAMETHASONE SODIUM PHOSPHATE
     Route: 042
     Dates: start: 20210119, end: 20210119
  1926. DEXAMETHASONE SODIUM PHOSPHATE [Concomitant]
     Active Substance: DEXAMETHASONE SODIUM PHOSPHATE
     Route: 042
     Dates: start: 20210323, end: 20210323
  1927. DEXAMETHASONE SODIUM PHOSPHATE [Concomitant]
     Active Substance: DEXAMETHASONE SODIUM PHOSPHATE
     Dates: start: 20210323, end: 20210323
  1928. DEXAMETHASONE SODIUM PHOSPHATE [Concomitant]
     Active Substance: DEXAMETHASONE SODIUM PHOSPHATE
     Dates: start: 20210323, end: 20210323
  1929. DEXAMETHASONE SODIUM PHOSPHATE [Concomitant]
     Active Substance: DEXAMETHASONE SODIUM PHOSPHATE
     Dates: start: 20210119, end: 20210119
  1930. DEXAMETHASONE SODIUM PHOSPHATE [Concomitant]
     Active Substance: DEXAMETHASONE SODIUM PHOSPHATE
     Dates: start: 20210209, end: 20210209
  1931. DEXAMETHASONE SODIUM PHOSPHATE [Concomitant]
     Active Substance: DEXAMETHASONE SODIUM PHOSPHATE
     Dates: start: 20210302, end: 20210302
  1932. DEXAMETHASONE SODIUM PHOSPHATE [Concomitant]
     Active Substance: DEXAMETHASONE SODIUM PHOSPHATE
     Dates: start: 20210323, end: 20210323
  1933. DEXAMETHASONE SODIUM PHOSPHATE [Concomitant]
     Active Substance: DEXAMETHASONE SODIUM PHOSPHATE
     Dates: start: 20210119, end: 20210119
  1934. DEXAMETHASONE SODIUM PHOSPHATE [Concomitant]
     Active Substance: DEXAMETHASONE SODIUM PHOSPHATE
     Dates: start: 20210119, end: 20210119
  1935. DEXAMETHASONE SODIUM PHOSPHATE [Concomitant]
     Active Substance: DEXAMETHASONE SODIUM PHOSPHATE
     Dates: start: 20210209, end: 20210209
  1936. DEXAMETHASONE SODIUM PHOSPHATE [Concomitant]
     Active Substance: DEXAMETHASONE SODIUM PHOSPHATE
     Dates: start: 20210209, end: 20210209
  1937. DEXAMETHASONE SODIUM PHOSPHATE [Concomitant]
     Active Substance: DEXAMETHASONE SODIUM PHOSPHATE
     Dates: start: 20210302, end: 20210302
  1938. DEXAMETHASONE SODIUM PHOSPHATE [Concomitant]
     Active Substance: DEXAMETHASONE SODIUM PHOSPHATE
     Dates: start: 20210302, end: 20210302
  1939. DEXAMETHASONE SODIUM PHOSPHATE [Concomitant]
     Active Substance: DEXAMETHASONE SODIUM PHOSPHATE
     Dates: start: 20210323, end: 20210323
  1940. DEXAMETHASONE SODIUM PHOSPHATE [Concomitant]
     Active Substance: DEXAMETHASONE SODIUM PHOSPHATE
     Dates: start: 20210323, end: 20210323
  1941. DEXAMETHASONE SODIUM PHOSPHATE [Concomitant]
     Active Substance: DEXAMETHASONE SODIUM PHOSPHATE
     Dates: start: 20210323, end: 20210323
  1942. DEXAMETHASONE SODIUM PHOSPHATE [Concomitant]
     Active Substance: DEXAMETHASONE SODIUM PHOSPHATE
     Dates: start: 20210209, end: 20210209
  1943. DEXAMETHASONE SODIUM PHOSPHATE [Concomitant]
     Active Substance: DEXAMETHASONE SODIUM PHOSPHATE
     Dates: start: 20210119, end: 20210119
  1944. DEXAMETHASONE SODIUM PHOSPHATE [Concomitant]
     Active Substance: DEXAMETHASONE SODIUM PHOSPHATE
     Dates: start: 20210302, end: 20210302
  1945. DEXAMETHASONE SODIUM PHOSPHATE [Concomitant]
     Active Substance: DEXAMETHASONE SODIUM PHOSPHATE
     Dates: start: 20210119, end: 20210119
  1946. DEXAMETHASONE SODIUM PHOSPHATE [Concomitant]
     Active Substance: DEXAMETHASONE SODIUM PHOSPHATE
     Dates: start: 20210119, end: 20210119
  1947. DEXAMETHASONE SODIUM PHOSPHATE [Concomitant]
     Active Substance: DEXAMETHASONE SODIUM PHOSPHATE
     Dates: start: 20210323, end: 20210323
  1948. DEXAMETHASONE SODIUM PHOSPHATE [Concomitant]
     Active Substance: DEXAMETHASONE SODIUM PHOSPHATE
     Dates: start: 20210323, end: 20210323
  1949. DEXAMETHASONE SODIUM PHOSPHATE [Concomitant]
     Active Substance: DEXAMETHASONE SODIUM PHOSPHATE
     Dates: start: 20210209, end: 20210209
  1950. DEXAMETHASONE SODIUM PHOSPHATE [Concomitant]
     Active Substance: DEXAMETHASONE SODIUM PHOSPHATE
     Dates: start: 20210209, end: 20210209
  1951. DEXAMETHASONE SODIUM PHOSPHATE [Concomitant]
     Active Substance: DEXAMETHASONE SODIUM PHOSPHATE
     Dates: start: 20210302, end: 20210302
  1952. DEXAMETHASONE SODIUM PHOSPHATE [Concomitant]
     Active Substance: DEXAMETHASONE SODIUM PHOSPHATE
     Dates: start: 20210302, end: 20210302
  1953. DEXAMETHASONE SODIUM PHOSPHATE [Concomitant]
     Active Substance: DEXAMETHASONE SODIUM PHOSPHATE
     Dates: start: 20210119, end: 20210119
  1954. DEXAMETHASONE SODIUM PHOSPHATE [Concomitant]
     Active Substance: DEXAMETHASONE SODIUM PHOSPHATE
     Dates: start: 20210119, end: 20210119
  1955. DEXAMETHASONE SODIUM PHOSPHATE [Concomitant]
     Active Substance: DEXAMETHASONE SODIUM PHOSPHATE
     Dates: start: 20210323, end: 20210323
  1956. DEXAMETHASONE SODIUM PHOSPHATE [Concomitant]
     Active Substance: DEXAMETHASONE SODIUM PHOSPHATE
     Dates: start: 20210323, end: 20210323
  1957. DEXAMETHASONE SODIUM PHOSPHATE [Concomitant]
     Active Substance: DEXAMETHASONE SODIUM PHOSPHATE
     Dates: start: 20210302, end: 20210302
  1958. DEXAMETHASONE SODIUM PHOSPHATE [Concomitant]
     Active Substance: DEXAMETHASONE SODIUM PHOSPHATE
     Dates: start: 20210302, end: 20210302
  1959. DEXAMETHASONE SODIUM PHOSPHATE [Concomitant]
     Active Substance: DEXAMETHASONE SODIUM PHOSPHATE
     Dates: start: 20210209, end: 20210209
  1960. DEXAMETHASONE SODIUM PHOSPHATE [Concomitant]
     Active Substance: DEXAMETHASONE SODIUM PHOSPHATE
     Dates: start: 20210209, end: 20210209
  1961. DEXAMETHASONE SODIUM PHOSPHATE [Concomitant]
     Active Substance: DEXAMETHASONE SODIUM PHOSPHATE
     Dates: start: 20210119, end: 20210119
  1962. DEXAMETHASONE SODIUM PHOSPHATE [Concomitant]
     Active Substance: DEXAMETHASONE SODIUM PHOSPHATE
     Dates: start: 20210119, end: 20210119
  1963. DEXAMETHASONE SODIUM PHOSPHATE [Concomitant]
     Active Substance: DEXAMETHASONE SODIUM PHOSPHATE
     Dates: start: 20210209, end: 20210209
  1964. DEXAMETHASONE SODIUM PHOSPHATE [Concomitant]
     Active Substance: DEXAMETHASONE SODIUM PHOSPHATE
     Dates: start: 20210209, end: 20210209
  1965. DEXAMETHASONE SODIUM PHOSPHATE [Concomitant]
     Active Substance: DEXAMETHASONE SODIUM PHOSPHATE
     Dates: start: 20210323, end: 20210323
  1966. DEXAMETHASONE SODIUM PHOSPHATE [Concomitant]
     Active Substance: DEXAMETHASONE SODIUM PHOSPHATE
     Dates: start: 20210323, end: 20210323
  1967. DEXAMETHASONE SODIUM PHOSPHATE [Concomitant]
     Active Substance: DEXAMETHASONE SODIUM PHOSPHATE
     Dates: start: 20210302, end: 20210302
  1968. DEXAMETHASONE SODIUM PHOSPHATE [Concomitant]
     Active Substance: DEXAMETHASONE SODIUM PHOSPHATE
     Dates: start: 20210302, end: 20210302
  1969. DEXAMETHASONE SODIUM PHOSPHATE [Concomitant]
     Active Substance: DEXAMETHASONE SODIUM PHOSPHATE
     Dates: start: 20210119, end: 20210119
  1970. DEXAMETHASONE SODIUM PHOSPHATE [Concomitant]
     Active Substance: DEXAMETHASONE SODIUM PHOSPHATE
     Dates: start: 20210209, end: 20210209
  1971. DEXAMETHASONE SODIUM PHOSPHATE [Concomitant]
     Active Substance: DEXAMETHASONE SODIUM PHOSPHATE
     Dates: start: 20210209, end: 20210209
  1972. DEXAMETHASONE SODIUM PHOSPHATE [Concomitant]
     Active Substance: DEXAMETHASONE SODIUM PHOSPHATE
     Dates: start: 20210209, end: 20210209
  1973. DEXAMETHASONE SODIUM PHOSPHATE [Concomitant]
     Active Substance: DEXAMETHASONE SODIUM PHOSPHATE
     Indication: Product used for unknown indication
     Dates: start: 20210119, end: 20210119
  1974. DEXAMETHASONE SODIUM PHOSPHATE [Concomitant]
     Active Substance: DEXAMETHASONE SODIUM PHOSPHATE
     Route: 042
     Dates: start: 20210119, end: 20210119
  1975. DEXAMETHASONE SODIUM PHOSPHATE [Concomitant]
     Active Substance: DEXAMETHASONE SODIUM PHOSPHATE
     Route: 065
     Dates: start: 20210119, end: 20210119
  1976. DEXAMETHASONE SODIUM PHOSPHATE [Concomitant]
     Active Substance: DEXAMETHASONE SODIUM PHOSPHATE
     Route: 042
     Dates: start: 20210209, end: 20210209
  1977. DEXAMETHASONE SODIUM PHOSPHATE [Concomitant]
     Active Substance: DEXAMETHASONE SODIUM PHOSPHATE
     Route: 065
     Dates: start: 20210209, end: 20210209
  1978. DEXAMETHASONE SODIUM PHOSPHATE [Concomitant]
     Active Substance: DEXAMETHASONE SODIUM PHOSPHATE
     Dates: start: 20210119, end: 20210119
  1979. DEXAMETHASONE SODIUM PHOSPHATE [Concomitant]
     Active Substance: DEXAMETHASONE SODIUM PHOSPHATE
     Route: 042
     Dates: start: 20210323, end: 20210323
  1980. DEXAMETHASONE SODIUM PHOSPHATE [Concomitant]
     Active Substance: DEXAMETHASONE SODIUM PHOSPHATE
     Route: 065
     Dates: start: 20210323, end: 20210323
  1981. DEXAMETHASONE SODIUM PHOSPHATE [Concomitant]
     Active Substance: DEXAMETHASONE SODIUM PHOSPHATE
     Dates: start: 20210323, end: 20210323
  1982. DEXAMETHASONE SODIUM PHOSPHATE [Concomitant]
     Active Substance: DEXAMETHASONE SODIUM PHOSPHATE
     Dates: start: 20210119, end: 20210119
  1983. DEXAMETHASONE SODIUM PHOSPHATE [Concomitant]
     Active Substance: DEXAMETHASONE SODIUM PHOSPHATE
     Dates: start: 20210119, end: 20210119
  1984. DEXAMETHASONE SODIUM PHOSPHATE [Concomitant]
     Active Substance: DEXAMETHASONE SODIUM PHOSPHATE
     Dates: start: 20210323, end: 20210323
  1985. DEXAMETHASONE SODIUM PHOSPHATE [Concomitant]
     Active Substance: DEXAMETHASONE SODIUM PHOSPHATE
     Route: 042
     Dates: start: 20210302, end: 20210302
  1986. DEXAMETHASONE SODIUM PHOSPHATE [Concomitant]
     Active Substance: DEXAMETHASONE SODIUM PHOSPHATE
     Dates: start: 20210302, end: 20210302
  1987. DEXAMETHASONE SODIUM PHOSPHATE [Concomitant]
     Active Substance: DEXAMETHASONE SODIUM PHOSPHATE
     Route: 065
     Dates: start: 20210302, end: 20210302
  1988. DEXAMETHASONE SODIUM PHOSPHATE [Concomitant]
     Active Substance: DEXAMETHASONE SODIUM PHOSPHATE
     Dates: start: 20210302, end: 20210302
  1989. DEXAMETHASONE SODIUM PHOSPHATE [Concomitant]
     Active Substance: DEXAMETHASONE SODIUM PHOSPHATE
     Route: 065
     Dates: start: 20210302, end: 20210302
  1990. DEXAMETHASONE SODIUM PHOSPHATE [Concomitant]
     Active Substance: DEXAMETHASONE SODIUM PHOSPHATE
     Dates: start: 20210302, end: 20210302
  1991. DEXAMETHASONE SODIUM PHOSPHATE [Concomitant]
     Active Substance: DEXAMETHASONE SODIUM PHOSPHATE
     Dates: start: 20210209, end: 20210209
  1992. DEXAMETHASONE SODIUM PHOSPHATE [Concomitant]
     Active Substance: DEXAMETHASONE SODIUM PHOSPHATE
     Dates: start: 20210209, end: 20210209
  1993. DEXAMETHASONE SODIUM PHOSPHATE [Concomitant]
     Active Substance: DEXAMETHASONE SODIUM PHOSPHATE
     Dates: start: 20210323, end: 20210323
  1994. DEXAMETHASONE SODIUM PHOSPHATE [Concomitant]
     Active Substance: DEXAMETHASONE SODIUM PHOSPHATE
     Dates: start: 20210323, end: 20210323
  1995. DEXAMETHASONE SODIUM PHOSPHATE [Concomitant]
     Active Substance: DEXAMETHASONE SODIUM PHOSPHATE
     Dates: start: 20210302, end: 20210302
  1996. DEXAMETHASONE SODIUM PHOSPHATE [Concomitant]
     Active Substance: DEXAMETHASONE SODIUM PHOSPHATE
     Dates: start: 20210302, end: 20210302
  1997. DEXAMETHASONE SODIUM PHOSPHATE [Concomitant]
     Active Substance: DEXAMETHASONE SODIUM PHOSPHATE
     Route: 065
     Dates: start: 20210323, end: 20210323
  1998. DEXAMETHASONE SODIUM PHOSPHATE [Concomitant]
     Active Substance: DEXAMETHASONE SODIUM PHOSPHATE
     Dates: start: 20210323, end: 20210323
  1999. DEXAMETHASONE SODIUM PHOSPHATE [Concomitant]
     Active Substance: DEXAMETHASONE SODIUM PHOSPHATE
     Dates: start: 20210323, end: 20210323
  2000. DEXAMETHASONE SODIUM PHOSPHATE [Concomitant]
     Active Substance: DEXAMETHASONE SODIUM PHOSPHATE
     Dates: start: 20210323, end: 20210323
  2001. DEXAMETHASONE SODIUM PHOSPHATE [Concomitant]
     Active Substance: DEXAMETHASONE SODIUM PHOSPHATE
     Dates: start: 20210209, end: 20210209
  2002. DEXAMETHASONE SODIUM PHOSPHATE [Concomitant]
     Active Substance: DEXAMETHASONE SODIUM PHOSPHATE
     Dates: start: 20210209, end: 20210209
  2003. DEXAMETHASONE SODIUM PHOSPHATE [Concomitant]
     Active Substance: DEXAMETHASONE SODIUM PHOSPHATE
     Dates: start: 20210119, end: 20210119
  2004. DEXAMETHASONE SODIUM PHOSPHATE [Concomitant]
     Active Substance: DEXAMETHASONE SODIUM PHOSPHATE
     Dates: start: 20210119, end: 20210119
  2005. DEXAMETHASONE SODIUM PHOSPHATE [Concomitant]
     Active Substance: DEXAMETHASONE SODIUM PHOSPHATE
     Dates: start: 20210302, end: 20210302
  2006. DEXAMETHASONE SODIUM PHOSPHATE [Concomitant]
     Active Substance: DEXAMETHASONE SODIUM PHOSPHATE
     Dates: start: 20210302, end: 20210302
  2007. DEXAMETHASONE SODIUM PHOSPHATE [Concomitant]
     Active Substance: DEXAMETHASONE SODIUM PHOSPHATE
     Dates: start: 20210302, end: 20210302
  2008. DEXAMETHASONE SODIUM PHOSPHATE [Concomitant]
     Active Substance: DEXAMETHASONE SODIUM PHOSPHATE
     Dates: start: 20210302, end: 20210302
  2009. DEXAMETHASONE SODIUM PHOSPHATE [Concomitant]
     Active Substance: DEXAMETHASONE SODIUM PHOSPHATE
     Dates: start: 20210209, end: 20210209
  2010. DEXAMETHASONE SODIUM PHOSPHATE [Concomitant]
     Active Substance: DEXAMETHASONE SODIUM PHOSPHATE
     Dates: start: 20210209, end: 20210209
  2011. DEXAMETHASONE SODIUM PHOSPHATE [Concomitant]
     Active Substance: DEXAMETHASONE SODIUM PHOSPHATE
     Dates: start: 20210323, end: 20210323
  2012. DEXAMETHASONE SODIUM PHOSPHATE [Concomitant]
     Active Substance: DEXAMETHASONE SODIUM PHOSPHATE
     Dates: start: 20210323, end: 20210323
  2013. DEXAMETHASONE SODIUM PHOSPHATE [Concomitant]
     Active Substance: DEXAMETHASONE SODIUM PHOSPHATE
     Dates: start: 20210119, end: 20210119
  2014. DEXAMETHASONE SODIUM PHOSPHATE [Concomitant]
     Active Substance: DEXAMETHASONE SODIUM PHOSPHATE
     Dates: start: 20210119, end: 20210119
  2015. DEXAMETHASONE SODIUM PHOSPHATE [Concomitant]
     Active Substance: DEXAMETHASONE SODIUM PHOSPHATE
     Dates: start: 20210323, end: 20210323
  2016. DEXAMETHASONE SODIUM PHOSPHATE [Concomitant]
     Active Substance: DEXAMETHASONE SODIUM PHOSPHATE
     Dates: start: 20210323, end: 20210323
  2017. DEXAMETHASONE SODIUM PHOSPHATE [Concomitant]
     Active Substance: DEXAMETHASONE SODIUM PHOSPHATE
     Dates: start: 20210323, end: 20210323
  2018. DEXAMETHASONE SODIUM PHOSPHATE [Concomitant]
     Active Substance: DEXAMETHASONE SODIUM PHOSPHATE
     Dates: start: 20210323, end: 20210323
  2019. DEXAMETHASONE SODIUM PHOSPHATE [Concomitant]
     Active Substance: DEXAMETHASONE SODIUM PHOSPHATE
     Dates: start: 20210209, end: 20210209
  2020. DEXAMETHASONE SODIUM PHOSPHATE [Concomitant]
     Active Substance: DEXAMETHASONE SODIUM PHOSPHATE
     Dates: start: 20210209, end: 20210209
  2021. DEXAMETHASONE SODIUM PHOSPHATE [Concomitant]
     Active Substance: DEXAMETHASONE SODIUM PHOSPHATE
     Dates: start: 20210119, end: 20210119
  2022. DEXAMETHASONE SODIUM PHOSPHATE [Concomitant]
     Active Substance: DEXAMETHASONE SODIUM PHOSPHATE
     Dates: start: 20210119, end: 20210119
  2023. DEXAMETHASONE SODIUM PHOSPHATE [Concomitant]
     Active Substance: DEXAMETHASONE SODIUM PHOSPHATE
     Indication: Product used for unknown indication
     Dates: start: 20210323, end: 20210323
  2024. DEXAMETHASONE SODIUM PHOSPHATE [Concomitant]
     Active Substance: DEXAMETHASONE SODIUM PHOSPHATE
     Dates: start: 20210323, end: 20210323
  2025. DEXAMETHASONE SODIUM PHOSPHATE [Concomitant]
     Active Substance: DEXAMETHASONE SODIUM PHOSPHATE
     Dates: start: 20210209, end: 20210209
  2026. DEXAMETHASONE SODIUM PHOSPHATE [Concomitant]
     Active Substance: DEXAMETHASONE SODIUM PHOSPHATE
     Dates: start: 20210209, end: 20210209
  2027. DEXAMETHASONE SODIUM PHOSPHATE [Concomitant]
     Active Substance: DEXAMETHASONE SODIUM PHOSPHATE
     Dates: start: 20210119, end: 20210119
  2028. DEXAMETHASONE SODIUM PHOSPHATE [Concomitant]
     Active Substance: DEXAMETHASONE SODIUM PHOSPHATE
     Dates: start: 20210119, end: 20210119
  2029. DEXAMETHASONE SODIUM PHOSPHATE [Concomitant]
     Active Substance: DEXAMETHASONE SODIUM PHOSPHATE
     Dates: start: 20210119, end: 20210119
  2030. DEXAMETHASONE SODIUM PHOSPHATE [Concomitant]
     Active Substance: DEXAMETHASONE SODIUM PHOSPHATE
     Dates: start: 20210119, end: 20210119
  2031. DEXAMETHASONE SODIUM PHOSPHATE [Concomitant]
     Active Substance: DEXAMETHASONE SODIUM PHOSPHATE
     Dates: start: 20210209, end: 20210209
  2032. DEXAMETHASONE SODIUM PHOSPHATE [Concomitant]
     Active Substance: DEXAMETHASONE SODIUM PHOSPHATE
     Dates: start: 20210209, end: 20210209
  2033. DEXAMETHASONE SODIUM PHOSPHATE [Concomitant]
     Active Substance: DEXAMETHASONE SODIUM PHOSPHATE
     Dates: start: 20210302, end: 20210302
  2034. DEXAMETHASONE SODIUM PHOSPHATE [Concomitant]
     Active Substance: DEXAMETHASONE SODIUM PHOSPHATE
     Dates: start: 20210302, end: 20210302
  2035. DEXAMETHASONE SODIUM PHOSPHATE [Concomitant]
     Active Substance: DEXAMETHASONE SODIUM PHOSPHATE
     Dates: start: 20210323, end: 20210323
  2036. DEXAMETHASONE SODIUM PHOSPHATE [Concomitant]
     Active Substance: DEXAMETHASONE SODIUM PHOSPHATE
     Dates: start: 20210323, end: 20210323
  2037. DEXAMETHASONE SODIUM PHOSPHATE [Concomitant]
     Active Substance: DEXAMETHASONE SODIUM PHOSPHATE
     Dates: start: 20210302, end: 20210302
  2038. DEXAMETHASONE SODIUM PHOSPHATE [Concomitant]
     Active Substance: DEXAMETHASONE SODIUM PHOSPHATE
     Dates: start: 20210302, end: 20210302
  2039. DEXAMETHASONE SODIUM PHOSPHATE [Concomitant]
     Active Substance: DEXAMETHASONE SODIUM PHOSPHATE
     Dates: start: 20210209, end: 20210209
  2040. DEXAMETHASONE SODIUM PHOSPHATE [Concomitant]
     Active Substance: DEXAMETHASONE SODIUM PHOSPHATE
     Dates: start: 20210209, end: 20210209
  2041. DEXAMETHASONE SODIUM PHOSPHATE [Concomitant]
     Active Substance: DEXAMETHASONE SODIUM PHOSPHATE
     Dates: start: 20210119, end: 20210119
  2042. DEXAMETHASONE SODIUM PHOSPHATE [Concomitant]
     Active Substance: DEXAMETHASONE SODIUM PHOSPHATE
     Dates: start: 20210119, end: 20210119
  2043. DEXAMETHASONE SODIUM PHOSPHATE [Concomitant]
     Active Substance: DEXAMETHASONE SODIUM PHOSPHATE
     Dates: start: 20210323, end: 20210323
  2044. DEXAMETHASONE SODIUM PHOSPHATE [Concomitant]
     Active Substance: DEXAMETHASONE SODIUM PHOSPHATE
     Dates: start: 20210323, end: 20210323
  2045. DEXAMETHASONE SODIUM PHOSPHATE [Concomitant]
     Active Substance: DEXAMETHASONE SODIUM PHOSPHATE
     Dates: start: 20210323, end: 20210323
  2046. DEXAMETHASONE SODIUM PHOSPHATE [Concomitant]
     Active Substance: DEXAMETHASONE SODIUM PHOSPHATE
     Dates: start: 20210323, end: 20210323
  2047. DEXAMETHASONE SODIUM PHOSPHATE [Concomitant]
     Active Substance: DEXAMETHASONE SODIUM PHOSPHATE
     Dates: start: 20210209, end: 20210209
  2048. DEXAMETHASONE SODIUM PHOSPHATE [Concomitant]
     Active Substance: DEXAMETHASONE SODIUM PHOSPHATE
     Dates: start: 20210209, end: 20210209
  2049. DEXAMETHASONE SODIUM PHOSPHATE [Concomitant]
     Active Substance: DEXAMETHASONE SODIUM PHOSPHATE
     Dates: start: 20210323, end: 20210323
  2050. DEXAMETHASONE SODIUM PHOSPHATE [Concomitant]
     Active Substance: DEXAMETHASONE SODIUM PHOSPHATE
     Dates: start: 20210323, end: 20210323
  2051. DEXAMETHASONE SODIUM PHOSPHATE [Concomitant]
     Active Substance: DEXAMETHASONE SODIUM PHOSPHATE
     Dates: start: 20210302, end: 20210302
  2052. DEXAMETHASONE SODIUM PHOSPHATE [Concomitant]
     Active Substance: DEXAMETHASONE SODIUM PHOSPHATE
     Dates: start: 20210302, end: 20210302
  2053. DEXAMETHASONE SODIUM PHOSPHATE [Concomitant]
     Active Substance: DEXAMETHASONE SODIUM PHOSPHATE
     Dates: start: 20210119, end: 20210119
  2054. DEXAMETHASONE SODIUM PHOSPHATE [Concomitant]
     Active Substance: DEXAMETHASONE SODIUM PHOSPHATE
     Dates: start: 20210119, end: 20210119
  2055. DEXAMETHASONE SODIUM PHOSPHATE [Concomitant]
     Active Substance: DEXAMETHASONE SODIUM PHOSPHATE
     Dates: start: 20210323, end: 20210323
  2056. DEXAMETHASONE SODIUM PHOSPHATE [Concomitant]
     Active Substance: DEXAMETHASONE SODIUM PHOSPHATE
     Dates: start: 20210323, end: 20210323
  2057. DEXAMETHASONE SODIUM PHOSPHATE [Concomitant]
     Active Substance: DEXAMETHASONE SODIUM PHOSPHATE
     Dates: start: 20210323, end: 20210323
  2058. DEXAMETHASONE SODIUM PHOSPHATE [Concomitant]
     Active Substance: DEXAMETHASONE SODIUM PHOSPHATE
     Dates: start: 20210323, end: 20210323
  2059. DEXAMETHASONE SODIUM PHOSPHATE [Concomitant]
     Active Substance: DEXAMETHASONE SODIUM PHOSPHATE
     Dates: start: 20210209, end: 20210209
  2060. DEXAMETHASONE SODIUM PHOSPHATE [Concomitant]
     Active Substance: DEXAMETHASONE SODIUM PHOSPHATE
     Dates: start: 20210209, end: 20210209
  2061. DEXAMETHASONE SODIUM PHOSPHATE [Concomitant]
     Active Substance: DEXAMETHASONE SODIUM PHOSPHATE
     Dates: start: 20210302, end: 20210302
  2062. DEXAMETHASONE SODIUM PHOSPHATE [Concomitant]
     Active Substance: DEXAMETHASONE SODIUM PHOSPHATE
     Dates: start: 20210302, end: 20210302
  2063. DEXAMETHASONE SODIUM PHOSPHATE [Concomitant]
     Active Substance: DEXAMETHASONE SODIUM PHOSPHATE
     Dates: start: 20210119, end: 20210119
  2064. DEXAMETHASONE SODIUM PHOSPHATE [Concomitant]
     Active Substance: DEXAMETHASONE SODIUM PHOSPHATE
     Dates: start: 20210119, end: 20210119
  2065. DEXAMETHASONE SODIUM PHOSPHATE [Concomitant]
     Active Substance: DEXAMETHASONE SODIUM PHOSPHATE
     Dates: start: 20210323, end: 20210323
  2066. DEXAMETHASONE SODIUM PHOSPHATE [Concomitant]
     Active Substance: DEXAMETHASONE SODIUM PHOSPHATE
     Dates: start: 20210323, end: 20210323
  2067. DEXAMETHASONE SODIUM PHOSPHATE [Concomitant]
     Active Substance: DEXAMETHASONE SODIUM PHOSPHATE
     Dates: start: 20210302, end: 20210302
  2068. DEXAMETHASONE SODIUM PHOSPHATE [Concomitant]
     Active Substance: DEXAMETHASONE SODIUM PHOSPHATE
     Dates: start: 20210302, end: 20210302
  2069. DEXAMETHASONE SODIUM PHOSPHATE [Concomitant]
     Active Substance: DEXAMETHASONE SODIUM PHOSPHATE
     Dates: start: 20210302, end: 20210302
  2070. DEXAMETHASONE SODIUM PHOSPHATE [Concomitant]
     Active Substance: DEXAMETHASONE SODIUM PHOSPHATE
     Dates: start: 20210302, end: 20210302
  2071. DEXAMETHASONE SODIUM PHOSPHATE [Concomitant]
     Active Substance: DEXAMETHASONE SODIUM PHOSPHATE
     Dates: start: 20210209, end: 20210209
  2072. DEXAMETHASONE SODIUM PHOSPHATE [Concomitant]
     Active Substance: DEXAMETHASONE SODIUM PHOSPHATE
     Dates: start: 20210209, end: 20210209
  2073. DEXAMETHASONE SODIUM PHOSPHATE [Concomitant]
     Active Substance: DEXAMETHASONE SODIUM PHOSPHATE
     Indication: Product used for unknown indication
     Dates: start: 20210323, end: 20210323
  2074. DEXAMETHASONE SODIUM PHOSPHATE [Concomitant]
     Active Substance: DEXAMETHASONE SODIUM PHOSPHATE
     Dates: start: 20210323, end: 20210323
  2075. DEXAMETHASONE SODIUM PHOSPHATE [Concomitant]
     Active Substance: DEXAMETHASONE SODIUM PHOSPHATE
     Dates: start: 20210302, end: 20210302
  2076. DEXAMETHASONE SODIUM PHOSPHATE [Concomitant]
     Active Substance: DEXAMETHASONE SODIUM PHOSPHATE
     Dates: start: 20210302, end: 20210302
  2077. DEXAMETHASONE SODIUM PHOSPHATE [Concomitant]
     Active Substance: DEXAMETHASONE SODIUM PHOSPHATE
     Dates: start: 20210119, end: 20210119
  2078. DEXAMETHASONE SODIUM PHOSPHATE [Concomitant]
     Active Substance: DEXAMETHASONE SODIUM PHOSPHATE
     Dates: start: 20210119, end: 20210119
  2079. DEXAMETHASONE SODIUM PHOSPHATE [Concomitant]
     Active Substance: DEXAMETHASONE SODIUM PHOSPHATE
     Dates: start: 20210209, end: 20210209
  2080. DEXAMETHASONE SODIUM PHOSPHATE [Concomitant]
     Active Substance: DEXAMETHASONE SODIUM PHOSPHATE
     Dates: start: 20210209, end: 20210209
  2081. DEXAMETHASONE SODIUM PHOSPHATE [Concomitant]
     Active Substance: DEXAMETHASONE SODIUM PHOSPHATE
     Route: 042
     Dates: start: 20210209, end: 20210209
  2082. DEXAMETHASONE SODIUM PHOSPHATE [Concomitant]
     Active Substance: DEXAMETHASONE SODIUM PHOSPHATE
     Route: 042
     Dates: start: 20210209, end: 20210209
  2083. DEXAMETHASONE [Concomitant]
     Active Substance: DEXAMETHASONE
     Indication: Product used for unknown indication
     Route: 042
     Dates: start: 20210209, end: 20210209
  2084. DEXAMETHASONE [Concomitant]
     Active Substance: DEXAMETHASONE
     Route: 042
     Dates: start: 20210302, end: 20210302
  2085. DEXAMETHASONE [Concomitant]
     Active Substance: DEXAMETHASONE
     Route: 042
     Dates: start: 20210119, end: 20210119
  2086. DEXAMETHASONE [Concomitant]
     Active Substance: DEXAMETHASONE
     Route: 042
     Dates: start: 20210323, end: 20210323
  2087. DEXAMETHASONE SODIUM SUCCINATE [Concomitant]
     Active Substance: DEXAMETHASONE SODIUM SUCCINATE
     Indication: Product used for unknown indication
     Dates: start: 20210209, end: 20210209
  2088. DEXAMETHASONE SODIUM SUCCINATE [Concomitant]
     Active Substance: DEXAMETHASONE SODIUM SUCCINATE
     Dates: start: 20210119, end: 20210119
  2089. DEXAMETHASONE SODIUM SUCCINATE [Concomitant]
     Active Substance: DEXAMETHASONE SODIUM SUCCINATE
     Dates: start: 20210323, end: 20210323
  2090. DEXAMETHASONE SODIUM SUCCINATE [Concomitant]
     Active Substance: DEXAMETHASONE SODIUM SUCCINATE
     Dates: start: 20210119, end: 20210119
  2091. DEXAMETHASONE SODIUM SUCCINATE [Concomitant]
     Active Substance: DEXAMETHASONE SODIUM SUCCINATE
     Route: 065
     Dates: start: 20210323, end: 20210323
  2092. DEXAMETHASONE SODIUM SUCCINATE [Concomitant]
     Active Substance: DEXAMETHASONE SODIUM SUCCINATE
     Dates: start: 20210302, end: 20210302
  2093. DEXAMETHASONE SODIUM SUCCINATE [Concomitant]
     Active Substance: DEXAMETHASONE SODIUM SUCCINATE
     Dates: start: 20210209, end: 20210209
  2094. DEXAMETHASONE SODIUM SUCCINATE [Concomitant]
     Active Substance: DEXAMETHASONE SODIUM SUCCINATE
     Dates: start: 20210119, end: 20210119
  2095. DEXAMETHASONE SODIUM SUCCINATE [Concomitant]
     Active Substance: DEXAMETHASONE SODIUM SUCCINATE
     Dates: start: 20210323, end: 20210323
  2096. DEXAMETHASONE SODIUM SUCCINATE [Concomitant]
     Active Substance: DEXAMETHASONE SODIUM SUCCINATE
     Dates: start: 20210302, end: 20210302
  2097. DEXAMETHASONE SODIUM SUCCINATE [Concomitant]
     Active Substance: DEXAMETHASONE SODIUM SUCCINATE
     Dates: start: 20210209, end: 20210209
  2098. DEXAMETHASONE SODIUM SUCCINATE [Concomitant]
     Active Substance: DEXAMETHASONE SODIUM SUCCINATE
     Dates: start: 20210323, end: 20210323
  2099. DEXAMETHASONE SODIUM SUCCINATE [Concomitant]
     Active Substance: DEXAMETHASONE SODIUM SUCCINATE
     Dates: start: 20210302, end: 20210302
  2100. DEXAMETHASONE SODIUM SUCCINATE [Concomitant]
     Active Substance: DEXAMETHASONE SODIUM SUCCINATE
     Dates: start: 20210119, end: 20210119
  2101. DEXAMETHASONE SODIUM SUCCINATE [Concomitant]
     Active Substance: DEXAMETHASONE SODIUM SUCCINATE
     Dates: start: 20210323, end: 20210323
  2102. DEXAMETHASONE SODIUM SUCCINATE [Concomitant]
     Active Substance: DEXAMETHASONE SODIUM SUCCINATE
     Dates: start: 20210323, end: 20210323
  2103. DEXAMETHASONE SODIUM SUCCINATE [Concomitant]
     Active Substance: DEXAMETHASONE SODIUM SUCCINATE
     Dates: start: 20210209, end: 20210209
  2104. DEXAMETHASONE SODIUM SUCCINATE [Concomitant]
     Active Substance: DEXAMETHASONE SODIUM SUCCINATE
     Dates: start: 20210119, end: 20210119
  2105. DEXAMETHASONE SODIUM SUCCINATE [Concomitant]
     Active Substance: DEXAMETHASONE SODIUM SUCCINATE
     Dates: start: 20210323, end: 20210323
  2106. DEXAMETHASONE SODIUM SUCCINATE [Concomitant]
     Active Substance: DEXAMETHASONE SODIUM SUCCINATE
     Dates: start: 20210323, end: 20210323
  2107. DEXAMETHASONE SODIUM SUCCINATE [Concomitant]
     Active Substance: DEXAMETHASONE SODIUM SUCCINATE
     Dates: start: 20210209, end: 20210209
  2108. DEXAMETHASONE SODIUM SUCCINATE [Concomitant]
     Active Substance: DEXAMETHASONE SODIUM SUCCINATE
     Dates: start: 20210302, end: 20210302
  2109. DEXAMETHASONE SODIUM SUCCINATE [Concomitant]
     Active Substance: DEXAMETHASONE SODIUM SUCCINATE
     Dates: start: 20210302, end: 20210302
  2110. DEXAMETHASONE SODIUM SUCCINATE [Concomitant]
     Active Substance: DEXAMETHASONE SODIUM SUCCINATE
     Dates: start: 20210302, end: 20210302
  2111. DEXAMETHASONE SODIUM SUCCINATE [Concomitant]
     Active Substance: DEXAMETHASONE SODIUM SUCCINATE
     Dates: start: 20210323, end: 20210323
  2112. DEXAMETHASONE SODIUM SUCCINATE [Concomitant]
     Active Substance: DEXAMETHASONE SODIUM SUCCINATE
     Dates: start: 20210209, end: 20210209
  2113. DEXAMETHASONE SODIUM SUCCINATE [Concomitant]
     Active Substance: DEXAMETHASONE SODIUM SUCCINATE
     Dates: start: 20210223, end: 20210223
  2114. DEXAMETHASONE SODIUM SUCCINATE [Concomitant]
     Active Substance: DEXAMETHASONE SODIUM SUCCINATE
     Dates: start: 20210119, end: 20210119
  2115. DEXAMETHASONE SODIUM SUCCINATE [Concomitant]
     Active Substance: DEXAMETHASONE SODIUM SUCCINATE
     Route: 065
     Dates: start: 20210209, end: 20210209
  2116. DEXAMETHASONE SODIUM SUCCINATE [Concomitant]
     Active Substance: DEXAMETHASONE SODIUM SUCCINATE
     Route: 065
     Dates: start: 20210302, end: 20210302
  2117. DEXAMETHASONE SODIUM SUCCINATE [Concomitant]
     Active Substance: DEXAMETHASONE SODIUM SUCCINATE
     Dates: start: 20210302, end: 20210302
  2118. DEXAMETHASONE SODIUM SUCCINATE [Concomitant]
     Active Substance: DEXAMETHASONE SODIUM SUCCINATE
     Dates: start: 20210119, end: 20210119
  2119. DEXAMETHASONE SODIUM SUCCINATE [Concomitant]
     Active Substance: DEXAMETHASONE SODIUM SUCCINATE
     Dates: start: 20210209, end: 20210209
  2120. DEXAMETHASONE SODIUM SUCCINATE [Concomitant]
     Active Substance: DEXAMETHASONE SODIUM SUCCINATE
     Dates: start: 20210119, end: 20210119
  2121. DEXAMETHASONE SODIUM SUCCINATE [Concomitant]
     Active Substance: DEXAMETHASONE SODIUM SUCCINATE
     Dates: start: 20210119, end: 20210119
  2122. DEXAMETHASONE SODIUM SUCCINATE [Concomitant]
     Active Substance: DEXAMETHASONE SODIUM SUCCINATE
     Dates: start: 20210323, end: 20210323
  2123. DEXAMETHASONE SODIUM SUCCINATE [Concomitant]
     Active Substance: DEXAMETHASONE SODIUM SUCCINATE
     Dates: start: 20210119, end: 20210119
  2124. DEXAMETHASONE SODIUM SUCCINATE [Concomitant]
     Active Substance: DEXAMETHASONE SODIUM SUCCINATE
     Dates: start: 20210209, end: 20210209
  2125. DEXAMETHASONE SODIUM SUCCINATE [Concomitant]
     Active Substance: DEXAMETHASONE SODIUM SUCCINATE
     Dates: start: 20210209, end: 20210209
  2126. DEXAMETHASONE SODIUM SUCCINATE [Concomitant]
     Active Substance: DEXAMETHASONE SODIUM SUCCINATE
     Dates: start: 20210323, end: 20210323
  2127. DEXAMETHASONE SODIUM SUCCINATE [Concomitant]
     Active Substance: DEXAMETHASONE SODIUM SUCCINATE
     Dates: start: 20210323, end: 20210323
  2128. DEXAMETHASONE SODIUM SUCCINATE [Concomitant]
     Active Substance: DEXAMETHASONE SODIUM SUCCINATE
     Dates: start: 20210302, end: 20210302
  2129. DEXAMETHASONE SODIUM SUCCINATE [Concomitant]
     Active Substance: DEXAMETHASONE SODIUM SUCCINATE
     Dates: start: 20210119, end: 20210119
  2130. DEXAMETHASONE SODIUM SUCCINATE [Concomitant]
     Active Substance: DEXAMETHASONE SODIUM SUCCINATE
     Dates: start: 20210119, end: 20210119
  2131. DEXAMETHASONE SODIUM SUCCINATE [Concomitant]
     Active Substance: DEXAMETHASONE SODIUM SUCCINATE
     Dates: start: 20210209, end: 20210209
  2132. DEXAMETHASONE SODIUM SUCCINATE [Concomitant]
     Active Substance: DEXAMETHASONE SODIUM SUCCINATE
     Dates: start: 20210323, end: 20210323
  2133. DEXAMETHASONE SODIUM SUCCINATE [Concomitant]
     Active Substance: DEXAMETHASONE SODIUM SUCCINATE
     Dates: start: 20210323, end: 20210323
  2134. DEXAMETHASONE SODIUM SUCCINATE [Concomitant]
     Active Substance: DEXAMETHASONE SODIUM SUCCINATE
     Dates: start: 20210119, end: 20210119
  2135. DEXAMETHASONE SODIUM SUCCINATE [Concomitant]
     Active Substance: DEXAMETHASONE SODIUM SUCCINATE
     Dates: start: 20210302, end: 20210302
  2136. DEXAMETHASONE SODIUM SUCCINATE [Concomitant]
     Active Substance: DEXAMETHASONE SODIUM SUCCINATE
     Dates: start: 20210209, end: 20210209
  2137. DEXAMETHASONE SODIUM SUCCINATE [Concomitant]
     Active Substance: DEXAMETHASONE SODIUM SUCCINATE
     Indication: Product used for unknown indication
     Dates: start: 20210209, end: 20210209
  2138. DEXAMETHASONE SODIUM SUCCINATE [Concomitant]
     Active Substance: DEXAMETHASONE SODIUM SUCCINATE
     Dates: start: 20210323, end: 20210323
  2139. DEXAMETHASONE SODIUM SUCCINATE [Concomitant]
     Active Substance: DEXAMETHASONE SODIUM SUCCINATE
     Dates: start: 20210119, end: 20210119
  2140. DEXAMETHASONE SODIUM SUCCINATE [Concomitant]
     Active Substance: DEXAMETHASONE SODIUM SUCCINATE
     Dates: start: 20210119, end: 20210119
  2141. DEXAMETHASONE SODIUM SUCCINATE [Concomitant]
     Active Substance: DEXAMETHASONE SODIUM SUCCINATE
     Dates: start: 20210209, end: 20210209
  2142. DEXAMETHASONE SODIUM SUCCINATE [Concomitant]
     Active Substance: DEXAMETHASONE SODIUM SUCCINATE
     Dates: start: 20210119, end: 20210119
  2143. DEXAMETHASONE SODIUM SUCCINATE [Concomitant]
     Active Substance: DEXAMETHASONE SODIUM SUCCINATE
     Dates: start: 20210119, end: 20210119
  2144. DEXAMETHASONE SODIUM SUCCINATE [Concomitant]
     Active Substance: DEXAMETHASONE SODIUM SUCCINATE
     Dates: start: 20210323, end: 20210323
  2145. DEXAMETHASONE SODIUM SUCCINATE [Concomitant]
     Active Substance: DEXAMETHASONE SODIUM SUCCINATE
     Dates: start: 20210119, end: 20210119
  2146. DEXAMETHASONE SODIUM SUCCINATE [Concomitant]
     Active Substance: DEXAMETHASONE SODIUM SUCCINATE
     Dates: start: 20210302, end: 20210302
  2147. DEXAMETHASONE SODIUM SUCCINATE [Concomitant]
     Active Substance: DEXAMETHASONE SODIUM SUCCINATE
     Dates: start: 20210302, end: 20210302
  2148. DEXAMETHASONE SODIUM SUCCINATE [Concomitant]
     Active Substance: DEXAMETHASONE SODIUM SUCCINATE
     Dates: start: 20210302, end: 20210302
  2149. DEXAMETHASONE SODIUM SUCCINATE [Concomitant]
     Active Substance: DEXAMETHASONE SODIUM SUCCINATE
     Dates: start: 20210302, end: 20210302
  2150. DEXAMETHASONE SODIUM SUCCINATE [Concomitant]
     Active Substance: DEXAMETHASONE SODIUM SUCCINATE
     Dates: start: 20210302, end: 20210302
  2151. DEXAMETHASONE SODIUM SUCCINATE [Concomitant]
     Active Substance: DEXAMETHASONE SODIUM SUCCINATE
     Dates: start: 20210302, end: 20210302
  2152. DEXAMETHASONE SODIUM SUCCINATE [Concomitant]
     Active Substance: DEXAMETHASONE SODIUM SUCCINATE
     Dates: start: 20210209, end: 20210209
  2153. DEXAMETHASONE SODIUM SUCCINATE [Concomitant]
     Active Substance: DEXAMETHASONE SODIUM SUCCINATE
     Dates: start: 20210209, end: 20210209
  2154. DEXAMETHASONE SODIUM SUCCINATE [Concomitant]
     Active Substance: DEXAMETHASONE SODIUM SUCCINATE
     Dates: start: 20210323, end: 20210323
  2155. DEXAMETHASONE SODIUM SUCCINATE [Concomitant]
     Active Substance: DEXAMETHASONE SODIUM SUCCINATE
     Dates: start: 20210323, end: 20210323
  2156. DEXAMETHASONE SODIUM SUCCINATE [Concomitant]
     Active Substance: DEXAMETHASONE SODIUM SUCCINATE
     Dates: start: 20210302, end: 20210302
  2157. DEXAMETHASONE SODIUM SUCCINATE [Concomitant]
     Active Substance: DEXAMETHASONE SODIUM SUCCINATE
     Dates: start: 20210302, end: 20210302
  2158. DEXAMETHASONE SODIUM SUCCINATE [Concomitant]
     Active Substance: DEXAMETHASONE SODIUM SUCCINATE
     Dates: start: 20210323, end: 20210323
  2159. DEXAMETHASONE SODIUM SUCCINATE [Concomitant]
     Active Substance: DEXAMETHASONE SODIUM SUCCINATE
     Dates: start: 20210323, end: 20210323
  2160. DEXAMETHASONE SODIUM SUCCINATE [Concomitant]
     Active Substance: DEXAMETHASONE SODIUM SUCCINATE
     Dates: start: 20210323, end: 20210323
  2161. DEXAMETHASONE SODIUM SUCCINATE [Concomitant]
     Active Substance: DEXAMETHASONE SODIUM SUCCINATE
     Dates: start: 20210323, end: 20210323
  2162. DEXAMETHASONE SODIUM SUCCINATE [Concomitant]
     Active Substance: DEXAMETHASONE SODIUM SUCCINATE
     Dates: start: 20210209, end: 20210209
  2163. DEXAMETHASONE SODIUM SUCCINATE [Concomitant]
     Active Substance: DEXAMETHASONE SODIUM SUCCINATE
     Dates: start: 20210209, end: 20210209
  2164. DEXAMETHASONE SODIUM SUCCINATE [Concomitant]
     Active Substance: DEXAMETHASONE SODIUM SUCCINATE
     Dates: start: 20210119, end: 20210119
  2165. DEXAMETHASONE SODIUM SUCCINATE [Concomitant]
     Active Substance: DEXAMETHASONE SODIUM SUCCINATE
     Dates: start: 20210119, end: 20210119
  2166. DEXAMETHASONE SODIUM SUCCINATE [Concomitant]
     Active Substance: DEXAMETHASONE SODIUM SUCCINATE
     Dates: start: 20210302, end: 20210302
  2167. DEXAMETHASONE SODIUM SUCCINATE [Concomitant]
     Active Substance: DEXAMETHASONE SODIUM SUCCINATE
     Dates: start: 20210302, end: 20210302
  2168. DEXAMETHASONE SODIUM SUCCINATE [Concomitant]
     Active Substance: DEXAMETHASONE SODIUM SUCCINATE
     Dates: start: 20210302, end: 20210302
  2169. DEXAMETHASONE SODIUM SUCCINATE [Concomitant]
     Active Substance: DEXAMETHASONE SODIUM SUCCINATE
     Dates: start: 20210302, end: 20210302
  2170. DEXAMETHASONE SODIUM SUCCINATE [Concomitant]
     Active Substance: DEXAMETHASONE SODIUM SUCCINATE
     Dates: start: 20210209, end: 20210209
  2171. DEXAMETHASONE SODIUM SUCCINATE [Concomitant]
     Active Substance: DEXAMETHASONE SODIUM SUCCINATE
     Dates: start: 20210209, end: 20210209
  2172. DEXAMETHASONE SODIUM SUCCINATE [Concomitant]
     Active Substance: DEXAMETHASONE SODIUM SUCCINATE
     Dates: start: 20210323, end: 20210323
  2173. DEXAMETHASONE SODIUM SUCCINATE [Concomitant]
     Active Substance: DEXAMETHASONE SODIUM SUCCINATE
     Dates: start: 20210323, end: 20210323
  2174. DEXAMETHASONE SODIUM SUCCINATE [Concomitant]
     Active Substance: DEXAMETHASONE SODIUM SUCCINATE
     Dates: start: 20210119, end: 20210119
  2175. DEXAMETHASONE SODIUM SUCCINATE [Concomitant]
     Active Substance: DEXAMETHASONE SODIUM SUCCINATE
     Dates: start: 20210119, end: 20210119
  2176. DEXAMETHASONE SODIUM SUCCINATE [Concomitant]
     Active Substance: DEXAMETHASONE SODIUM SUCCINATE
     Dates: start: 20210323, end: 20210323
  2177. DEXAMETHASONE SODIUM SUCCINATE [Concomitant]
     Active Substance: DEXAMETHASONE SODIUM SUCCINATE
     Dates: start: 20210323, end: 20210323
  2178. DEXAMETHASONE SODIUM SUCCINATE [Concomitant]
     Active Substance: DEXAMETHASONE SODIUM SUCCINATE
     Dates: start: 20210323, end: 20210323
  2179. DEXAMETHASONE SODIUM SUCCINATE [Concomitant]
     Active Substance: DEXAMETHASONE SODIUM SUCCINATE
     Dates: start: 20210323, end: 20210323
  2180. DEXAMETHASONE SODIUM SUCCINATE [Concomitant]
     Active Substance: DEXAMETHASONE SODIUM SUCCINATE
     Dates: start: 20210209, end: 20210209
  2181. DEXAMETHASONE SODIUM SUCCINATE [Concomitant]
     Active Substance: DEXAMETHASONE SODIUM SUCCINATE
     Dates: start: 20210209, end: 20210209
  2182. DEXAMETHASONE SODIUM SUCCINATE [Concomitant]
     Active Substance: DEXAMETHASONE SODIUM SUCCINATE
     Dates: start: 20210119, end: 20210119
  2183. DEXAMETHASONE SODIUM SUCCINATE [Concomitant]
     Active Substance: DEXAMETHASONE SODIUM SUCCINATE
     Dates: start: 20210119, end: 20210119
  2184. DEXAMETHASONE SODIUM SUCCINATE [Concomitant]
     Active Substance: DEXAMETHASONE SODIUM SUCCINATE
     Dates: start: 20210323, end: 20210323
  2185. DEXAMETHASONE SODIUM SUCCINATE [Concomitant]
     Active Substance: DEXAMETHASONE SODIUM SUCCINATE
     Dates: start: 20210323, end: 20210323
  2186. DEXAMETHASONE SODIUM SUCCINATE [Concomitant]
     Active Substance: DEXAMETHASONE SODIUM SUCCINATE
     Dates: start: 20210209, end: 20210209
  2187. DEXAMETHASONE SODIUM SUCCINATE [Concomitant]
     Active Substance: DEXAMETHASONE SODIUM SUCCINATE
     Indication: Product used for unknown indication
     Dates: start: 20210209, end: 20210209
  2188. DEXAMETHASONE SODIUM SUCCINATE [Concomitant]
     Active Substance: DEXAMETHASONE SODIUM SUCCINATE
     Dates: start: 20210119, end: 20210119
  2189. DEXAMETHASONE SODIUM SUCCINATE [Concomitant]
     Active Substance: DEXAMETHASONE SODIUM SUCCINATE
     Dates: start: 20210119, end: 20210119
  2190. DEXAMETHASONE SODIUM SUCCINATE [Concomitant]
     Active Substance: DEXAMETHASONE SODIUM SUCCINATE
     Dates: start: 20210119, end: 20210119
  2191. DEXAMETHASONE SODIUM SUCCINATE [Concomitant]
     Active Substance: DEXAMETHASONE SODIUM SUCCINATE
     Dates: start: 20210119, end: 20210119
  2192. DEXAMETHASONE SODIUM SUCCINATE [Concomitant]
     Active Substance: DEXAMETHASONE SODIUM SUCCINATE
     Dates: start: 20210209, end: 20210209
  2193. DEXAMETHASONE SODIUM SUCCINATE [Concomitant]
     Active Substance: DEXAMETHASONE SODIUM SUCCINATE
     Dates: start: 20210209, end: 20210209
  2194. DEXAMETHASONE SODIUM SUCCINATE [Concomitant]
     Active Substance: DEXAMETHASONE SODIUM SUCCINATE
     Dates: start: 20210302, end: 20210302
  2195. DEXAMETHASONE SODIUM SUCCINATE [Concomitant]
     Active Substance: DEXAMETHASONE SODIUM SUCCINATE
     Dates: start: 20210302, end: 20210302
  2196. DEXAMETHASONE SODIUM SUCCINATE [Concomitant]
     Active Substance: DEXAMETHASONE SODIUM SUCCINATE
     Dates: start: 20210323, end: 20210323
  2197. DEXAMETHASONE SODIUM SUCCINATE [Concomitant]
     Active Substance: DEXAMETHASONE SODIUM SUCCINATE
     Dates: start: 20210323, end: 20210323
  2198. DEXAMETHASONE SODIUM SUCCINATE [Concomitant]
     Active Substance: DEXAMETHASONE SODIUM SUCCINATE
     Dates: start: 20210302, end: 20210302
  2199. DEXAMETHASONE SODIUM SUCCINATE [Concomitant]
     Active Substance: DEXAMETHASONE SODIUM SUCCINATE
     Dates: start: 20210302, end: 20210302
  2200. DEXAMETHASONE SODIUM SUCCINATE [Concomitant]
     Active Substance: DEXAMETHASONE SODIUM SUCCINATE
     Dates: start: 20210209, end: 20210209
  2201. DEXAMETHASONE SODIUM SUCCINATE [Concomitant]
     Active Substance: DEXAMETHASONE SODIUM SUCCINATE
     Dates: start: 20210209, end: 20210209
  2202. DEXAMETHASONE SODIUM SUCCINATE [Concomitant]
     Active Substance: DEXAMETHASONE SODIUM SUCCINATE
     Dates: start: 20210119, end: 20210119
  2203. DEXAMETHASONE SODIUM SUCCINATE [Concomitant]
     Active Substance: DEXAMETHASONE SODIUM SUCCINATE
     Dates: start: 20210119, end: 20210119
  2204. DEXAMETHASONE SODIUM SUCCINATE [Concomitant]
     Active Substance: DEXAMETHASONE SODIUM SUCCINATE
     Dates: start: 20210323, end: 20210323
  2205. DEXAMETHASONE SODIUM SUCCINATE [Concomitant]
     Active Substance: DEXAMETHASONE SODIUM SUCCINATE
     Dates: start: 20210323, end: 20210323
  2206. DEXAMETHASONE SODIUM SUCCINATE [Concomitant]
     Active Substance: DEXAMETHASONE SODIUM SUCCINATE
     Dates: start: 20210323, end: 20210323
  2207. DEXAMETHASONE SODIUM SUCCINATE [Concomitant]
     Active Substance: DEXAMETHASONE SODIUM SUCCINATE
     Dates: start: 20210323, end: 20210323
  2208. DEXAMETHASONE SODIUM SUCCINATE [Concomitant]
     Active Substance: DEXAMETHASONE SODIUM SUCCINATE
     Dates: start: 20210209, end: 20210209
  2209. DEXAMETHASONE SODIUM SUCCINATE [Concomitant]
     Active Substance: DEXAMETHASONE SODIUM SUCCINATE
     Dates: start: 20210209, end: 20210209
  2210. DEXAMETHASONE SODIUM SUCCINATE [Concomitant]
     Active Substance: DEXAMETHASONE SODIUM SUCCINATE
     Dates: start: 20210323, end: 20210323
  2211. DEXAMETHASONE SODIUM SUCCINATE [Concomitant]
     Active Substance: DEXAMETHASONE SODIUM SUCCINATE
     Dates: start: 20210323, end: 20210323
  2212. DEXAMETHASONE SODIUM SUCCINATE [Concomitant]
     Active Substance: DEXAMETHASONE SODIUM SUCCINATE
     Dates: start: 20210302, end: 20210302
  2213. DEXAMETHASONE SODIUM SUCCINATE [Concomitant]
     Active Substance: DEXAMETHASONE SODIUM SUCCINATE
     Dates: start: 20210302, end: 20210302
  2214. DEXAMETHASONE SODIUM SUCCINATE [Concomitant]
     Active Substance: DEXAMETHASONE SODIUM SUCCINATE
     Dates: start: 20210119, end: 20210119
  2215. DEXAMETHASONE SODIUM SUCCINATE [Concomitant]
     Active Substance: DEXAMETHASONE SODIUM SUCCINATE
     Dates: start: 20210119, end: 20210119
  2216. DEXAMETHASONE SODIUM SUCCINATE [Concomitant]
     Active Substance: DEXAMETHASONE SODIUM SUCCINATE
     Dates: start: 20210323, end: 20210323
  2217. DEXAMETHASONE SODIUM SUCCINATE [Concomitant]
     Active Substance: DEXAMETHASONE SODIUM SUCCINATE
     Dates: start: 20210323, end: 20210323
  2218. DEXAMETHASONE SODIUM SUCCINATE [Concomitant]
     Active Substance: DEXAMETHASONE SODIUM SUCCINATE
     Dates: start: 20210323, end: 20210323
  2219. DEXAMETHASONE SODIUM SUCCINATE [Concomitant]
     Active Substance: DEXAMETHASONE SODIUM SUCCINATE
     Dates: start: 20210323, end: 20210323
  2220. DEXAMETHASONE SODIUM SUCCINATE [Concomitant]
     Active Substance: DEXAMETHASONE SODIUM SUCCINATE
     Dates: start: 20210209, end: 20210209
  2221. DEXAMETHASONE SODIUM SUCCINATE [Concomitant]
     Active Substance: DEXAMETHASONE SODIUM SUCCINATE
     Dates: start: 20210209, end: 20210209
  2222. DEXAMETHASONE SODIUM SUCCINATE [Concomitant]
     Active Substance: DEXAMETHASONE SODIUM SUCCINATE
     Dates: start: 20210302, end: 20210302
  2223. DEXAMETHASONE SODIUM SUCCINATE [Concomitant]
     Active Substance: DEXAMETHASONE SODIUM SUCCINATE
     Dates: start: 20210302, end: 20210302
  2224. DEXAMETHASONE SODIUM SUCCINATE [Concomitant]
     Active Substance: DEXAMETHASONE SODIUM SUCCINATE
     Dates: start: 20210119, end: 20210119
  2225. DEXAMETHASONE SODIUM SUCCINATE [Concomitant]
     Active Substance: DEXAMETHASONE SODIUM SUCCINATE
     Dates: start: 20210119, end: 20210119
  2226. DEXAMETHASONE SODIUM SUCCINATE [Concomitant]
     Active Substance: DEXAMETHASONE SODIUM SUCCINATE
     Dates: start: 20210323, end: 20210323
  2227. DEXAMETHASONE SODIUM SUCCINATE [Concomitant]
     Active Substance: DEXAMETHASONE SODIUM SUCCINATE
     Dates: start: 20210323, end: 20210323
  2228. DEXAMETHASONE SODIUM SUCCINATE [Concomitant]
     Active Substance: DEXAMETHASONE SODIUM SUCCINATE
     Dates: start: 20210302, end: 20210302
  2229. DEXAMETHASONE SODIUM SUCCINATE [Concomitant]
     Active Substance: DEXAMETHASONE SODIUM SUCCINATE
     Dates: start: 20210302, end: 20210302
  2230. DEXAMETHASONE SODIUM SUCCINATE [Concomitant]
     Active Substance: DEXAMETHASONE SODIUM SUCCINATE
     Dates: start: 20210302, end: 20210302
  2231. DEXAMETHASONE SODIUM SUCCINATE [Concomitant]
     Active Substance: DEXAMETHASONE SODIUM SUCCINATE
     Dates: start: 20210302, end: 20210302
  2232. DEXAMETHASONE SODIUM SUCCINATE [Concomitant]
     Active Substance: DEXAMETHASONE SODIUM SUCCINATE
     Dates: start: 20210209, end: 20210209
  2233. DEXAMETHASONE SODIUM SUCCINATE [Concomitant]
     Active Substance: DEXAMETHASONE SODIUM SUCCINATE
     Dates: start: 20210209, end: 20210209
  2234. DEXAMETHASONE SODIUM SUCCINATE [Concomitant]
     Active Substance: DEXAMETHASONE SODIUM SUCCINATE
     Dates: start: 20210323, end: 20210323
  2235. DEXAMETHASONE SODIUM SUCCINATE [Concomitant]
     Active Substance: DEXAMETHASONE SODIUM SUCCINATE
     Dates: start: 20210323, end: 20210323
  2236. DEXAMETHASONE SODIUM SUCCINATE [Concomitant]
     Active Substance: DEXAMETHASONE SODIUM SUCCINATE
     Dates: start: 20210302, end: 20210302
  2237. DEXAMETHASONE SODIUM SUCCINATE [Concomitant]
     Active Substance: DEXAMETHASONE SODIUM SUCCINATE
     Indication: Product used for unknown indication
     Dates: start: 20210302, end: 20210302
  2238. DEXAMETHASONE SODIUM SUCCINATE [Concomitant]
     Active Substance: DEXAMETHASONE SODIUM SUCCINATE
     Dates: start: 20210119, end: 20210119
  2239. DEXAMETHASONE SODIUM SUCCINATE [Concomitant]
     Active Substance: DEXAMETHASONE SODIUM SUCCINATE
     Dates: start: 20210119, end: 20210119
  2240. DEXAMETHASONE SODIUM SUCCINATE [Concomitant]
     Active Substance: DEXAMETHASONE SODIUM SUCCINATE
     Dates: start: 20210209, end: 20210209
  2241. DEXAMETHASONE SODIUM SUCCINATE [Concomitant]
     Active Substance: DEXAMETHASONE SODIUM SUCCINATE
     Dates: start: 20210209, end: 20210209
  2242. DEXAMETHASONE SODIUM SUCCINATE [Concomitant]
     Active Substance: DEXAMETHASONE SODIUM SUCCINATE
     Route: 042
     Dates: start: 20210209, end: 20210209
  2243. DEXAMETHASONE SODIUM SUCCINATE [Concomitant]
     Active Substance: DEXAMETHASONE SODIUM SUCCINATE
     Route: 042
     Dates: start: 20210209, end: 20210209
  2244. DEXAMETHASONE SODIUM SUCCINATE [Concomitant]
     Active Substance: DEXAMETHASONE SODIUM SUCCINATE
     Route: 042
     Dates: start: 20210323, end: 20210323
  2245. DEXAMETHASONE SODIUM SUCCINATE [Concomitant]
     Active Substance: DEXAMETHASONE SODIUM SUCCINATE
     Route: 042
     Dates: start: 20210119, end: 20210119
  2246. DEXAMETHASONE SODIUM SUCCINATE [Concomitant]
     Active Substance: DEXAMETHASONE SODIUM SUCCINATE
     Route: 042
     Dates: start: 20210302, end: 20210302
  2247. DEXAMETHASONE SODIUM SUCCINATE [Concomitant]
     Active Substance: DEXAMETHASONE SODIUM SUCCINATE
     Route: 042
     Dates: start: 20210209, end: 20210209
  2248. DEXAMETHASONE SODIUM SUCCINATE [Concomitant]
     Active Substance: DEXAMETHASONE SODIUM SUCCINATE
     Route: 042
     Dates: start: 20210302, end: 20210302
  2249. DEXAMETHASONE SODIUM SUCCINATE [Concomitant]
     Active Substance: DEXAMETHASONE SODIUM SUCCINATE
     Route: 042
     Dates: start: 20210119, end: 20210119
  2250. DEXAMETHASONE SODIUM SUCCINATE [Concomitant]
     Active Substance: DEXAMETHASONE SODIUM SUCCINATE
     Route: 042
     Dates: start: 20210323, end: 20210323
  2251. CHLORPHENAMINE [CHLORPHENAMINE MALEATE] [Concomitant]
     Indication: Rash maculo-papular
     Route: 065
     Dates: start: 20201215, end: 20201215
  2252. CHLORPHENAMINE [CHLORPHENAMINE MALEATE] [Concomitant]
     Indication: Prophylaxis
     Route: 065
     Dates: start: 20210309, end: 20210309
  2253. CHLORPHENAMINE [CHLORPHENAMINE MALEATE] [Concomitant]
     Route: 065
     Dates: start: 20201215, end: 20201215
  2254. CHLORPHENAMINE [CHLORPHENAMINE MALEATE] [Concomitant]
     Route: 065
     Dates: start: 20201124, end: 20201124
  2255. CHLORPHENAMINE [CHLORPHENAMINE MALEATE] [Concomitant]
     Route: 065
     Dates: start: 20210302, end: 20210302
  2256. CHLORPHENAMINE [CHLORPHENAMINE MALEATE] [Concomitant]
     Route: 065
     Dates: start: 20210119, end: 20210119
  2257. CHLORPHENAMINE [CHLORPHENAMINE MALEATE] [Concomitant]
     Route: 065
     Dates: start: 20201217
  2258. CHLORPHENAMINE [CHLORPHENAMINE MALEATE] [Concomitant]
     Route: 042
     Dates: start: 20210323, end: 20210323
  2259. CHLORPHENAMINE [CHLORPHENAMINE MALEATE] [Concomitant]
     Route: 065
     Dates: start: 20210126, end: 20210126
  2260. CHLORPHENAMINE [CHLORPHENAMINE MALEATE] [Concomitant]
     Route: 065
     Dates: start: 20210216, end: 20210216
  2261. CHLORPHENAMINE [CHLORPHENAMINE MALEATE] [Concomitant]
     Route: 065
     Dates: start: 20210209, end: 20210209
  2262. CHLORPHENAMINE [CHLORPHENAMINE MALEATE] [Concomitant]
     Dates: start: 20201124, end: 20201124
  2263. CHLORPHENAMINE [CHLORPHENAMINE MALEATE] [Concomitant]
     Dates: start: 20210323, end: 20210323
  2264. CHLORPHENAMINE [CHLORPHENAMINE MALEATE] [Concomitant]
     Dates: start: 20210216, end: 20210216
  2265. CHLORPHENAMINE [CHLORPHENAMINE MALEATE] [Concomitant]
     Dates: start: 20201217
  2266. CHLORPHENAMINE [CHLORPHENAMINE MALEATE] [Concomitant]
     Dates: start: 20201217
  2267. CHLORPHENAMINE [CHLORPHENAMINE MALEATE] [Concomitant]
     Dates: start: 20210216, end: 20210216
  2268. CHLORPHENAMINE [CHLORPHENAMINE MALEATE] [Concomitant]
     Dates: start: 20210216, end: 20210216
  2269. CHLORPHENAMINE [CHLORPHENAMINE MALEATE] [Concomitant]
     Dates: start: 20201217
  2270. CHLORPHENAMINE [CHLORPHENAMINE MALEATE] [Concomitant]
     Dates: start: 20201217
  2271. CHLORPHENAMINE [CHLORPHENAMINE MALEATE] [Concomitant]
     Dates: start: 20201217
  2272. CHLORPHENAMINE [CHLORPHENAMINE MALEATE] [Concomitant]
     Dates: start: 20201217
  2273. CHLORPHENAMINE [CHLORPHENAMINE MALEATE] [Concomitant]
     Dates: start: 20201217
  2274. CHLORPHENAMINE [CHLORPHENAMINE MALEATE] [Concomitant]
     Dates: start: 20210309, end: 20210309
  2275. CHLORPHENAMINE [CHLORPHENAMINE MALEATE] [Concomitant]
     Dates: start: 20210119, end: 20210119
  2276. CHLORPHENAMINE [CHLORPHENAMINE MALEATE] [Concomitant]
     Dates: start: 20210309, end: 20210309
  2277. CHLORPHENAMINE [CHLORPHENAMINE MALEATE] [Concomitant]
     Dates: start: 20210126, end: 20210126
  2278. CHLORPHENAMINE [CHLORPHENAMINE MALEATE] [Concomitant]
     Dates: start: 20210216, end: 20210216
  2279. CHLORPHENAMINE [CHLORPHENAMINE MALEATE] [Concomitant]
     Dates: start: 20201217
  2280. CHLORPHENAMINE [CHLORPHENAMINE MALEATE] [Concomitant]
     Dates: start: 20210303, end: 20210303
  2281. CHLORPHENAMINE [CHLORPHENAMINE MALEATE] [Concomitant]
     Dates: start: 20210126, end: 20210126
  2282. CHLORPHENAMINE [CHLORPHENAMINE MALEATE] [Concomitant]
     Dates: start: 20210126, end: 20210126
  2283. CHLORPHENAMINE [CHLORPHENAMINE MALEATE] [Concomitant]
     Dates: start: 20210302, end: 20210302
  2284. CHLORPHENAMINE [CHLORPHENAMINE MALEATE] [Concomitant]
     Dates: start: 20210302, end: 20210302
  2285. CHLORPHENAMINE [CHLORPHENAMINE MALEATE] [Concomitant]
     Dates: start: 20210119, end: 20210119
  2286. CHLORPHENAMINE [CHLORPHENAMINE MALEATE] [Concomitant]
     Dates: start: 20210119, end: 20210119
  2287. CHLORPHENAMINE [CHLORPHENAMINE MALEATE] [Concomitant]
     Dates: start: 20210209, end: 20210209
  2288. CHLORPHENAMINE [CHLORPHENAMINE MALEATE] [Concomitant]
     Dates: start: 20210209, end: 20210209
  2289. CHLORPHENAMINE [CHLORPHENAMINE MALEATE] [Concomitant]
     Dates: start: 20210309, end: 20210309
  2290. CHLORPHENAMINE [CHLORPHENAMINE MALEATE] [Concomitant]
     Dates: start: 20210309, end: 20210309
  2291. CHLORPHENAMINE [CHLORPHENAMINE MALEATE] [Concomitant]
     Dates: start: 20201215, end: 20201215
  2292. CHLORPHENAMINE [CHLORPHENAMINE MALEATE] [Concomitant]
     Dates: start: 20201215, end: 20201215
  2293. CHLORPHENAMINE [CHLORPHENAMINE MALEATE] [Concomitant]
     Dates: start: 20210323, end: 20210323
  2294. CHLORPHENAMINE [CHLORPHENAMINE MALEATE] [Concomitant]
     Dates: start: 20210323, end: 20210323
  2295. CHLORPHENAMINE [CHLORPHENAMINE MALEATE] [Concomitant]
     Dates: start: 20210216, end: 20210216
  2296. CHLORPHENAMINE [CHLORPHENAMINE MALEATE] [Concomitant]
     Dates: start: 20210216, end: 20210216
  2297. CHLORPHENAMINE [CHLORPHENAMINE MALEATE] [Concomitant]
     Dates: start: 20201124, end: 20201124
  2298. CHLORPHENAMINE [CHLORPHENAMINE MALEATE] [Concomitant]
     Dates: start: 20201124, end: 20201124
  2299. CHLORPHENAMINE [CHLORPHENAMINE MALEATE] [Concomitant]
     Dates: start: 20201217, end: 20201217
  2300. CHLORPHENAMINE [CHLORPHENAMINE MALEATE] [Concomitant]
     Dates: start: 20201217
  2301. CHLORPHENAMINE [CHLORPHENAMINE MALEATE] [Concomitant]
     Indication: Rash maculo-papular
     Dates: start: 20201124, end: 20201124
  2302. CHLORPHENAMINE [CHLORPHENAMINE MALEATE] [Concomitant]
     Indication: Prophylaxis
     Dates: start: 20210302, end: 20210302
  2303. CHLORPHENAMINE [CHLORPHENAMINE MALEATE] [Concomitant]
     Dates: start: 20201217
  2304. CHLORPHENAMINE [CHLORPHENAMINE MALEATE] [Concomitant]
     Dates: start: 20210209, end: 20210209
  2305. CHLORPHENAMINE [CHLORPHENAMINE MALEATE] [Concomitant]
     Dates: start: 20210119, end: 20210119
  2306. CHLORPHENAMINE [CHLORPHENAMINE MALEATE] [Concomitant]
     Dates: start: 20210126, end: 20210126
  2307. CHLORPHENAMINE [CHLORPHENAMINE MALEATE] [Concomitant]
     Dates: start: 20210309, end: 20210309
  2308. CHLORPHENAMINE [CHLORPHENAMINE MALEATE] [Concomitant]
     Dates: start: 20201215, end: 20201215
  2309. CHLORPHENAMINE [CHLORPHENAMINE MALEATE] [Concomitant]
     Dates: start: 20210216, end: 20210216
  2310. CHLORPHENAMINE [CHLORPHENAMINE MALEATE] [Concomitant]
     Dates: start: 20210323, end: 20210323
  2311. CHLORPHENAMINE [CHLORPHENAMINE MALEATE] [Concomitant]
     Dates: start: 20210309, end: 20210309
  2312. CHLORPHENAMINE [CHLORPHENAMINE MALEATE] [Concomitant]
     Dates: start: 20210309, end: 20210309
  2313. CHLORPHENAMINE [CHLORPHENAMINE MALEATE] [Concomitant]
     Dates: start: 20210216, end: 20210216
  2314. CHLORPHENAMINE [CHLORPHENAMINE MALEATE] [Concomitant]
     Dates: start: 20210216, end: 20210216
  2315. CHLORPHENAMINE [CHLORPHENAMINE MALEATE] [Concomitant]
     Dates: start: 20201124, end: 20201124
  2316. CHLORPHENAMINE [CHLORPHENAMINE MALEATE] [Concomitant]
     Dates: start: 20201124, end: 20201124
  2317. CHLORPHENAMINE [CHLORPHENAMINE MALEATE] [Concomitant]
     Dates: start: 20210302, end: 20210302
  2318. CHLORPHENAMINE [CHLORPHENAMINE MALEATE] [Concomitant]
     Dates: start: 20210302, end: 20210302
  2319. CHLORPHENAMINE [CHLORPHENAMINE MALEATE] [Concomitant]
     Dates: start: 20210126, end: 20210126
  2320. CHLORPHENAMINE [CHLORPHENAMINE MALEATE] [Concomitant]
     Dates: start: 20210126, end: 20210126
  2321. CHLORPHENAMINE [CHLORPHENAMINE MALEATE] [Concomitant]
     Dates: start: 20210119, end: 20210119
  2322. CHLORPHENAMINE [CHLORPHENAMINE MALEATE] [Concomitant]
     Dates: start: 20210119, end: 20210119
  2323. CHLORPHENAMINE [CHLORPHENAMINE MALEATE] [Concomitant]
     Dates: start: 20201217
  2324. CHLORPHENAMINE [CHLORPHENAMINE MALEATE] [Concomitant]
     Dates: start: 20201217
  2325. CHLORPHENAMINE [CHLORPHENAMINE MALEATE] [Concomitant]
     Dates: start: 20210323, end: 20210323
  2326. CHLORPHENAMINE [CHLORPHENAMINE MALEATE] [Concomitant]
     Dates: start: 20210323, end: 20210323
  2327. CHLORPHENAMINE [CHLORPHENAMINE MALEATE] [Concomitant]
     Dates: start: 20210209, end: 20210209
  2328. CHLORPHENAMINE [CHLORPHENAMINE MALEATE] [Concomitant]
     Dates: start: 20210209, end: 20210209
  2329. CHLORPHENAMINE [CHLORPHENAMINE MALEATE] [Concomitant]
     Dates: start: 20201215, end: 20201215
  2330. CHLORPHENAMINE [CHLORPHENAMINE MALEATE] [Concomitant]
     Dates: start: 20201215, end: 20201215
  2331. CHLORPHENAMINE [CHLORPHENAMINE MALEATE] [Concomitant]
     Dates: start: 20210119, end: 20210119
  2332. CHLORPHENAMINE [CHLORPHENAMINE MALEATE] [Concomitant]
     Dates: start: 20210119, end: 20210119
  2333. CHLORPHENAMINE [CHLORPHENAMINE MALEATE] [Concomitant]
     Dates: start: 20210216, end: 20210216
  2334. CHLORPHENAMINE [CHLORPHENAMINE MALEATE] [Concomitant]
     Dates: start: 20210216, end: 20210216
  2335. CHLORPHENAMINE [CHLORPHENAMINE MALEATE] [Concomitant]
     Dates: start: 20201217
  2336. CHLORPHENAMINE [CHLORPHENAMINE MALEATE] [Concomitant]
     Dates: start: 20201217
  2337. CHLORPHENAMINE [CHLORPHENAMINE MALEATE] [Concomitant]
     Dates: start: 20210302, end: 20210302
  2338. CHLORPHENAMINE [CHLORPHENAMINE MALEATE] [Concomitant]
     Dates: start: 20210302, end: 20210302
  2339. CHLORPHENAMINE [CHLORPHENAMINE MALEATE] [Concomitant]
     Dates: start: 20201215, end: 20201215
  2340. CHLORPHENAMINE [CHLORPHENAMINE MALEATE] [Concomitant]
     Dates: start: 20201215, end: 20201215
  2341. CHLORPHENAMINE [CHLORPHENAMINE MALEATE] [Concomitant]
     Dates: start: 20201124, end: 20201124
  2342. CHLORPHENAMINE [CHLORPHENAMINE MALEATE] [Concomitant]
     Dates: start: 20201124, end: 20201124
  2343. CHLORPHENAMINE [CHLORPHENAMINE MALEATE] [Concomitant]
     Dates: start: 20210323, end: 20210323
  2344. CHLORPHENAMINE [CHLORPHENAMINE MALEATE] [Concomitant]
     Dates: start: 20210323, end: 20210323
  2345. CHLORPHENAMINE [CHLORPHENAMINE MALEATE] [Concomitant]
     Dates: start: 20210309, end: 20210309
  2346. CHLORPHENAMINE [CHLORPHENAMINE MALEATE] [Concomitant]
     Dates: start: 20210309, end: 20210309
  2347. CHLORPHENAMINE [CHLORPHENAMINE MALEATE] [Concomitant]
     Dates: start: 20210209, end: 20210209
  2348. CHLORPHENAMINE [CHLORPHENAMINE MALEATE] [Concomitant]
     Dates: start: 20210209, end: 20210209
  2349. CHLORPHENAMINE [CHLORPHENAMINE MALEATE] [Concomitant]
     Dates: start: 20210126, end: 20210126
  2350. CHLORPHENAMINE [CHLORPHENAMINE MALEATE] [Concomitant]
     Dates: start: 20210126, end: 20210126
  2351. CHLORPHENAMINE [CHLORPHENAMINE MALEATE] [Concomitant]
     Indication: Rash maculo-papular
     Dates: start: 20210206, end: 20210206
  2352. CHLORPHENAMINE [CHLORPHENAMINE MALEATE] [Concomitant]
     Indication: Prophylaxis
     Dates: start: 20210206, end: 20210206
  2353. CHLORPHENAMINE [CHLORPHENAMINE MALEATE] [Concomitant]
  2354. CHLORPHENAMINE [CHLORPHENAMINE MALEATE] [Concomitant]
  2355. CHLORPHENAMINE [CHLORPHENAMINE MALEATE] [Concomitant]
     Dates: start: 20201217
  2356. CHLORPHENAMINE [CHLORPHENAMINE MALEATE] [Concomitant]
  2357. CHLORPHENAMINE [CHLORPHENAMINE MALEATE] [Concomitant]
  2358. CHLORPHENAMINE [CHLORPHENAMINE MALEATE] [Concomitant]
     Dates: start: 20201124, end: 20201124
  2359. CHLORPHENAMINE [CHLORPHENAMINE MALEATE] [Concomitant]
     Dates: start: 20201124, end: 20201124
  2360. CODEINE PHOSPHATE [Concomitant]
     Active Substance: CODEINE PHOSPHATE
     Indication: Pain
     Route: 065
     Dates: start: 20201123
  2361. CODEINE PHOSPHATE [Concomitant]
     Active Substance: CODEINE PHOSPHATE
     Route: 065
     Dates: start: 20201224, end: 20201224
  2362. CODEINE PHOSPHATE [Concomitant]
     Active Substance: CODEINE PHOSPHATE
     Indication: Pain
     Dates: start: 20201123
  2363. CODEINE PHOSPHATE [Concomitant]
     Active Substance: CODEINE PHOSPHATE
     Dates: start: 20201224, end: 20201224
  2364. CODEINE PHOSPHATE [Concomitant]
     Active Substance: CODEINE PHOSPHATE
     Dates: start: 20201123
  2365. CODEINE PHOSPHATE [Concomitant]
     Active Substance: CODEINE PHOSPHATE
     Dates: start: 20201123
  2366. CODEINE PHOSPHATE [Concomitant]
     Active Substance: CODEINE PHOSPHATE
     Dates: start: 20201224, end: 20201224
  2367. CODEINE PHOSPHATE [Concomitant]
     Active Substance: CODEINE PHOSPHATE
     Dates: start: 20201224, end: 20201224
  2368. CODEINE PHOSPHATE [Concomitant]
     Active Substance: CODEINE PHOSPHATE
     Dates: start: 20201123
  2369. CODEINE PHOSPHATE [Concomitant]
     Active Substance: CODEINE PHOSPHATE
     Dates: start: 20201224, end: 20201224
  2370. CODEINE PHOSPHATE [Concomitant]
     Active Substance: CODEINE PHOSPHATE
     Dates: start: 20201123
  2371. CODEINE PHOSPHATE [Concomitant]
     Active Substance: CODEINE PHOSPHATE
     Dates: start: 20201224, end: 20201224
  2372. CODEINE PHOSPHATE [Concomitant]
     Active Substance: CODEINE PHOSPHATE
     Dates: start: 20201224, end: 20201224
  2373. CODEINE PHOSPHATE [Concomitant]
     Active Substance: CODEINE PHOSPHATE
     Dates: start: 20201224, end: 20201224
  2374. CODEINE PHOSPHATE [Concomitant]
     Active Substance: CODEINE PHOSPHATE
     Dates: start: 20201224, end: 20201224
  2375. CODEINE PHOSPHATE [Concomitant]
     Active Substance: CODEINE PHOSPHATE
     Dates: start: 20201224, end: 20201224
  2376. CODEINE PHOSPHATE [Concomitant]
     Active Substance: CODEINE PHOSPHATE
     Dates: start: 20201224, end: 20201224
  2377. CODEINE PHOSPHATE [Concomitant]
     Active Substance: CODEINE PHOSPHATE
     Dates: start: 20201224, end: 20201224
  2378. CODEINE PHOSPHATE [Concomitant]
     Active Substance: CODEINE PHOSPHATE
     Dates: start: 20201224, end: 20201224
  2379. CODEINE PHOSPHATE [Concomitant]
     Active Substance: CODEINE PHOSPHATE
     Dates: start: 20201224, end: 20201224
  2380. CODEINE PHOSPHATE [Concomitant]
     Active Substance: CODEINE PHOSPHATE
     Dates: start: 20201224, end: 20201224
  2381. CODEINE PHOSPHATE [Concomitant]
     Active Substance: CODEINE PHOSPHATE
     Dates: start: 20201224, end: 20201224
  2382. CODEINE PHOSPHATE [Concomitant]
     Active Substance: CODEINE PHOSPHATE
     Dates: start: 20201224, end: 20201224
  2383. CODEINE PHOSPHATE [Concomitant]
     Active Substance: CODEINE PHOSPHATE
     Dates: start: 20201123
  2384. CODEINE PHOSPHATE [Concomitant]
     Active Substance: CODEINE PHOSPHATE
     Dates: start: 20201123
  2385. OMEPRAZOLE MAGNESIUM [Concomitant]
     Active Substance: OMEPRAZOLE MAGNESIUM
     Indication: Gastrointestinal disorder prophylaxis
     Route: 065
  2386. OMEPRAZOLE MAGNESIUM [Concomitant]
     Active Substance: OMEPRAZOLE MAGNESIUM
     Route: 065
     Dates: start: 20201118
  2387. OMEPRAZOLE SODIUM [Concomitant]
     Active Substance: OMEPRAZOLE SODIUM
     Indication: Gastrointestinal disorder prophylaxis
     Dates: start: 20201118
  2388. OMEPRAZOLE SODIUM [Concomitant]
     Active Substance: OMEPRAZOLE SODIUM
     Dates: start: 20201118
  2389. OMEPRAZOLE SODIUM [Concomitant]
     Active Substance: OMEPRAZOLE SODIUM
  2390. OMEPRAZOLE SODIUM [Concomitant]
     Active Substance: OMEPRAZOLE SODIUM
  2391. OMEPRAZOLE SODIUM [Concomitant]
     Active Substance: OMEPRAZOLE SODIUM
     Dates: start: 20201118
  2392. OMEPRAZOLE SODIUM [Concomitant]
     Active Substance: OMEPRAZOLE SODIUM
  2393. OMEPRAZOLE SODIUM [Concomitant]
     Active Substance: OMEPRAZOLE SODIUM
  2394. OMEPRAZOLE SODIUM [Concomitant]
     Active Substance: OMEPRAZOLE SODIUM
  2395. OMEPRAZOLE SODIUM [Concomitant]
     Active Substance: OMEPRAZOLE SODIUM
  2396. OMEPRAZOLE SODIUM [Concomitant]
     Active Substance: OMEPRAZOLE SODIUM
  2397. OMEPRAZOLE SODIUM [Concomitant]
     Active Substance: OMEPRAZOLE SODIUM
  2398. OMEPRAZOLE SODIUM [Concomitant]
     Active Substance: OMEPRAZOLE SODIUM
  2399. OMEPRAZOLE SODIUM [Concomitant]
     Active Substance: OMEPRAZOLE SODIUM
  2400. OMEPRAZOLE SODIUM [Concomitant]
     Active Substance: OMEPRAZOLE SODIUM
  2401. OMEPRAZOLE SODIUM [Concomitant]
     Active Substance: OMEPRAZOLE SODIUM
  2402. OMEPRAZOLE SODIUM [Concomitant]
     Active Substance: OMEPRAZOLE SODIUM
  2403. OMEPRAZOLE SODIUM [Concomitant]
     Active Substance: OMEPRAZOLE SODIUM
  2404. OMEPRAZOLE SODIUM [Concomitant]
     Active Substance: OMEPRAZOLE SODIUM
  2405. OMEPRAZOLE SODIUM [Concomitant]
     Active Substance: OMEPRAZOLE SODIUM
  2406. OMEPRAZOLE SODIUM [Concomitant]
     Active Substance: OMEPRAZOLE SODIUM
  2407. OMEPRAZOLE SODIUM [Concomitant]
     Active Substance: OMEPRAZOLE SODIUM
  2408. OMEPRAZOLE SODIUM [Concomitant]
     Active Substance: OMEPRAZOLE SODIUM
  2409. OMEPRAZOLE SODIUM [Concomitant]
     Active Substance: OMEPRAZOLE SODIUM
  2410. OMEPRAZOLE SODIUM [Concomitant]
     Active Substance: OMEPRAZOLE SODIUM
  2411. OMEPRAZOLE SODIUM [Concomitant]
     Active Substance: OMEPRAZOLE SODIUM
  2412. OMEPRAZOLE SODIUM [Concomitant]
     Active Substance: OMEPRAZOLE SODIUM
  2413. OMEPRAZOLE SODIUM [Concomitant]
     Active Substance: OMEPRAZOLE SODIUM
  2414. OMEPRAZOLE SODIUM [Concomitant]
     Active Substance: OMEPRAZOLE SODIUM
  2415. OMEPRAZOLE SODIUM [Concomitant]
     Active Substance: OMEPRAZOLE SODIUM
  2416. OMEPRAZOLE SODIUM [Concomitant]
     Active Substance: OMEPRAZOLE SODIUM
  2417. OMEPRAZOLE SODIUM [Concomitant]
     Active Substance: OMEPRAZOLE SODIUM
  2418. OMEPRAZOLE SODIUM [Concomitant]
     Active Substance: OMEPRAZOLE SODIUM
  2419. OMEPRAZOLE SODIUM [Concomitant]
     Active Substance: OMEPRAZOLE SODIUM
  2420. ALLOPURINOL SODIUM [Concomitant]
     Active Substance: ALLOPURINOL SODIUM
     Indication: Prophylaxis
     Route: 065
     Dates: start: 20201118
  2421. ALLOPURINOL SODIUM [Concomitant]
     Active Substance: ALLOPURINOL SODIUM
     Dates: start: 20201118
  2422. ALLOPURINOL SODIUM [Concomitant]
     Active Substance: ALLOPURINOL SODIUM
     Dates: start: 20201118
  2423. ALLOPURINOL SODIUM [Concomitant]
     Active Substance: ALLOPURINOL SODIUM
     Dates: start: 20201118
  2424. ALLOPURINOL SODIUM [Concomitant]
     Active Substance: ALLOPURINOL SODIUM
     Dates: start: 20201118
  2425. ALLOPURINOL SODIUM [Concomitant]
     Active Substance: ALLOPURINOL SODIUM
     Route: 065
     Dates: start: 20201118
  2426. ALLOPURINOL SODIUM [Concomitant]
     Active Substance: ALLOPURINOL SODIUM
     Dates: start: 20201118
  2427. ALLOPURINOL SODIUM [Concomitant]
     Active Substance: ALLOPURINOL SODIUM
     Dates: start: 20201118
  2428. ALLOPURINOL SODIUM [Concomitant]
     Active Substance: ALLOPURINOL SODIUM
     Dates: start: 20201118
  2429. ALLOPURINOL SODIUM [Concomitant]
     Active Substance: ALLOPURINOL SODIUM
     Dates: start: 20201118
  2430. ALLOPURINOL SODIUM [Concomitant]
     Active Substance: ALLOPURINOL SODIUM
     Dates: start: 20201118
  2431. ALLOPURINOL SODIUM [Concomitant]
     Active Substance: ALLOPURINOL SODIUM
     Dates: start: 20201118
  2432. ALLOPURINOL SODIUM [Concomitant]
     Active Substance: ALLOPURINOL SODIUM
     Dates: start: 20201118
  2433. ALLOPURINOL SODIUM [Concomitant]
     Active Substance: ALLOPURINOL SODIUM
     Dates: start: 20201118
  2434. ALLOPURINOL SODIUM [Concomitant]
     Active Substance: ALLOPURINOL SODIUM
     Dates: start: 20201118
  2435. ALLOPURINOL SODIUM [Concomitant]
     Active Substance: ALLOPURINOL SODIUM
     Dates: start: 20201118
  2436. ALLOPURINOL SODIUM [Concomitant]
     Active Substance: ALLOPURINOL SODIUM
     Dates: start: 20201118
  2437. ALLOPURINOL SODIUM [Concomitant]
     Active Substance: ALLOPURINOL SODIUM
     Dates: start: 20201118
  2438. ALLOPURINOL SODIUM [Concomitant]
     Active Substance: ALLOPURINOL SODIUM
     Dates: start: 20201118
  2439. ALLOPURINOL SODIUM [Concomitant]
     Active Substance: ALLOPURINOL SODIUM
     Dates: start: 20201118
  2440. ALLOPURINOL SODIUM [Concomitant]
     Active Substance: ALLOPURINOL SODIUM
     Dates: start: 20201118
  2441. ALLOPURINOL SODIUM [Concomitant]
     Active Substance: ALLOPURINOL SODIUM
     Dates: start: 20201118
  2442. ALLOPURINOL SODIUM [Concomitant]
     Active Substance: ALLOPURINOL SODIUM
     Dates: start: 20201118
  2443. ALLOPURINOL SODIUM [Concomitant]
     Active Substance: ALLOPURINOL SODIUM
     Dates: start: 20201118
  2444. ALLOPURINOL SODIUM [Concomitant]
     Active Substance: ALLOPURINOL SODIUM
     Dates: start: 20201118
  2445. ALLOPURINOL SODIUM [Concomitant]
     Active Substance: ALLOPURINOL SODIUM
     Dates: start: 20201118
  2446. ALLOPURINOL SODIUM [Concomitant]
     Active Substance: ALLOPURINOL SODIUM
     Dates: start: 20201118
  2447. ALLOPURINOL SODIUM [Concomitant]
     Active Substance: ALLOPURINOL SODIUM
     Dates: start: 20201118
  2448. ALLOPURINOL SODIUM [Concomitant]
     Active Substance: ALLOPURINOL SODIUM
     Dates: start: 20201118
  2449. ALLOPURINOL SODIUM [Concomitant]
     Active Substance: ALLOPURINOL SODIUM
     Dates: start: 20201118
  2450. ALLOPURINOL SODIUM [Concomitant]
     Active Substance: ALLOPURINOL SODIUM
     Dates: start: 20201118
  2451. ALLOPURINOL SODIUM [Concomitant]
     Active Substance: ALLOPURINOL SODIUM
     Dates: start: 20201118
  2452. ALLOPURINOL SODIUM [Concomitant]
     Active Substance: ALLOPURINOL SODIUM
     Dates: start: 20201118
  2453. ALLOPURINOL SODIUM [Concomitant]
     Active Substance: ALLOPURINOL SODIUM
     Dates: start: 20201118
  2454. ALLOPURINOL SODIUM [Concomitant]
     Active Substance: ALLOPURINOL SODIUM
     Dates: start: 20201118
  2455. ALLOPURINOL SODIUM [Concomitant]
     Active Substance: ALLOPURINOL SODIUM
     Dates: start: 20201118
  2456. ALLOPURINOL SODIUM [Concomitant]
     Active Substance: ALLOPURINOL SODIUM
     Dates: start: 20201118
  2457. ALLOPURINOL SODIUM [Concomitant]
     Active Substance: ALLOPURINOL SODIUM
     Dates: start: 20201118
  2458. ALLOPURINOL SODIUM [Concomitant]
     Active Substance: ALLOPURINOL SODIUM
     Dates: start: 20201118
  2459. ALLOPURINOL SODIUM [Concomitant]
     Active Substance: ALLOPURINOL SODIUM
     Dates: start: 20201118
  2460. ALLOPURINOL SODIUM [Concomitant]
     Active Substance: ALLOPURINOL SODIUM
     Dates: start: 20201118
  2461. ALLOPURINOL SODIUM [Concomitant]
     Active Substance: ALLOPURINOL SODIUM
     Dates: start: 20201118
  2462. ALLOPURINOL SODIUM [Concomitant]
     Active Substance: ALLOPURINOL SODIUM
     Dates: start: 20201118
  2463. ALLOPURINOL SODIUM [Concomitant]
     Active Substance: ALLOPURINOL SODIUM
     Dates: start: 20201118
  2464. ALLOPURINOL SODIUM [Concomitant]
     Active Substance: ALLOPURINOL SODIUM
     Dates: start: 20201118
  2465. ALLOPURINOL SODIUM [Concomitant]
     Active Substance: ALLOPURINOL SODIUM
     Dates: start: 20201118
  2466. ALLOPURINOL SODIUM [Concomitant]
     Active Substance: ALLOPURINOL SODIUM
     Dates: start: 20201118
  2467. ALLOPURINOL SODIUM [Concomitant]
     Active Substance: ALLOPURINOL SODIUM
     Dates: start: 20201118
  2468. ALLOPURINOL SODIUM [Concomitant]
     Active Substance: ALLOPURINOL SODIUM
     Dates: start: 20201118
  2469. ALLOPURINOL SODIUM [Concomitant]
     Active Substance: ALLOPURINOL SODIUM
     Dates: start: 20201118
  2470. ALLOPURINOL SODIUM [Concomitant]
     Active Substance: ALLOPURINOL SODIUM
     Indication: Prophylaxis
     Dates: start: 20201118
  2471. ALLOPURINOL SODIUM [Concomitant]
     Active Substance: ALLOPURINOL SODIUM
     Dates: start: 20201118
  2472. ALLOPURINOL SODIUM [Concomitant]
     Active Substance: ALLOPURINOL SODIUM
     Dates: start: 20201118
  2473. ALLOPURINOL SODIUM [Concomitant]
     Active Substance: ALLOPURINOL SODIUM
     Dates: start: 20201118
  2474. ALLOPURINOL SODIUM [Concomitant]
     Active Substance: ALLOPURINOL SODIUM
     Dates: start: 20201118
  2475. ALLOPURINOL SODIUM [Concomitant]
     Active Substance: ALLOPURINOL SODIUM
     Dates: start: 20201118
  2476. ALLOPURINOL SODIUM [Concomitant]
     Active Substance: ALLOPURINOL SODIUM
     Dates: start: 20201118
  2477. ALLOPURINOL SODIUM [Concomitant]
     Active Substance: ALLOPURINOL SODIUM
     Dates: start: 20201118
  2478. ALLOPURINOL SODIUM [Concomitant]
     Active Substance: ALLOPURINOL SODIUM
     Dates: start: 20201118
  2479. ALLOPURINOL SODIUM [Concomitant]
     Active Substance: ALLOPURINOL SODIUM
     Dates: start: 20201118
  2480. ALLOPURINOL SODIUM [Concomitant]
     Active Substance: ALLOPURINOL SODIUM
     Dates: start: 20201118
  2481. ALLOPURINOL SODIUM [Concomitant]
     Active Substance: ALLOPURINOL SODIUM
     Dates: start: 20201118
  2482. ALLOPURINOL SODIUM [Concomitant]
     Active Substance: ALLOPURINOL SODIUM
     Dates: start: 20201118
  2483. ALLOPURINOL SODIUM [Concomitant]
     Active Substance: ALLOPURINOL SODIUM
     Dates: start: 20201118
  2484. ALLOPURINOL SODIUM [Concomitant]
     Active Substance: ALLOPURINOL SODIUM
     Dates: start: 20201118
  2485. ALLOPURINOL SODIUM [Concomitant]
     Active Substance: ALLOPURINOL SODIUM
     Dates: start: 20201118
  2486. ALLOPURINOL SODIUM [Concomitant]
     Active Substance: ALLOPURINOL SODIUM
     Dates: start: 20201118
  2487. ALLOPURINOL SODIUM [Concomitant]
     Active Substance: ALLOPURINOL SODIUM
     Dates: start: 20201118
  2488. ALLOPURINOL SODIUM [Concomitant]
     Active Substance: ALLOPURINOL SODIUM
     Dates: start: 20201118
  2489. ALLOPURINOL SODIUM [Concomitant]
     Active Substance: ALLOPURINOL SODIUM
     Dates: start: 20201118
  2490. ALLOPURINOL SODIUM [Concomitant]
     Active Substance: ALLOPURINOL SODIUM
     Dates: start: 20201118
  2491. ALLOPURINOL SODIUM [Concomitant]
     Active Substance: ALLOPURINOL SODIUM
     Dates: start: 20201118
  2492. ALLOPURINOL SODIUM [Concomitant]
     Active Substance: ALLOPURINOL SODIUM
     Dates: start: 20201118
  2493. ALLOPURINOL SODIUM [Concomitant]
     Active Substance: ALLOPURINOL SODIUM
     Dates: start: 20201118
  2494. ALLOPURINOL SODIUM [Concomitant]
     Active Substance: ALLOPURINOL SODIUM
     Dates: start: 20201118
  2495. ALLOPURINOL SODIUM [Concomitant]
     Active Substance: ALLOPURINOL SODIUM
     Dates: start: 20201118
  2496. ALLOPURINOL SODIUM [Concomitant]
     Active Substance: ALLOPURINOL SODIUM
     Dates: start: 20201118
  2497. ALLOPURINOL SODIUM [Concomitant]
     Active Substance: ALLOPURINOL SODIUM
     Dates: start: 20201118
  2498. ALLOPURINOL SODIUM [Concomitant]
     Active Substance: ALLOPURINOL SODIUM
     Dates: start: 20201118
  2499. ALLOPURINOL SODIUM [Concomitant]
     Active Substance: ALLOPURINOL SODIUM
     Dates: start: 20201118
  2500. ALLOPURINOL SODIUM [Concomitant]
     Active Substance: ALLOPURINOL SODIUM
     Dates: start: 20201118
  2501. ALLOPURINOL SODIUM [Concomitant]
     Active Substance: ALLOPURINOL SODIUM
     Dates: start: 20201118
  2502. ALLOPURINOL SODIUM [Concomitant]
     Active Substance: ALLOPURINOL SODIUM
     Dates: start: 20201118
  2503. ALLOPURINOL SODIUM [Concomitant]
     Active Substance: ALLOPURINOL SODIUM
     Dates: start: 20201118
  2504. ALLOPURINOL SODIUM [Concomitant]
     Active Substance: ALLOPURINOL SODIUM
     Dates: start: 20201118

REACTIONS (7)
  - Death [Fatal]
  - Neutropenia [Recovered/Resolved]
  - Product use in unapproved indication [Unknown]
  - Off label use [Unknown]
  - Product use issue [Unknown]
  - Overdose [Unknown]
  - Underdose [Unknown]

NARRATIVE: CASE EVENT DATE: 20201124
